FAERS Safety Report 19035584 (Version 81)
Quarter: 2024Q2

REPORT INFORMATION
  Report Type: Spontaneous
  Country: DE (occurrence: CA)
  Receive Date: 20210320
  Receipt Date: 20240621
  Transmission Date: 20240716
  Serious: Yes (Death, Life-Threatening, Hospitalization, Disabling, Congenital Anomaly, Other)
  Sender: FDA-Public Use
  Company Number: CA-009507513-2101CAN013011

PATIENT
  Age: 80 Year
  Sex: Male
  Weight: 69 kg

DRUGS (1615)
  1. ZOCOR [Suspect]
     Active Substance: SIMVASTATIN
     Indication: Blood cholesterol increased
     Dosage: 40 MILLIGRAM, 1 EVERY 1 DAYS, BEDTIME
     Route: 048
     Dates: start: 20200527
  2. ZOCOR [Suspect]
     Active Substance: SIMVASTATIN
     Indication: Product used for unknown indication
     Dosage: 40 MILLIGRAM, 1 EVERY 1 DAYS
     Route: 048
  3. ZOCOR [Suspect]
     Active Substance: SIMVASTATIN
     Indication: Vitamin supplementation
     Dosage: 40 MILLIGRAM, 1 EVERY 1 DAYS
     Route: 065
  4. ZOCOR [Suspect]
     Active Substance: SIMVASTATIN
     Indication: Off label use
     Dosage: UNK, DOSAGE FORM FILM COATED TABLET
     Route: 065
  5. ZOCOR [Suspect]
     Active Substance: SIMVASTATIN
     Indication: Intentional product misuse
     Dosage: 40 MILLIGRAM DOSAGE FORM FILM COATED TABLET
     Route: 048
  6. ZOCOR [Suspect]
     Active Substance: SIMVASTATIN
     Indication: Sepsis
     Dosage: 2 GRAM, 1 EVERY 1 DAY; (DOSAGE FORM: POWDER FOR)
     Route: 042
  7. ZOCOR [Suspect]
     Active Substance: SIMVASTATIN
     Indication: Bacterial infection
     Dosage: UNK
     Route: 065
  8. ZOCOR [Suspect]
     Active Substance: SIMVASTATIN
     Dosage: 2 GRAM, 1 EVERY 1 DAY
     Route: 065
  9. ZOCOR [Suspect]
     Active Substance: SIMVASTATIN
     Dosage: 2 GRAM, 1 EVERY 1 DAY
     Route: 065
  10. ZOCOR [Suspect]
     Active Substance: SIMVASTATIN
     Dosage: 2 GRAM
     Route: 065
  11. ZOCOR [Suspect]
     Active Substance: SIMVASTATIN
     Dosage: UNK
     Route: 048
  12. ZOCOR [Suspect]
     Active Substance: SIMVASTATIN
     Dosage: UNK
     Route: 048
  13. ZOCOR [Suspect]
     Active Substance: SIMVASTATIN
     Dosage: UNK
     Route: 065
  14. ZOCOR [Suspect]
     Active Substance: SIMVASTATIN
     Dosage: UNK
     Route: 065
  15. ZOCOR [Suspect]
     Active Substance: SIMVASTATIN
     Dosage: 40 MILLIGRAM, QD
     Route: 048
  16. ZOCOR [Suspect]
     Active Substance: SIMVASTATIN
     Dosage: 40 MILLIGRAM,
     Route: 048
  17. ZOCOR [Suspect]
     Active Substance: SIMVASTATIN
     Indication: Vitamin supplementation
     Dosage: UNK
     Route: 048
  18. ZOCOR [Suspect]
     Active Substance: SIMVASTATIN
     Indication: Blood cholesterol increased
     Dosage: 40 MILLIGRAM, QD
     Route: 048
  19. ZOCOR [Suspect]
     Active Substance: SIMVASTATIN
     Dosage: 40 MILLIGRAM
     Route: 048
  20. ZOCOR [Suspect]
     Active Substance: SIMVASTATIN
     Dosage: UNK
     Route: 065
  21. ZOCOR [Suspect]
     Active Substance: SIMVASTATIN
     Indication: Intentional product misuse
     Dosage: 40 MILLIGRAM, 1 DOSE PER 1 D
     Route: 065
  22. ZOCOR [Suspect]
     Active Substance: SIMVASTATIN
     Indication: Vitamin supplementation
     Dosage: UNK
     Route: 065
  23. ZOCOR [Suspect]
     Active Substance: SIMVASTATIN
     Indication: Blood cholesterol increased
     Dosage: 40 MILLIGRAM
  24. ZOCOR [Suspect]
     Active Substance: SIMVASTATIN
     Dosage: 40 MILLIGRAM, 1 DOSE PER 1 D
  25. DIPROSONE [Suspect]
     Active Substance: BETAMETHASONE DIPROPIONATE
     Indication: Swelling
     Dosage: UNK UNK, PRN
     Route: 061
  26. DIPROSONE [Suspect]
     Active Substance: BETAMETHASONE DIPROPIONATE
     Indication: Off label use
     Dosage: UNK, PRN
     Route: 061
  27. DIPROSONE [Suspect]
     Active Substance: BETAMETHASONE DIPROPIONATE
     Indication: Cardiogenic shock
     Dosage: UNK, PRN
     Route: 061
  28. DIPROSONE [Suspect]
     Active Substance: BETAMETHASONE DIPROPIONATE
     Indication: Bacterial infection
     Dosage: 1 DOSAGE FORM, QD
     Route: 058
  29. DIPROSONE [Suspect]
     Active Substance: BETAMETHASONE DIPROPIONATE
     Indication: Product used for unknown indication
     Dosage: 10 MILLIGRAM, AS NECESSARY
     Route: 061
  30. DIPROSONE [Suspect]
     Active Substance: BETAMETHASONE DIPROPIONATE
     Dosage: UNK; (DOSAGE FORM: LIQUID INTRAMUSCULAR)
     Route: 065
  31. DIPROSONE [Suspect]
     Active Substance: BETAMETHASONE DIPROPIONATE
     Dosage: UNK UNK, QD
     Route: 065
  32. DIPROSONE [Suspect]
     Active Substance: BETAMETHASONE DIPROPIONATE
     Dosage: 1 DOSAGE FORM, QD
     Route: 042
  33. DIPROSONE [Suspect]
     Active Substance: BETAMETHASONE DIPROPIONATE
     Dosage: UNK
     Route: 061
  34. DIPROSONE [Suspect]
     Active Substance: BETAMETHASONE DIPROPIONATE
     Dosage: UNK (DOSAGE FORM: NOT SPECIFIED)
     Route: 061
  35. DIPROSONE [Suspect]
     Active Substance: BETAMETHASONE DIPROPIONATE
     Dosage: UNK, PRN
     Route: 061
  36. DIPROSONE [Suspect]
     Active Substance: BETAMETHASONE DIPROPIONATE
     Dosage: UNK, PRN
     Route: 061
  37. DIPROSONE [Suspect]
     Active Substance: BETAMETHASONE DIPROPIONATE
     Dosage: 1 DOSAGE FORM
     Route: 061
  38. DIPROSONE [Suspect]
     Active Substance: BETAMETHASONE DIPROPIONATE
     Dosage: 10 MILLIGRAM
     Route: 061
  39. DIPROSONE [Suspect]
     Active Substance: BETAMETHASONE DIPROPIONATE
     Dosage: UNK, 1 EVERY 1 DAYS; (DOSAGE FORM: NOT SPECIFIED)
     Route: 061
  40. DIPROSONE [Suspect]
     Active Substance: BETAMETHASONE DIPROPIONATE
     Dosage: 5 MILLIGRAM, 1 EVERY 1 DAY (DOSAGE FORM: LIQUID INTRAMUSCULAR)
     Route: 042
  41. DIPROSONE [Suspect]
     Active Substance: BETAMETHASONE DIPROPIONATE
     Dosage: UNK
     Route: 065
  42. DIPROSONE [Suspect]
     Active Substance: BETAMETHASONE DIPROPIONATE
     Dosage: UNK
     Route: 065
  43. DIPROSONE [Suspect]
     Active Substance: BETAMETHASONE DIPROPIONATE
     Dosage: UNK, PRN(AS REQUIRED)
     Route: 065
  44. DIPROSONE [Suspect]
     Active Substance: BETAMETHASONE DIPROPIONATE
     Dosage: 10 MILLIGRAM, 1 EVERY 1 DAYS
     Route: 061
  45. DIPROSONE [Suspect]
     Active Substance: BETAMETHASONE DIPROPIONATE
     Dosage: 1 DOSAGE FORM, QD
     Route: 042
  46. DIPROSONE [Suspect]
     Active Substance: BETAMETHASONE DIPROPIONATE
     Dosage: UNK
  47. DIPROSONE [Suspect]
     Active Substance: BETAMETHASONE DIPROPIONATE
     Indication: Swelling
     Dosage: 1 DOSAGE FORM TOPICAL
     Route: 061
  48. DIPROSONE [Suspect]
     Active Substance: BETAMETHASONE DIPROPIONATE
     Dosage: 1 DOSAGE FORM 1 EVERY 1 DAYS INTRAVENOUS
  49. DIPROSONE [Suspect]
     Active Substance: BETAMETHASONE DIPROPIONATE
     Dosage: UNK UNK, 1 DOSE PER 1 D
     Route: 061
  50. DIPROSONE [Suspect]
     Active Substance: BETAMETHASONE DIPROPIONATE
     Dosage: 1 DOSAGE FORM 1 EVERY 1 DAYS SUBCUTANEOUS
  51. DIPROSONE [Suspect]
     Active Substance: BETAMETHASONE DIPROPIONATE
     Dosage: UNK UNK, 1 DOSE PER 1 D
     Route: 065
  52. DIPROSONE [Suspect]
     Active Substance: BETAMETHASONE DIPROPIONATE
     Dosage: 10 MILLIGRAM 1 EVERY 1 DAYS TOPICAL
     Route: 061
  53. DEXTROSE [Suspect]
     Active Substance: DEXTROSE\DEXTROSE MONOHYDRATE
     Indication: Nutritional supplementation
     Dosage: 12.5 GRAM, QD
     Route: 042
  54. DEXTROSE [Suspect]
     Active Substance: DEXTROSE\DEXTROSE MONOHYDRATE
     Indication: Product used for unknown indication
     Dosage: 12.5 GRAM
     Route: 065
  55. DEXTROSE [Suspect]
     Active Substance: DEXTROSE\DEXTROSE MONOHYDRATE
     Indication: Off label use
     Dosage: 12.5 G, PRN;  (DOSAGE FORM: NOT SPECIFIED)
     Route: 042
  56. DEXTROSE [Suspect]
     Active Substance: DEXTROSE\DEXTROSE MONOHYDRATE
     Indication: Intentional product misuse
     Dosage: 12.5 MILLIGRAM 1 EVERY 1 DAYS INTRAVENOUS
     Route: 042
  57. DEXTROSE [Suspect]
     Active Substance: DEXTROSE\DEXTROSE MONOHYDRATE
     Indication: Product use in unapproved indication
     Dosage: 12.5 MILLIGRAM
     Route: 042
  58. DEXTROSE [Suspect]
     Active Substance: DEXTROSE\DEXTROSE MONOHYDRATE
     Indication: Anticoagulant therapy
     Dosage: 12.5 GRAM
     Route: 065
  59. DEXTROSE [Suspect]
     Active Substance: DEXTROSE\DEXTROSE MONOHYDRATE
     Dosage: 12.5 MILLIGRAM
     Route: 042
  60. DEXTROSE [Suspect]
     Active Substance: DEXTROSE\DEXTROSE MONOHYDRATE
     Dosage: 12.5 GRAM, 1 EVERY 1 DAYS
     Route: 042
  61. DEXTROSE [Suspect]
     Active Substance: DEXTROSE\DEXTROSE MONOHYDRATE
     Dosage: 12.5 MILLIGRAM, 1 EVERY 1 DAYS
     Route: 042
  62. DEXTROSE [Suspect]
     Active Substance: DEXTROSE\DEXTROSE MONOHYDRATE
     Dosage: 12.5 MILLIGRAM
     Route: 042
  63. DEXTROSE [Suspect]
     Active Substance: DEXTROSE\DEXTROSE MONOHYDRATE
     Dosage: 12.5 GRAM
     Route: 042
  64. DEXTROSE [Suspect]
     Active Substance: DEXTROSE\DEXTROSE MONOHYDRATE
     Dosage: 12.5 GRAM
     Route: 042
  65. DEXTROSE [Suspect]
     Active Substance: DEXTROSE\DEXTROSE MONOHYDRATE
     Dosage: 12.5 GRAM
     Route: 042
  66. DEXTROSE [Suspect]
     Active Substance: DEXTROSE\DEXTROSE MONOHYDRATE
     Dosage: UNK
     Route: 065
  67. DEXTROSE [Suspect]
     Active Substance: DEXTROSE\DEXTROSE MONOHYDRATE
     Dosage: 12.5 GRAM
     Route: 065
  68. DEXTROSE [Suspect]
     Active Substance: DEXTROSE\DEXTROSE MONOHYDRATE
     Dosage: 12.5 GRAM
     Route: 042
  69. DEXTROSE [Suspect]
     Active Substance: DEXTROSE\DEXTROSE MONOHYDRATE
     Dosage: 12.5 GRAM
     Route: 065
  70. DEXTROSE [Suspect]
     Active Substance: DEXTROSE\DEXTROSE MONOHYDRATE
     Dosage: 12.5 GRAM INTRAVENOUS (NOT OTHER WISE SPECIFIED)
     Route: 042
  71. DEXTROSE [Suspect]
     Active Substance: DEXTROSE\DEXTROSE MONOHYDRATE
     Dosage: UNK
     Route: 065
  72. DEXTROSE [Suspect]
     Active Substance: DEXTROSE\DEXTROSE MONOHYDRATE
     Dosage: 12.5 MILLIGRAM, QD; (DOSAGE FORM: NOT SPECIFIED)
     Route: 065
  73. DEXTROSE [Suspect]
     Active Substance: DEXTROSE\DEXTROSE MONOHYDRATE
     Dosage: 1 DOSAGE FORM, 1 DOSE PER 1 D
     Route: 058
  74. DEXTROSE [Suspect]
     Active Substance: DEXTROSE\DEXTROSE MONOHYDRATE
     Dosage: 250 MILLILITER, 1 DOSE PER 1 D
     Route: 065
  75. DEXTROSE [Suspect]
     Active Substance: DEXTROSE\DEXTROSE MONOHYDRATE
     Dosage: 50 MILLILITER, 1 DOSE PER 1 D
     Route: 065
  76. DEXTROSE [Suspect]
     Active Substance: DEXTROSE\DEXTROSE MONOHYDRATE
     Dosage: 50 MILLILITER
     Route: 042
  77. DEXTROSE [Suspect]
     Active Substance: DEXTROSE\DEXTROSE MONOHYDRATE
     Dosage: 12.5 MILLIGRAM, QD; (DOSAGE FORM: NOT SPECIFIED)
     Route: 065
  78. DEXTROSE [Suspect]
     Active Substance: DEXTROSE\DEXTROSE MONOHYDRATE
     Dosage: 1.25 GRAM, 1 DOSE PER 1D
     Route: 042
  79. DEXTROSE [Suspect]
     Active Substance: DEXTROSE\DEXTROSE MONOHYDRATE
     Dosage: 12.5 MILLIGRAM, QD; (DOSAGE FORM: NOT SPECIFIED)
     Route: 042
  80. DEXTROSE [Suspect]
     Active Substance: DEXTROSE\DEXTROSE MONOHYDRATE
     Dosage: 12.5 GRAM, QD; (DOSAGE FORM: NOT SPECIFIED)
     Route: 065
  81. DEXTROSE [Suspect]
     Active Substance: DEXTROSE\DEXTROSE MONOHYDRATE
     Dosage: 12.5 GRAM, QD; (DOSAGE FORM: NOT SPECIFIED)
     Route: 065
  82. DEXTROSE [Suspect]
     Active Substance: DEXTROSE\DEXTROSE MONOHYDRATE
     Dosage: UNK, QD;  (DOSAGE FORM: NOT SPECIFIED)
     Route: 042
  83. DEXTROSE [Suspect]
     Active Substance: DEXTROSE\DEXTROSE MONOHYDRATE
     Dosage: 250 MILLILITER
     Route: 042
  84. DEXTROSE [Suspect]
     Active Substance: DEXTROSE\DEXTROSE MONOHYDRATE
     Dosage: 250 MILLILITER; AS REQUIRED (DOSAGE FORM: NOT SPECIFIED)
     Route: 017
  85. DEXTROSE [Suspect]
     Active Substance: DEXTROSE\DEXTROSE MONOHYDRATE
     Dosage: 12 GRAM 1 EVERY 1 DAYS INTRAVENOUS
     Route: 042
  86. DEXTROSE [Suspect]
     Active Substance: DEXTROSE\DEXTROSE MONOHYDRATE
     Dosage: 50 MILLILITER;  (DOSAGE FORM: NOT SPECIFIED)
     Route: 042
  87. DEXTROSE [Suspect]
     Active Substance: DEXTROSE\DEXTROSE MONOHYDRATE
     Dosage: 12 MILLIGRAM, QD; (DOSAGE FORM: NOT SPECIFIED)
     Route: 065
  88. DEXTROSE [Suspect]
     Active Substance: DEXTROSE\DEXTROSE MONOHYDRATE
     Dosage: UNK
     Route: 065
  89. DEXTROSE [Suspect]
     Active Substance: DEXTROSE\DEXTROSE MONOHYDRATE
     Dosage: UNK
     Route: 065
  90. DEXTROSE [Suspect]
     Active Substance: DEXTROSE\DEXTROSE MONOHYDRATE
     Dosage: 12 GRAM 1 EVERY 1 DAYS INTRAVENOUS
     Route: 065
  91. DEXTROSE [Suspect]
     Active Substance: DEXTROSE\DEXTROSE MONOHYDRATE
     Dosage: 1.25 G,
     Route: 042
  92. DEXTROSE [Suspect]
     Active Substance: DEXTROSE\DEXTROSE MONOHYDRATE
     Dosage: 12 GRAM PER KILOGRAM PER 8 HOUR QD
     Route: 042
  93. DEXTROSE [Suspect]
     Active Substance: DEXTROSE\DEXTROSE MONOHYDRATE
     Dosage: 1 DOSAGE FORM, 1 DOSE PER 1 D
     Route: 065
  94. ACETAMINOPHEN [Suspect]
     Active Substance: ACETAMINOPHEN
     Indication: Analgesic therapy
     Dosage: 650 MILLIGRAM, QD, ACETAMINOPHEN
     Route: 048
  95. ACETAMINOPHEN [Suspect]
     Active Substance: ACETAMINOPHEN
     Indication: Off label use
     Dosage: 650 MILLIGRAM, QD
     Route: 048
  96. ACETAMINOPHEN [Suspect]
     Active Substance: ACETAMINOPHEN
     Indication: Intentional product misuse
     Dosage: 650 MILLIGRAM
     Route: 048
  97. ACETAMINOPHEN [Suspect]
     Active Substance: ACETAMINOPHEN
     Dosage: 5 MG, QD
     Route: 042
  98. ACETAMINOPHEN [Suspect]
     Active Substance: ACETAMINOPHEN
     Dosage: 650 MILLIGRAM, QD
     Route: 065
  99. ALLOPURINOL [Suspect]
     Active Substance: ALLOPURINOL
     Indication: Blood uric acid increased
     Dosage: 100 MILLIGRAM, QD (MORNING)
     Route: 048
     Dates: start: 20200527
  100. ALLOPURINOL [Suspect]
     Active Substance: ALLOPURINOL
     Indication: Intentional product misuse
     Dosage: 1 DOSAGE FORM
     Route: 048
  101. ALLOPURINOL [Suspect]
     Active Substance: ALLOPURINOL
     Indication: Off label use
     Dosage: 1 DOSAGE FORM, 1 EVERY 1 DAYS
     Route: 048
  102. ALLOPURINOL [Suspect]
     Active Substance: ALLOPURINOL
     Indication: Product used for unknown indication
     Dosage: 100 MILLIGRAM, QD
     Route: 065
  103. ALLOPURINOL [Suspect]
     Active Substance: ALLOPURINOL
     Dosage: 100 MILLIGRAM, QD
  104. ALLOPURINOL [Suspect]
     Active Substance: ALLOPURINOL
     Dosage: 1 DOSAGE FORM
     Route: 048
  105. ALLOPURINOL [Suspect]
     Active Substance: ALLOPURINOL
     Dosage: 1 DOSAGE FORM
     Route: 048
  106. ALLOPURINOL [Suspect]
     Active Substance: ALLOPURINOL
     Dosage: 100 MILLIGRAM
     Route: 048
  107. ALLOPURINOL [Suspect]
     Active Substance: ALLOPURINOL
     Dosage: 100 MILLIGRAM
     Route: 065
  108. ALLOPURINOL [Suspect]
     Active Substance: ALLOPURINOL
     Dosage: 1 DOSAGE FORM
     Route: 048
  109. ALLOPURINOL [Suspect]
     Active Substance: ALLOPURINOL
     Dosage: 1 DOSAGE FORM
     Route: 048
  110. ALLOPURINOL [Suspect]
     Active Substance: ALLOPURINOL
     Dosage: UNK
     Route: 065
  111. ALLOPURINOL [Suspect]
     Active Substance: ALLOPURINOL
     Dosage: 1 DOSAGE FORM
     Route: 065
  112. ALLOPURINOL [Suspect]
     Active Substance: ALLOPURINOL
     Dosage: UNK
     Route: 048
  113. ALLOPURINOL [Suspect]
     Active Substance: ALLOPURINOL
     Dosage: UNK, 1 DOSE PER 1D
     Route: 048
  114. ALLOPURINOL [Suspect]
     Active Substance: ALLOPURINOL
     Dosage: UNK
     Route: 065
  115. ALLOPURINOL [Suspect]
     Active Substance: ALLOPURINOL
     Dosage: UNK
  116. ALLOPURINOL [Suspect]
     Active Substance: ALLOPURINOL
     Dosage: 100 MICROGRAM, QD
     Route: 048
  117. AMIODARONE HYDROCHLORIDE [Suspect]
     Active Substance: AMIODARONE HYDROCHLORIDE
     Indication: Ventricular fibrillation
     Dosage: 150 MILLIGRAM, 1 DOSE PER 1 D
     Route: 065
  118. AMIODARONE HYDROCHLORIDE [Suspect]
     Active Substance: AMIODARONE HYDROCHLORIDE
     Indication: Drug therapy
     Dosage: 150 MG, QD
     Route: 042
  119. AMIODARONE HYDROCHLORIDE [Suspect]
     Active Substance: AMIODARONE HYDROCHLORIDE
     Indication: Off label use
     Dosage: UNK, QD
     Route: 042
  120. AMIODARONE HYDROCHLORIDE [Suspect]
     Active Substance: AMIODARONE HYDROCHLORIDE
     Indication: Intentional product misuse
     Dosage: 150 MILLIGRAM INTRAVENOUS
     Route: 042
  121. AMIODARONE HYDROCHLORIDE [Suspect]
     Active Substance: AMIODARONE HYDROCHLORIDE
     Indication: Product used for unknown indication
     Dosage: 1 EVERY 1 DAY, (DOSAGE FORM: NOT SPECIFIED)
     Route: 065
  122. AMIODARONE HYDROCHLORIDE [Suspect]
     Active Substance: AMIODARONE HYDROCHLORIDE
     Dosage: 1 EVERY 1 DAYS, (DOSAGE FORM: NOT SPECIFIED)
     Route: 042
  123. AMIODARONE HYDROCHLORIDE [Suspect]
     Active Substance: AMIODARONE HYDROCHLORIDE
     Dosage: UNK
     Route: 042
  124. AMIODARONE HYDROCHLORIDE [Suspect]
     Active Substance: AMIODARONE HYDROCHLORIDE
     Dosage: UNK
     Route: 065
  125. AMIODARONE HYDROCHLORIDE [Suspect]
     Active Substance: AMIODARONE HYDROCHLORIDE
     Dosage: 150 MICROGRAM
     Route: 042
  126. AMIODARONE HYDROCHLORIDE [Suspect]
     Active Substance: AMIODARONE HYDROCHLORIDE
     Dosage: UNK
     Route: 065
  127. AMIODARONE HYDROCHLORIDE [Suspect]
     Active Substance: AMIODARONE HYDROCHLORIDE
     Dosage: 150 MILLIGRAM
     Route: 042
  128. AMIODARONE HYDROCHLORIDE [Suspect]
     Active Substance: AMIODARONE HYDROCHLORIDE
     Dosage: UNK
     Route: 042
  129. AMIODARONE HYDROCHLORIDE [Suspect]
     Active Substance: AMIODARONE HYDROCHLORIDE
     Dosage: 150 MILLIGRAM
     Route: 042
  130. AMIODARONE HYDROCHLORIDE [Suspect]
     Active Substance: AMIODARONE HYDROCHLORIDE
     Dosage: 150 MILLIGRAM
     Route: 042
  131. AMIODARONE HYDROCHLORIDE [Suspect]
     Active Substance: AMIODARONE HYDROCHLORIDE
     Dosage: 150 MILLIGRAM INTRAVENOUS (NOT OTHERWISE SPECIFIED)
     Route: 042
  132. AMIODARONE HYDROCHLORIDE [Suspect]
     Active Substance: AMIODARONE HYDROCHLORIDE
     Dosage: 1 EVERY 1 DAYS, (DOSAGE FORM: NOT SPECIFIED)
     Route: 042
  133. AMIODARONE HYDROCHLORIDE [Suspect]
     Active Substance: AMIODARONE HYDROCHLORIDE
     Dosage: 1 EVERY 1 DAYS, (DOSAGE FORM: NOT SPECIFIED)
     Route: 042
  134. AMIODARONE HYDROCHLORIDE [Suspect]
     Active Substance: AMIODARONE HYDROCHLORIDE
     Dosage: 27.78 MILLILITER
     Route: 042
  135. AMIODARONE HYDROCHLORIDE [Suspect]
     Active Substance: AMIODARONE HYDROCHLORIDE
     Dosage: 150 MILLIGRAM, QD
     Route: 042
  136. AMIODARONE HYDROCHLORIDE [Suspect]
     Active Substance: AMIODARONE HYDROCHLORIDE
     Dosage: UNK, 1 DOSE PER 1 D
     Route: 065
  137. AMIODARONE HYDROCHLORIDE [Suspect]
     Active Substance: AMIODARONE HYDROCHLORIDE
     Dosage: UNK, 1 DOSE PER 1 D
     Route: 042
  138. AMIODARONE HYDROCHLORIDE [Suspect]
     Active Substance: AMIODARONE HYDROCHLORIDE
     Dosage: UNK, 1 DOSE PER 1 D
     Route: 065
  139. AMIODARONE HYDROCHLORIDE [Suspect]
     Active Substance: AMIODARONE HYDROCHLORIDE
     Dosage: UNK
     Route: 065
  140. AMIODARONE HYDROCHLORIDE [Suspect]
     Active Substance: AMIODARONE HYDROCHLORIDE
     Dosage: UNK INTRAVENOUS
     Route: 042
  141. AMIODARONE HYDROCHLORIDE [Suspect]
     Active Substance: AMIODARONE HYDROCHLORIDE
     Dosage: 27.78 MILLIGRAM INTRAVENOUS
     Route: 042
  142. AMIODARONE HYDROCHLORIDE [Suspect]
     Active Substance: AMIODARONE HYDROCHLORIDE
     Dosage: UNK
     Route: 042
  143. AMIODARONE HYDROCHLORIDE [Suspect]
     Active Substance: AMIODARONE HYDROCHLORIDE
     Dosage: UNK INTRAVENOUS
     Route: 042
  144. SODIUM CITRATE [Suspect]
     Active Substance: SODIUM CITRATE
     Indication: Thrombosis
     Dosage: 2.5 ML
     Route: 065
  145. SODIUM CITRATE [Suspect]
     Active Substance: SODIUM CITRATE
     Indication: Anticoagulant therapy
     Dosage: 2.5 MILLIGRAM
     Route: 065
  146. SODIUM CITRATE [Suspect]
     Active Substance: SODIUM CITRATE
     Dosage: 2.5 MILLIGRAM, QD
     Route: 065
  147. SODIUM CITRATE [Suspect]
     Active Substance: SODIUM CITRATE
     Dosage: NECESSARY (4GM/100ML SOLUTION UNASSIGNED) ANTICOAGULANT
     Route: 065
  148. SODIUM CITRATE [Suspect]
     Active Substance: SODIUM CITRATE
     Dosage: UNK
     Route: 065
  149. SODIUM CITRATE [Suspect]
     Active Substance: SODIUM CITRATE
     Dosage: 2 GRAM, 1 DOSE PER 1 D
     Route: 065
  150. SODIUM CITRATE [Suspect]
     Active Substance: SODIUM CITRATE
     Dosage: 2 GRAM
     Route: 065
  151. SODIUM CITRATE [Suspect]
     Active Substance: SODIUM CITRATE
     Dosage: 2.5 MILLILITER
     Route: 065
  152. SODIUM CITRATE [Suspect]
     Active Substance: SODIUM CITRATE
     Dosage: 2.5 MILLILITER
     Route: 065
  153. SODIUM CITRATE [Suspect]
     Active Substance: SODIUM CITRATE
     Dosage: 2.5 MILLILITER
     Route: 065
  154. SODIUM CITRATE [Suspect]
     Active Substance: SODIUM CITRATE
     Dosage: 2.5 MILLIGRAM
     Route: 065
  155. SODIUM CITRATE [Suspect]
     Active Substance: SODIUM CITRATE
     Dosage: 2.5 MILLILITER
     Route: 065
  156. SODIUM CITRATE [Suspect]
     Active Substance: SODIUM CITRATE
     Dosage: 2 GRAM, QD
     Route: 065
  157. SODIUM CITRATE [Suspect]
     Active Substance: SODIUM CITRATE
     Dosage: 2.5 MILLILITER, QD
     Route: 065
  158. SODIUM CITRATE [Suspect]
     Active Substance: SODIUM CITRATE
     Dosage: 2.5 MILLILITER, AS NECESSARY; DOSAGE FORM: NOT SPECIFIED
     Route: 065
  159. SODIUM CITRATE [Suspect]
     Active Substance: SODIUM CITRATE
     Dosage: 2.5 MILLILITER, AS NECESSARY;
     Route: 065
  160. SODIUM CITRATE [Suspect]
     Active Substance: SODIUM CITRATE
     Dosage: 2.5 MILLILITER, QD; DOSAGE FORM: NOT SPECIFIED
     Route: 065
  161. SODIUM CITRATE [Suspect]
     Active Substance: SODIUM CITRATE
     Dosage: 17 GRAM
     Route: 048
  162. SODIUM CITRATE [Suspect]
     Active Substance: SODIUM CITRATE
     Dosage: UNK
     Route: 065
  163. SODIUM CITRATE [Suspect]
     Active Substance: SODIUM CITRATE
     Dosage: UNK
     Route: 065
  164. ARANESP [Suspect]
     Active Substance: DARBEPOETIN ALFA
     Indication: Anaemia
     Dosage: 0.714 MICROGRAM, QOW(ONE EVERY TWO WEEKS)
     Route: 042
  165. ARANESP [Suspect]
     Active Substance: DARBEPOETIN ALFA
     Indication: Product used for unknown indication
     Dosage: 10 MILLIGRAM, 1 DOSE PER 2 D
  166. ARANESP [Suspect]
     Active Substance: DARBEPOETIN ALFA
     Dosage: 1.42 MICROGRAM, 1 DOSE PER 1W
  167. ARANESP [Suspect]
     Active Substance: DARBEPOETIN ALFA
     Dosage: 10 MICROGRAM
  168. ARANESP [Suspect]
     Active Substance: DARBEPOETIN ALFA
     Dosage: 1.42 MICROGRAM INTRAVENOUS
  169. ARANESP [Suspect]
     Active Substance: DARBEPOETIN ALFA
     Dosage: 10 MILLIGRAM 2 EVERY 1 WEEKS INTRAVENOUS
  170. ARANESP [Suspect]
     Active Substance: DARBEPOETIN ALFA
     Dosage: UNK, QOD
     Route: 065
  171. ARANESP [Suspect]
     Active Substance: DARBEPOETIN ALFA
     Dosage: 10 MILLIGRAM, 1 DOSE PER 2W
  172. ARANESP [Suspect]
     Active Substance: DARBEPOETIN ALFA
     Dosage: 0.75 UG, QOW (EVERY 2 WEEKS),CYCLICAL
     Route: 042
  173. ARANESP [Suspect]
     Active Substance: DARBEPOETIN ALFA
     Dosage: 1.42 MICROGRAM, 1 DOSE PER 1W
     Route: 065
  174. ARANESP [Suspect]
     Active Substance: DARBEPOETIN ALFA
     Dosage: 1.42 MICROGRAM
  175. ARANESP [Suspect]
     Active Substance: DARBEPOETIN ALFA
     Dosage: 10 MICROGRAM, Q2WEEKS
  176. ARANESP [Suspect]
     Active Substance: DARBEPOETIN ALFA
     Dosage: 1.42 MICROGRAM INTRAVENOUS 1 EVERY 1 WEEKS
  177. ARANESP [Suspect]
     Active Substance: DARBEPOETIN ALFA
     Dosage: 10 MILLIGRAM, CYCLICAL
  178. ARANESP [Suspect]
     Active Substance: DARBEPOETIN ALFA
     Dosage: 0.71 MICROGRAM, 2/WEEK
     Route: 042
  179. ARANESP [Suspect]
     Active Substance: DARBEPOETIN ALFA
     Dosage: 0.71 MICROGRAM INTRAVENOUS
  180. ARANESP [Suspect]
     Active Substance: DARBEPOETIN ALFA
     Dosage: 0.71 MICROGRAM, 1 DOSE PER 1W
  181. ARANESP [Suspect]
     Active Substance: DARBEPOETIN ALFA
     Dosage: 10 MICROGRAM, QOW
     Route: 065
  182. ARANESP [Suspect]
     Active Substance: DARBEPOETIN ALFA
     Dosage: 0.71 MICROGRAM, 1 DOSE PER 1 D
  183. ARANESP [Suspect]
     Active Substance: DARBEPOETIN ALFA
     Dosage: 0.71 MICROGRAM, 1 DOSE PER 2W, 0.714 UG, QOW (SOLUTION INTRAVENOUS)
  184. ARANESP [Suspect]
     Active Substance: DARBEPOETIN ALFA
     Dosage: 0.714 MICROGRAM, 1/WEEK
  185. ARANESP [Suspect]
     Active Substance: DARBEPOETIN ALFA
     Dosage: 10 MICROGRAM, Q2WEEKS
     Route: 042
  186. ARANESP [Suspect]
     Active Substance: DARBEPOETIN ALFA
     Dosage: 0.71 MICROGRAM, QD
     Route: 042
  187. ARANESP [Suspect]
     Active Substance: DARBEPOETIN ALFA
     Dosage: 20 MILLIGRAM, 1 DOSE PER 1W
     Route: 065
  188. ARANESP [Suspect]
     Active Substance: DARBEPOETIN ALFA
     Dosage: 1.42 UG, Q2WEEKS
     Route: 042
  189. ARANESP [Suspect]
     Active Substance: DARBEPOETIN ALFA
     Dosage: UNK, QOD
     Route: 065
  190. ARANESP [Suspect]
     Active Substance: DARBEPOETIN ALFA
     Dosage: 20 MILLIGRAM INTRAVENOUS
  191. ARANESP [Suspect]
     Active Substance: DARBEPOETIN ALFA
     Dosage: 0.75 UG, QOW (EVERY 2 WEEKS)
     Route: 042
  192. ARANESP [Suspect]
     Active Substance: DARBEPOETIN ALFA
     Dosage: 10 MICROGRAM, Q2WK (EVERY TWO WEEKS)
     Route: 042
  193. ARANESP [Suspect]
     Active Substance: DARBEPOETIN ALFA
     Dosage: 10 MILLIGRAM
  194. ARANESP [Suspect]
     Active Substance: DARBEPOETIN ALFA
     Dosage: 0.71 MICROGRAM, BIW
     Route: 065
  195. ARANESP [Suspect]
     Active Substance: DARBEPOETIN ALFA
     Dosage: 10 MICROGRAM
     Route: 042
  196. ARANESP [Suspect]
     Active Substance: DARBEPOETIN ALFA
     Dosage: 0.2 MICROGRAM 1 EVERY 1 WEEKS IV
  197. ARANESP [Suspect]
     Active Substance: DARBEPOETIN ALFA
     Dosage: 0.71 MICROGRAM
     Route: 042
  198. ARANESP [Suspect]
     Active Substance: DARBEPOETIN ALFA
     Dosage: 10 MILLIGRAM, 1 DOSE PER 1W
  199. ARANESP [Suspect]
     Active Substance: DARBEPOETIN ALFA
     Dosage: 0.71 MICROGRAM
     Route: 042
  200. ARANESP [Suspect]
     Active Substance: DARBEPOETIN ALFA
     Dosage: 0.71 MICROGRAM
     Route: 042
  201. ARANESP [Suspect]
     Active Substance: DARBEPOETIN ALFA
     Dosage: 10 MILLIGRAM, CYCLICAL
  202. ARANESP [Suspect]
     Active Substance: DARBEPOETIN ALFA
     Dosage: 0.75 MICROGRAM
     Route: 042
  203. ARANESP [Suspect]
     Active Substance: DARBEPOETIN ALFA
     Dosage: 0.71 MICROGRAM
     Route: 042
  204. ARANESP [Suspect]
     Active Substance: DARBEPOETIN ALFA
     Dosage: 10 MILLIGRAM, (DOSAGE FORM: SOLUTION INTRAVENOUS)
     Route: 042
  205. ARANESP [Suspect]
     Active Substance: DARBEPOETIN ALFA
     Dosage: 0.71 MICROGRAM
     Route: 042
  206. ARANESP [Suspect]
     Active Substance: DARBEPOETIN ALFA
     Dosage: UNK
     Route: 042
  207. ARANESP [Suspect]
     Active Substance: DARBEPOETIN ALFA
     Dosage: 10 MILLIGRAM
     Route: 065
  208. ARANESP [Suspect]
     Active Substance: DARBEPOETIN ALFA
     Dosage: 0.71 MICROGRAM
     Route: 065
  209. ARANESP [Suspect]
     Active Substance: DARBEPOETIN ALFA
     Dosage: 0.202 MICROGRAM
     Route: 042
  210. ARANESP [Suspect]
     Active Substance: DARBEPOETIN ALFA
     Dosage: 0.202 MICROGRAM
     Route: 042
  211. ARANESP [Suspect]
     Active Substance: DARBEPOETIN ALFA
     Dosage: 10 MICROGRAM
     Route: 042
  212. ARANESP [Suspect]
     Active Substance: DARBEPOETIN ALFA
     Dosage: 0.71 MICROGRAM
     Route: 042
  213. ARANESP [Suspect]
     Active Substance: DARBEPOETIN ALFA
     Dosage: 10 MICROGRAM
     Route: 042
  214. ARANESP [Suspect]
     Active Substance: DARBEPOETIN ALFA
     Dosage: 0.71 MILLIGRAM, 2 DOSE PER 1W
  215. ARANESP [Suspect]
     Active Substance: DARBEPOETIN ALFA
     Dosage: UNK
     Route: 065
  216. ARANESP [Suspect]
     Active Substance: DARBEPOETIN ALFA
     Dosage: 0.71 MILLIGRAM, 1 DOSE PER 2W
  217. ARANESP [Suspect]
     Active Substance: DARBEPOETIN ALFA
     Dosage: 1.42 MILLIGRAM, 1 DOSE PER 1W
  218. ARANESP [Suspect]
     Active Substance: DARBEPOETIN ALFA
     Dosage: 20 MILLILITER, 1 DOSE PER 1W
  219. ARANESP [Suspect]
     Active Substance: DARBEPOETIN ALFA
     Dosage: UNK
  220. ARANESP [Suspect]
     Active Substance: DARBEPOETIN ALFA
     Dosage: 1 DOSAGE FORM, 1 DOSE PER 1W
  221. ARANESP [Suspect]
     Active Substance: DARBEPOETIN ALFA
     Dosage: 20 MICROGRAM 1 EVERY 1 WEEKS INTRAVENOUS
  222. ARANESP [Suspect]
     Active Substance: DARBEPOETIN ALFA
     Dosage: 10 MICROGRAM, 2 EVERY 1 WEEKS, INTRAVENOUS
  223. ARANESP [Suspect]
     Active Substance: DARBEPOETIN ALFA
     Dosage: 1.42 MILLIGRAM
  224. ARANESP [Suspect]
     Active Substance: DARBEPOETIN ALFA
     Dosage: 0.75 MILLIGRAM
  225. CALCITRIOL [Suspect]
     Active Substance: CALCITRIOL
     Indication: Vitamin D
     Dosage: 0.25 MICROGRAM
     Route: 048
  226. CALCITRIOL [Suspect]
     Active Substance: CALCITRIOL
     Indication: Product used for unknown indication
     Dosage: 0.25 MICROGRAM, QD
     Route: 048
  227. CALCITRIOL [Suspect]
     Active Substance: CALCITRIOL
     Indication: Hypovitaminosis
     Dosage: UNK, DOSAGE FORM: NOT SPECIFIED
     Route: 065
  228. CALCITRIOL [Suspect]
     Active Substance: CALCITRIOL
     Indication: Vitamin supplementation
     Dosage: 0.25 UG, QD
     Route: 065
  229. CALCITRIOL [Suspect]
     Active Substance: CALCITRIOL
     Indication: Product used for unknown indication
     Dosage: 500 MILLIGRAM, 1 EVERY 8 HOURS
  230. CALCITRIOL [Suspect]
     Active Substance: CALCITRIOL
     Indication: Vitamin D abnormal
     Dosage: 0.25 MICROGRAM, AS REQUIRED
     Route: 048
  231. CALCITRIOL [Suspect]
     Active Substance: CALCITRIOL
     Dosage: 0.25 MICROGRAM
     Route: 048
  232. CALCITRIOL [Suspect]
     Active Substance: CALCITRIOL
     Dosage: 0.25 MICROGRAM
     Route: 048
  233. CALCITRIOL [Suspect]
     Active Substance: CALCITRIOL
     Dosage: 0.25 MICROGRAM
     Route: 048
  234. CALCITRIOL [Suspect]
     Active Substance: CALCITRIOL
     Dosage: 0.25 MICROGRAM, 1 EVERY 1 DAYS (DOSAGE FORM: NOT SPECIFIED)
     Route: 048
  235. CALCITRIOL [Suspect]
     Active Substance: CALCITRIOL
     Dosage: 500 MILLIGRAM, Q8HR, DOSAGE FORM: NOT SPECIFIED
     Route: 048
  236. CALCITRIOL [Suspect]
     Active Substance: CALCITRIOL
     Dosage: 0.25 MICROGRAM, 1 EVERY 1 DAYS (DOSAGE FORM: NOT SPECIFIED)
     Route: 048
  237. CALCITRIOL [Suspect]
     Active Substance: CALCITRIOL
     Dosage: UNK
     Route: 065
  238. CALCITRIOL [Suspect]
     Active Substance: CALCITRIOL
     Dosage: UNK
     Route: 048
  239. CALCITRIOL [Suspect]
     Active Substance: CALCITRIOL
     Dosage: UNK
  240. CALCITRIOL [Suspect]
     Active Substance: CALCITRIOL
     Dosage: UNK UNK, 1 DOSE PER 1 D
     Route: 065
  241. CALCITRIOL [Suspect]
     Active Substance: CALCITRIOL
     Dosage: 0.25 MILLIGRAM, 1 DOSE PER 1D
  242. CALCITRIOL [Suspect]
     Active Substance: CALCITRIOL
     Dosage: UNK, 1 DOSE PER 1D
     Route: 048
  243. CALCITRIOL [Suspect]
     Active Substance: CALCITRIOL
     Dosage: UNK
     Route: 065
  244. CALCITRIOL [Suspect]
     Active Substance: CALCITRIOL
     Dosage: 0.25 MILLIGRAM, 1 DOSE PER 1D
     Route: 065
  245. CALCITRIOL [Suspect]
     Active Substance: CALCITRIOL
     Dosage: 0.25 MICROGRAM, 1 EVERY 1 DAYS (DOSAGE FORM: NOT SPECIFIED)
     Route: 065
  246. CEFTRIAXONE SODIUM [Suspect]
     Active Substance: CEFTRIAXONE SODIUM
     Indication: Bacterial infection
     Dosage: 2 GRAM
     Route: 042
     Dates: start: 20200530
  247. CEFTRIAXONE SODIUM [Suspect]
     Active Substance: CEFTRIAXONE SODIUM
     Indication: Product used for unknown indication
     Dosage: 2 GRAM 1 EVERY 1 DAYS INTRAVENOUS
  248. CEFTRIAXONE SODIUM [Suspect]
     Active Substance: CEFTRIAXONE SODIUM
     Indication: Sepsis
     Dosage: 2 GRAM
     Route: 042
  249. CEFTRIAXONE SODIUM [Suspect]
     Active Substance: CEFTRIAXONE SODIUM
     Indication: Off label use
     Dosage: UNK
     Route: 065
  250. CEFTRIAXONE SODIUM [Suspect]
     Active Substance: CEFTRIAXONE SODIUM
     Dosage: 2 GRAM, 1 EVERY 1 DAYS
     Route: 065
  251. CEFTRIAXONE SODIUM [Suspect]
     Active Substance: CEFTRIAXONE SODIUM
     Dosage: 2 MILLIGRAM
     Route: 042
  252. CEFTRIAXONE SODIUM [Suspect]
     Active Substance: CEFTRIAXONE SODIUM
     Dosage: 2 GRAM
     Route: 042
  253. CEFTRIAXONE SODIUM [Suspect]
     Active Substance: CEFTRIAXONE SODIUM
     Dosage: UNK
     Route: 065
  254. CEFTRIAXONE SODIUM [Suspect]
     Active Substance: CEFTRIAXONE SODIUM
     Dosage: 2 GRAM
     Route: 042
  255. CEFTRIAXONE SODIUM [Suspect]
     Active Substance: CEFTRIAXONE SODIUM
     Dosage: UNK,1 EVERY 1 DAYS(QD)
     Route: 042
  256. CEFTRIAXONE SODIUM [Suspect]
     Active Substance: CEFTRIAXONE SODIUM
     Dosage: UNK
     Route: 042
  257. CEFTRIAXONE SODIUM [Suspect]
     Active Substance: CEFTRIAXONE SODIUM
     Dosage: UNK
  258. CEFTRIAXONE SODIUM [Suspect]
     Active Substance: CEFTRIAXONE SODIUM
     Dosage: 1500 MILLIGRAM
     Route: 065
  259. CEFTRIAXONE SODIUM [Suspect]
     Active Substance: CEFTRIAXONE SODIUM
     Dosage: UNK
     Route: 065
  260. CEFTRIAXONE SODIUM [Suspect]
     Active Substance: CEFTRIAXONE SODIUM
     Dosage: UNK, 1 DOSE PER 1 D
     Route: 065
  261. FRAGMIN [Suspect]
     Active Substance: DALTEPARIN SODIUM
     Indication: Pulmonary embolism
     Dosage: UNK (DOSAGE FORM: SOLUTION INTRAVENOUS)
     Route: 065
  262. FRAGMIN [Suspect]
     Active Substance: DALTEPARIN SODIUM
     Indication: Product used for unknown indication
     Dosage: UNK
     Route: 065
  263. FRAGMIN [Suspect]
     Active Substance: DALTEPARIN SODIUM
     Indication: Thrombosis
     Dosage: UNK
     Route: 065
  264. FRAGMIN [Suspect]
     Active Substance: DALTEPARIN SODIUM
     Dosage: UNK
     Route: 065
  265. FRAGMIN [Suspect]
     Active Substance: DALTEPARIN SODIUM
     Dosage: UNK
     Route: 065
  266. FRAGMIN [Suspect]
     Active Substance: DALTEPARIN SODIUM
     Dosage: 2.5 MILLILITER 1 EVERY 1 DAYS INTRAVENOUS
     Route: 042
  267. FRAGMIN [Suspect]
     Active Substance: DALTEPARIN SODIUM
     Dosage: 2.5 MILLILITER INTRAVENOUS
     Route: 042
  268. FRAGMIN [Suspect]
     Active Substance: DALTEPARIN SODIUM
     Dosage: UNK
     Route: 048
  269. FRAGMIN [Suspect]
     Active Substance: DALTEPARIN SODIUM
     Dosage: 2.5 MILLILITER, AS NECESSARY
     Route: 065
  270. FRAGMIN [Suspect]
     Active Substance: DALTEPARIN SODIUM
     Dosage: UNK
     Route: 065
  271. FRAGMIN [Suspect]
     Active Substance: DALTEPARIN SODIUM
     Dosage: 2.5 MILLILITER, PRN
     Route: 065
  272. FRAGMIN [Suspect]
     Active Substance: DALTEPARIN SODIUM
     Dosage: 2.5 MILLIGRAM, FORLMULATION SOLUTION INTRAVENOUS
     Route: 065
  273. FRAGMIN [Suspect]
     Active Substance: DALTEPARIN SODIUM
     Dosage: UNK
     Route: 065
  274. FRAGMIN [Suspect]
     Active Substance: DALTEPARIN SODIUM
     Dosage: UNK, SOLUTION INTRAVENOUS
     Route: 065
  275. FRAGMIN [Suspect]
     Active Substance: DALTEPARIN SODIUM
     Dosage: UNK, FORMULATION SOLUTION INTRAVNOUS
     Route: 065
  276. FRAGMIN [Suspect]
     Active Substance: DALTEPARIN SODIUM
     Dosage: UNK, FORMULATION SOOLUTION INTRAVENOUS
     Route: 065
  277. FRAGMIN [Suspect]
     Active Substance: DALTEPARIN SODIUM
     Dosage: UNK, FORMULATION SOLUTION INTRAVENOUS
     Route: 065
  278. FRAGMIN [Suspect]
     Active Substance: DALTEPARIN SODIUM
     Dosage: UNK, FORMULATION SOLUTION INTRAVENOUS
     Route: 065
  279. FRAGMIN [Suspect]
     Active Substance: DALTEPARIN SODIUM
     Dosage: UNK, FORMULATION SOLUTION INTRAVENOUS
     Route: 065
  280. FRAGMIN [Suspect]
     Active Substance: DALTEPARIN SODIUM
     Dosage: UNK, FORMULATION SOLUTION INTRAVENOUS
     Route: 065
  281. FRAGMIN [Suspect]
     Active Substance: DALTEPARIN SODIUM
     Dosage: UNK
     Route: 048
  282. FRAGMIN [Suspect]
     Active Substance: DALTEPARIN SODIUM
     Dosage: 12.5 MILLILITER INTRAVENOUS
     Route: 042
  283. FRAGMIN [Suspect]
     Active Substance: DALTEPARIN SODIUM
     Dosage: UNK; DOSAGE FORM: SOLUTION INTRAVENOUS
     Route: 042
  284. FRAGMIN [Suspect]
     Active Substance: DALTEPARIN SODIUM
     Dosage: 2.5 MILLILITER, QD; DOSAGE FORM: SOLUTION INTRAVENOUS
     Route: 065
  285. FRAGMIN [Suspect]
     Active Substance: DALTEPARIN SODIUM
     Dosage: UNK; DOSAGE FORM: SOLUTION INTRAVENOUS
     Route: 048
  286. FRAGMIN [Suspect]
     Active Substance: DALTEPARIN SODIUM
     Dosage: 12.5 MILLIGRAM; DOSAGE FORM: SOLUTION INTRAVENOUS
     Route: 042
  287. FRAGMIN [Suspect]
     Active Substance: DALTEPARIN SODIUM
     Dosage: 12.5 MILLILITER INTRAVENOUS
     Route: 048
  288. FRAGMIN [Suspect]
     Active Substance: DALTEPARIN SODIUM
     Dosage: UNK
     Route: 058
  289. FRAGMIN [Suspect]
     Active Substance: DALTEPARIN SODIUM
     Dosage: 0.5 MILLILITER
     Route: 048
  290. FRAGMIN [Suspect]
     Active Substance: DALTEPARIN SODIUM
     Dosage: UNK
     Route: 042
  291. FRAGMIN [Suspect]
     Active Substance: DALTEPARIN SODIUM
     Dosage: UNK
     Route: 048
  292. FRAGMIN [Suspect]
     Active Substance: DALTEPARIN SODIUM
     Dosage: UNK
     Route: 065
  293. FRAGMIN [Suspect]
     Active Substance: DALTEPARIN SODIUM
     Dosage: 2.5 MILLILITRE, PRN
     Route: 065
  294. DOBUTAMINE HYDROCHLORIDE [Suspect]
     Active Substance: DOBUTAMINE HYDROCHLORIDE
     Indication: Cardiogenic shock
     Dosage: UNK (DOSAGE FORM: LIQUID INTRAVENOUS); DOSAGE FORM INTRAVENOUS (NOT OTHERWISE SPECIFIED)
     Route: 042
  295. DOBUTAMINE HYDROCHLORIDE [Suspect]
     Active Substance: DOBUTAMINE HYDROCHLORIDE
     Indication: Product used for unknown indication
     Dosage: UNK, ; DOSAGE FORM INTRAVENOUS (NOT OTHERWISE SPECIFIED)
     Route: 042
  296. DOBUTAMINE HYDROCHLORIDE [Suspect]
     Active Substance: DOBUTAMINE HYDROCHLORIDE
     Indication: Off label use
     Dosage: UNK
     Route: 065
  297. DOBUTAMINE HYDROCHLORIDE [Suspect]
     Active Substance: DOBUTAMINE HYDROCHLORIDE
     Dosage: UNK
     Route: 042
  298. DOBUTAMINE HYDROCHLORIDE [Suspect]
     Active Substance: DOBUTAMINE HYDROCHLORIDE
     Dosage: UNK
     Route: 065
  299. DOBUTAMINE HYDROCHLORIDE [Suspect]
     Active Substance: DOBUTAMINE HYDROCHLORIDE
     Dosage: UNK
     Route: 065
  300. DOBUTAMINE HYDROCHLORIDE [Suspect]
     Active Substance: DOBUTAMINE HYDROCHLORIDE
     Dosage: UNK
     Route: 042
  301. DOBUTAMINE HYDROCHLORIDE [Suspect]
     Active Substance: DOBUTAMINE HYDROCHLORIDE
     Dosage: UNK
     Route: 065
  302. DOBUTAMINE HYDROCHLORIDE [Suspect]
     Active Substance: DOBUTAMINE HYDROCHLORIDE
     Dosage: UNK
     Route: 065
  303. DOBUTAMINE HYDROCHLORIDE [Suspect]
     Active Substance: DOBUTAMINE HYDROCHLORIDE
     Dosage: UNK
     Route: 065
  304. DOBUTAMINE HYDROCHLORIDE [Suspect]
     Active Substance: DOBUTAMINE HYDROCHLORIDE
     Dosage: UNK
     Route: 042
  305. DOBUTAMINE HYDROCHLORIDE [Suspect]
     Active Substance: DOBUTAMINE HYDROCHLORIDE
     Dosage: UNK
     Route: 042
  306. DOBUTAMINE HYDROCHLORIDE [Suspect]
     Active Substance: DOBUTAMINE HYDROCHLORIDE
     Dosage: UNK
     Route: 048
  307. DOBUTAMINE HYDROCHLORIDE [Suspect]
     Active Substance: DOBUTAMINE HYDROCHLORIDE
     Dosage: UNK
     Route: 042
  308. DOBUTAMINE HYDROCHLORIDE [Suspect]
     Active Substance: DOBUTAMINE HYDROCHLORIDE
     Dosage: UNK
     Route: 042
  309. DOBUTAMINE HYDROCHLORIDE [Suspect]
     Active Substance: DOBUTAMINE HYDROCHLORIDE
     Dosage: UNK
     Route: 042
  310. DOBUTAMINE HYDROCHLORIDE [Suspect]
     Active Substance: DOBUTAMINE HYDROCHLORIDE
     Dosage: UNK
     Route: 042
  311. DOBUTAMINE HYDROCHLORIDE [Suspect]
     Active Substance: DOBUTAMINE HYDROCHLORIDE
     Dosage: UNK
     Route: 042
  312. DOBUTAMINE HYDROCHLORIDE [Suspect]
     Active Substance: DOBUTAMINE HYDROCHLORIDE
     Dosage: UNK
     Route: 042
  313. DOBUTAMINE HYDROCHLORIDE [Suspect]
     Active Substance: DOBUTAMINE HYDROCHLORIDE
     Dosage: UNK INTRAVENOUS (NOT OTHER WISE SPECIFIED)
     Route: 042
  314. DOBUTAMINE HYDROCHLORIDE [Suspect]
     Active Substance: DOBUTAMINE HYDROCHLORIDE
     Dosage: UNK, 1 EVERY 1 DAY; DOSAGE FORM INTRAVENOUS (NOT OTHERWISE SPECIFIED)
     Route: 042
  315. DOBUTAMINE HYDROCHLORIDE [Suspect]
     Active Substance: DOBUTAMINE HYDROCHLORIDE
     Dosage: UNK
  316. GABAPENTIN [Suspect]
     Active Substance: GABAPENTIN
     Indication: Neuralgia
     Dosage: 100 MILLIGRAM (AT BED TIME, EVERY 2 HOURS)
     Route: 048
     Dates: start: 20200527
  317. GABAPENTIN [Suspect]
     Active Substance: GABAPENTIN
     Indication: Product used for unknown indication
     Dosage: UNK; (DOSAGE FORM: NOT SPECIFIED)
     Route: 065
  318. GABAPENTIN [Suspect]
     Active Substance: GABAPENTIN
     Indication: Intentional product misuse
     Dosage: 100 MILLIGRAM, QD ORAL
  319. GABAPENTIN [Suspect]
     Active Substance: GABAPENTIN
     Indication: Bacterial infection
     Dosage: 100 MILLIGRAM 1 EVERY 1 DAYS
     Route: 065
  320. GABAPENTIN [Suspect]
     Active Substance: GABAPENTIN
     Indication: Off label use
     Dosage: UNK, FORMULATION NOT SPECIFIED
     Route: 065
  321. GABAPENTIN [Suspect]
     Active Substance: GABAPENTIN
     Indication: Intentional product misuse
     Dosage: UNK,FORMULATION NOT SPECIFIED
     Route: 065
  322. GABAPENTIN [Suspect]
     Active Substance: GABAPENTIN
     Dosage: UNK
     Route: 065
  323. GABAPENTIN [Suspect]
     Active Substance: GABAPENTIN
     Dosage: 10 MILLIGRAM, QD
  324. GABAPENTIN [Suspect]
     Active Substance: GABAPENTIN
     Dosage: UNK
     Route: 065
  325. GABAPENTIN [Suspect]
     Active Substance: GABAPENTIN
     Dosage: 10 MILLIGRAM ORAL
  326. HEPARIN SODIUM [Suspect]
     Active Substance: HEPARIN SODIUM
     Indication: Anticoagulant therapy
     Dosage: 50 MILLILITER, PRN (DOSAGE FORM: SOLUTION INTRAVENOUS)
     Route: 042
  327. HEPARIN SODIUM [Suspect]
     Active Substance: HEPARIN SODIUM
     Indication: Intentional product misuse
     Dosage: 250 MILLILITER
     Route: 042
  328. HEPARIN SODIUM [Suspect]
     Active Substance: HEPARIN SODIUM
     Indication: Off label use
     Dosage: 50 MILLILITER, QD
     Route: 042
  329. HEPARIN SODIUM [Suspect]
     Active Substance: HEPARIN SODIUM
     Dosage: 50 MILLILITER, PRN; (DOSAGE FORM: NOT SPECIFIED)
     Route: 065
  330. HEPARIN SODIUM [Suspect]
     Active Substance: HEPARIN SODIUM
     Dosage: 250 MILLILITER, PRN CYCLIC
     Route: 042
  331. HEPARIN SODIUM [Suspect]
     Active Substance: HEPARIN SODIUM
     Dosage: 50 ML
     Route: 042
  332. HEPARIN SODIUM [Suspect]
     Active Substance: HEPARIN SODIUM
     Dosage: UNK
     Route: 065
  333. HEPARIN SODIUM [Suspect]
     Active Substance: HEPARIN SODIUM
     Dosage: 250 ML (250 UNK)
     Route: 042
  334. HEPARIN SODIUM [Suspect]
     Active Substance: HEPARIN SODIUM
     Dosage: UNK
     Route: 065
  335. HEPARIN SODIUM [Suspect]
     Active Substance: HEPARIN SODIUM
     Dosage: UNK
     Route: 065
  336. HEPARIN SODIUM [Suspect]
     Active Substance: HEPARIN SODIUM
     Dosage: 250 MILLILITER, FORMULATION : SOLUTION INTRAVENOUS
     Route: 042
  337. HEPARIN SODIUM [Suspect]
     Active Substance: HEPARIN SODIUM
     Dosage: UNK, , FORMULATION : SOLUTION INNTRAVENOUS
     Route: 042
  338. HEPARIN SODIUM [Suspect]
     Active Substance: HEPARIN SODIUM
     Dosage: 50 MILLILITER
     Route: 042
  339. HEPARIN SODIUM [Suspect]
     Active Substance: HEPARIN SODIUM
     Dosage: 50 MILLILITER
     Route: 042
  340. HEPARIN SODIUM [Suspect]
     Active Substance: HEPARIN SODIUM
     Dosage: 50 MILLILITER
     Route: 065
  341. HEPARIN SODIUM [Suspect]
     Active Substance: HEPARIN SODIUM
     Dosage: 50 MILLILITER
     Route: 042
  342. HEPARIN SODIUM [Suspect]
     Active Substance: HEPARIN SODIUM
     Dosage: 250 MILLILITER
     Route: 042
  343. HEPARIN SODIUM [Suspect]
     Active Substance: HEPARIN SODIUM
     Dosage: 50 MILLILITER
     Route: 042
  344. HEPARIN SODIUM [Suspect]
     Active Substance: HEPARIN SODIUM
     Dosage: 250 MILLILITER
     Route: 042
  345. HEPARIN SODIUM [Suspect]
     Active Substance: HEPARIN SODIUM
     Dosage: 250 MILLILITER
     Route: 042
  346. HEPARIN SODIUM [Suspect]
     Active Substance: HEPARIN SODIUM
     Dosage: 50 MILLILITER INTRAVENOUS
     Route: 042
  347. HEPARIN SODIUM [Suspect]
     Active Substance: HEPARIN SODIUM
     Dosage: 250 MILLILITER INTRAVENOUS (NOT OTHERWISE SPECIFIED)
     Route: 042
  348. HEPARIN SODIUM [Suspect]
     Active Substance: HEPARIN SODIUM
     Dosage: 50 MILLILITER, 1 EVERY1 DAY INTRAVENOUS (NOT OTHER WISE SPECIFIED)
     Route: 042
  349. HEPARIN SODIUM [Suspect]
     Active Substance: HEPARIN SODIUM
     Dosage: 50 MILLILITER, QD; (DOSAGE FORM: SOLUTION INTRAVENOUS)
     Route: 065
  350. HEPARIN SODIUM [Suspect]
     Active Substance: HEPARIN SODIUM
     Dosage: 50 MILLILITER, PRN; (DOSAGE FORM: SOLUTION INTRAVENOUS)
     Route: 065
  351. HEPARIN SODIUM [Suspect]
     Active Substance: HEPARIN SODIUM
     Dosage: 250 MILLILITER, PRN; INTRAVENOUS (NOT OTHERWISE SPECIFIED)
     Route: 042
  352. HEPARIN SODIUM [Suspect]
     Active Substance: HEPARIN SODIUM
     Dosage: UNK, PRN; (DOSAGE FORM: SOLUTION INTRAVENOUS)
     Route: 042
  353. HEPARIN SODIUM [Suspect]
     Active Substance: HEPARIN SODIUM
     Dosage: 250 MILLILITER, PRN; INTRAVENOUS (NOT OTHERWISE SPECIFIED)
     Route: 065
  354. HEPARIN SODIUM [Suspect]
     Active Substance: HEPARIN SODIUM
     Dosage: 50 MILLILITER, QD; (DOSAGE FORM: SOLUTION INTRAVENOUS)
     Route: 065
  355. HEPARIN SODIUM [Suspect]
     Active Substance: HEPARIN SODIUM
     Dosage: UNK
     Route: 017
  356. HEPARIN SODIUM [Suspect]
     Active Substance: HEPARIN SODIUM
     Dosage: 50 MILLILITER
     Route: 017
  357. HEPARIN SODIUM [Suspect]
     Active Substance: HEPARIN SODIUM
     Dosage: 250 MILLILITER, QD
     Route: 065
  358. HEPARIN SODIUM [Suspect]
     Active Substance: HEPARIN SODIUM
     Dosage: 50 MILLILITER, PRN
     Route: 065
  359. HEPARIN SODIUM [Suspect]
     Active Substance: HEPARIN SODIUM
     Dosage: 50 MILLILITER INTRAVENOUS
     Route: 017
  360. HEPARIN SODIUM [Suspect]
     Active Substance: HEPARIN SODIUM
     Dosage: 250 MILLILITER, QD
     Route: 042
  361. HEPARIN SODIUM [Suspect]
     Active Substance: HEPARIN SODIUM
     Dosage: UNK
     Route: 017
  362. HEPARIN SODIUM [Suspect]
     Active Substance: HEPARIN SODIUM
     Dosage: UNK
     Route: 042
  363. HEPARIN SODIUM [Suspect]
     Active Substance: HEPARIN SODIUM
     Dosage: UNK UNK, 1 DOSE PER 1 D
     Route: 042
  364. HYDROMORPHONE HYDROCHLORIDE [Suspect]
     Active Substance: HYDROMORPHONE HYDROCHLORIDE
     Indication: Analgesic therapy
     Dosage: (1 MILLIGRAM, QD (Q4H, Q6H)), (6 MILLIGRAM, Q6H)
     Route: 058
  365. HYDROMORPHONE HYDROCHLORIDE [Suspect]
     Active Substance: HYDROMORPHONE HYDROCHLORIDE
     Indication: Off label use
     Dosage: 1 MILLIGRAM, Q4H
     Route: 058
  366. HYDROMORPHONE HYDROCHLORIDE [Suspect]
     Active Substance: HYDROMORPHONE HYDROCHLORIDE
     Dosage: 1 MILLIGRAM, Q6H
     Route: 065
  367. HYDROMORPHONE HYDROCHLORIDE [Suspect]
     Active Substance: HYDROMORPHONE HYDROCHLORIDE
     Dosage: 6 MILLIGRAM, Q6H
     Route: 058
  368. HYDROMORPHONE HYDROCHLORIDE [Suspect]
     Active Substance: HYDROMORPHONE HYDROCHLORIDE
     Dosage: 1 MILLIGRAM, QD
     Route: 058
  369. HYDROMORPHONE HYDROCHLORIDE [Suspect]
     Active Substance: HYDROMORPHONE HYDROCHLORIDE
     Dosage: 1 MILLIGRAM,EVERY 6 DAYS
     Route: 058
  370. HYDROMORPHONE HYDROCHLORIDE [Suspect]
     Active Substance: HYDROMORPHONE HYDROCHLORIDE
     Dosage: 6 MG, Q6HR (EVERY 6 HOURS)
     Route: 058
  371. HYDROMORPHONE HYDROCHLORIDE [Suspect]
     Active Substance: HYDROMORPHONE HYDROCHLORIDE
     Dosage: 40 MG, Q8H 6 MG, QID
     Route: 065
  372. HYDROMORPHONE HYDROCHLORIDE [Suspect]
     Active Substance: HYDROMORPHONE HYDROCHLORIDE
     Dosage: 1 MG
     Route: 058
  373. HYDROMORPHONE HYDROCHLORIDE [Suspect]
     Active Substance: HYDROMORPHONE HYDROCHLORIDE
     Dosage: 6 MG, Q5H
     Route: 058
  374. HYDROMORPHONE HYDROCHLORIDE [Suspect]
     Active Substance: HYDROMORPHONE HYDROCHLORIDE
     Dosage: 96 MG, QD
     Route: 058
  375. HYDROMORPHONE HYDROCHLORIDE [Suspect]
     Active Substance: HYDROMORPHONE HYDROCHLORIDE
     Dosage: 4 MG, Q4H
     Route: 058
  376. HYDROMORPHONE HYDROCHLORIDE [Suspect]
     Active Substance: HYDROMORPHONE HYDROCHLORIDE
     Dosage: 24 MILLIGRAM, Q6H
     Route: 058
  377. HYDROMORPHONE HYDROCHLORIDE [Suspect]
     Active Substance: HYDROMORPHONE HYDROCHLORIDE
     Dosage: 24 MG, Q4H
     Route: 058
  378. HYDROMORPHONE HYDROCHLORIDE [Suspect]
     Active Substance: HYDROMORPHONE HYDROCHLORIDE
     Dosage: 17 MG, QD
     Route: 058
  379. HYDROMORPHONE HYDROCHLORIDE [Suspect]
     Active Substance: HYDROMORPHONE HYDROCHLORIDE
     Dosage: 6 MG, QID
     Route: 058
  380. HYDROMORPHONE HYDROCHLORIDE [Suspect]
     Active Substance: HYDROMORPHONE HYDROCHLORIDE
     Dosage: 6 MG, Q4H
     Route: 058
  381. HYDROMORPHONE HYDROCHLORIDE [Suspect]
     Active Substance: HYDROMORPHONE HYDROCHLORIDE
     Dosage: 1 MG, 1 EVERY 4 HOURS
     Route: 065
  382. HYDROMORPHONE HYDROCHLORIDE [Suspect]
     Active Substance: HYDROMORPHONE HYDROCHLORIDE
     Dosage: 6 MILLIGRAM, QID
     Route: 065
  383. HYDROMORPHONE HYDROCHLORIDE [Suspect]
     Active Substance: HYDROMORPHONE HYDROCHLORIDE
     Dosage: 6 MILLIGRAM
     Route: 065
  384. HYDROMORPHONE HYDROCHLORIDE [Suspect]
     Active Substance: HYDROMORPHONE HYDROCHLORIDE
     Dosage: 1 MILLIGRAM
     Route: 058
  385. HYDROMORPHONE HYDROCHLORIDE [Suspect]
     Active Substance: HYDROMORPHONE HYDROCHLORIDE
     Dosage: 6 MILLIGRAM
     Route: 058
  386. HYDROMORPHONE HYDROCHLORIDE [Suspect]
     Active Substance: HYDROMORPHONE HYDROCHLORIDE
     Dosage: 6 MILLIGRAM
     Route: 058
  387. HYDROMORPHONE HYDROCHLORIDE [Suspect]
     Active Substance: HYDROMORPHONE HYDROCHLORIDE
     Dosage: 6 MILLIGRAM
     Route: 058
  388. HYDROMORPHONE HYDROCHLORIDE [Suspect]
     Active Substance: HYDROMORPHONE HYDROCHLORIDE
     Dosage: 6 MILLIGRAM
     Route: 058
  389. HYDROMORPHONE HYDROCHLORIDE [Suspect]
     Active Substance: HYDROMORPHONE HYDROCHLORIDE
     Dosage: 1 MILLIGRAM
     Route: 058
  390. HYDROMORPHONE HYDROCHLORIDE [Suspect]
     Active Substance: HYDROMORPHONE HYDROCHLORIDE
     Dosage: 17 MILLIGRAM
     Route: 065
  391. HYDROMORPHONE HYDROCHLORIDE [Suspect]
     Active Substance: HYDROMORPHONE HYDROCHLORIDE
     Dosage: 4 MILLIGRAM, FORMULATION NOT SPECIFIED
     Route: 058
  392. HYDROMORPHONE HYDROCHLORIDE [Suspect]
     Active Substance: HYDROMORPHONE HYDROCHLORIDE
     Dosage: 1 MILLIGRAM, FORMULATION NOT SPECIFIED
     Route: 042
  393. HYDROMORPHONE HYDROCHLORIDE [Suspect]
     Active Substance: HYDROMORPHONE HYDROCHLORIDE
     Dosage: 6 MILLIGRAM
     Route: 058
  394. HYDROMORPHONE HYDROCHLORIDE [Suspect]
     Active Substance: HYDROMORPHONE HYDROCHLORIDE
     Dosage: 1 MILLIGRAM
     Route: 058
  395. HYDROMORPHONE HYDROCHLORIDE [Suspect]
     Active Substance: HYDROMORPHONE HYDROCHLORIDE
     Dosage: 1 MILLIGRAM, FORMULATION NOT SPECIFIED
     Route: 058
  396. HYDROMORPHONE HYDROCHLORIDE [Suspect]
     Active Substance: HYDROMORPHONE HYDROCHLORIDE
     Dosage: 1 MILLIGRAM
     Route: 058
  397. HYDROMORPHONE HYDROCHLORIDE [Suspect]
     Active Substance: HYDROMORPHONE HYDROCHLORIDE
     Dosage: 96 MILLIGRAM
     Route: 058
  398. HYDROMORPHONE HYDROCHLORIDE [Suspect]
     Active Substance: HYDROMORPHONE HYDROCHLORIDE
     Dosage: 24 MILLIGRAM
     Route: 058
  399. HYDROMORPHONE HYDROCHLORIDE [Suspect]
     Active Substance: HYDROMORPHONE HYDROCHLORIDE
     Dosage: 1 MILLIGRAM
     Route: 058
  400. HYDROMORPHONE HYDROCHLORIDE [Suspect]
     Active Substance: HYDROMORPHONE HYDROCHLORIDE
     Dosage: 24 MILLIGRAM, FORMULATION NOT SPECIFIED
     Route: 058
  401. HYDROMORPHONE HYDROCHLORIDE [Suspect]
     Active Substance: HYDROMORPHONE HYDROCHLORIDE
     Dosage: UNK
     Route: 065
  402. HYDROMORPHONE HYDROCHLORIDE [Suspect]
     Active Substance: HYDROMORPHONE HYDROCHLORIDE
     Dosage: 6 MILLIGRAM
     Route: 058
  403. HYDROMORPHONE HYDROCHLORIDE [Suspect]
     Active Substance: HYDROMORPHONE HYDROCHLORIDE
     Dosage: 1 MG, 1 EVERY 4 HOURS
     Route: 058
  404. HYDROMORPHONE HYDROCHLORIDE [Suspect]
     Active Substance: HYDROMORPHONE HYDROCHLORIDE
     Dosage: 24 MILLIGRAM; Q4H
     Route: 058
  405. HYDROMORPHONE HYDROCHLORIDE [Suspect]
     Active Substance: HYDROMORPHONE HYDROCHLORIDE
     Dosage: 1 MG, 1 EVERY 4 HOURS
     Route: 058
  406. FIASP [Suspect]
     Active Substance: INSULIN ASPART
     Indication: Diabetes mellitus
     Dosage: UNK, SUSPENSION FOR INJECTION IN CARTRIDGE
     Route: 058
  407. FIASP [Suspect]
     Active Substance: INSULIN ASPART
     Indication: Off label use
     Dosage: UNK
     Route: 058
  408. FIASP [Suspect]
     Active Substance: INSULIN ASPART
     Dosage: UNK SUSPENSION FOR INJECTION IN CARTRIDGE
     Route: 065
  409. FIASP [Suspect]
     Active Substance: INSULIN ASPART
     Dosage: UNK, SUSPENSION FOR INJECTION IN CARTRIDGE
     Route: 048
  410. FIASP [Suspect]
     Active Substance: INSULIN ASPART
     Dosage: UNK, SUSPENSION FOR INJECTION IN CARTRIDGE
     Route: 065
  411. FIASP [Suspect]
     Active Substance: INSULIN ASPART
     Dosage: UNK
     Route: 058
  412. FIASP [Suspect]
     Active Substance: INSULIN ASPART
     Dosage: UNK, SUSPENSION FOR INJECTION IN CARTRIDGE
     Route: 058
  413. FIASP [Suspect]
     Active Substance: INSULIN ASPART
     Dosage: UNK, SUSPENSION FOR INJECTION IN CARTRIDGE
     Route: 048
  414. FIASP [Suspect]
     Active Substance: INSULIN ASPART
     Dosage: UNK
     Route: 048
  415. FIASP [Suspect]
     Active Substance: INSULIN ASPART
     Dosage: UNK, SUSPENSION FOR INJECTION IN CARTRIDGE
     Route: 058
  416. FIASP [Suspect]
     Active Substance: INSULIN ASPART
     Dosage: UNK, SUSPENSION FOR INJECTION IN CARTRIDGE
     Route: 058
  417. FIASP [Suspect]
     Active Substance: INSULIN ASPART
     Dosage: UNK
     Route: 048
  418. FIASP [Suspect]
     Active Substance: INSULIN ASPART
     Dosage: UNK
     Route: 065
  419. FIASP [Suspect]
     Active Substance: INSULIN ASPART
     Dosage: UNK
     Route: 065
  420. FIASP [Suspect]
     Active Substance: INSULIN ASPART
     Dosage: UNK
     Route: 058
  421. FIASP [Suspect]
     Active Substance: INSULIN ASPART
     Dosage: UNK
     Route: 058
  422. FIASP [Suspect]
     Active Substance: INSULIN ASPART
     Dosage: UNK
     Route: 058
  423. FIASP [Suspect]
     Active Substance: INSULIN ASPART
     Dosage: UNK
     Route: 058
  424. FIASP [Suspect]
     Active Substance: INSULIN ASPART
     Dosage: UNK
     Route: 065
  425. FIASP [Suspect]
     Active Substance: INSULIN ASPART
     Dosage: UNK
     Route: 065
  426. FIASP [Suspect]
     Active Substance: INSULIN ASPART
     Dosage: UNK
     Route: 065
  427. FIASP [Suspect]
     Active Substance: INSULIN ASPART
     Dosage: UNK
     Route: 065
  428. FIASP [Suspect]
     Active Substance: INSULIN ASPART
     Dosage: UNK
     Route: 058
  429. FIASP [Suspect]
     Active Substance: INSULIN ASPART
     Dosage: UNK
     Route: 058
  430. FIASP [Suspect]
     Active Substance: INSULIN ASPART
     Dosage: UNK
     Route: 058
  431. FIASP [Suspect]
     Active Substance: INSULIN ASPART
     Dosage: UNK
     Route: 065
  432. FIASP [Suspect]
     Active Substance: INSULIN ASPART
     Dosage: UNK
     Route: 058
  433. FIASP [Suspect]
     Active Substance: INSULIN ASPART
     Dosage: UNK
     Route: 065
  434. FIASP [Suspect]
     Active Substance: INSULIN ASPART
     Dosage: UNK
     Route: 058
  435. TRESIBA [Suspect]
     Active Substance: INSULIN DEGLUDEC
     Indication: Diabetes mellitus
     Dosage: UNK
     Route: 058
  436. TRESIBA [Suspect]
     Active Substance: INSULIN DEGLUDEC
     Dosage: UNK
     Route: 058
  437. TRESIBA [Suspect]
     Active Substance: INSULIN DEGLUDEC
     Dosage: 1 DOSAGE FORM, 1 DOSE PER 1 D
  438. TRESIBA [Suspect]
     Active Substance: INSULIN DEGLUDEC
     Dosage: UNK
     Route: 058
  439. TRESIBA [Suspect]
     Active Substance: INSULIN DEGLUDEC
     Dosage: UNK
     Route: 058
  440. TRESIBA [Suspect]
     Active Substance: INSULIN DEGLUDEC
     Dosage: UNK
     Route: 065
  441. TRESIBA [Suspect]
     Active Substance: INSULIN DEGLUDEC
     Dosage: UNK
     Route: 058
  442. TRESIBA [Suspect]
     Active Substance: INSULIN DEGLUDEC
     Dosage: UNK
     Route: 065
  443. TRESIBA [Suspect]
     Active Substance: INSULIN DEGLUDEC
     Dosage: UNK
     Route: 065
  444. TRESIBA [Suspect]
     Active Substance: INSULIN DEGLUDEC
     Dosage: 1 DOSAGE FORM, 1 DOSE PER 1 D
     Route: 065
  445. TRESIBA [Suspect]
     Active Substance: INSULIN DEGLUDEC
     Dosage: 1 DOSAGE FORM, ONCE
  446. TRESIBA [Suspect]
     Active Substance: INSULIN DEGLUDEC
     Dosage: 1 DOSAGE FORM, QD
     Route: 058
  447. TRESIBA [Suspect]
     Active Substance: INSULIN DEGLUDEC
     Dosage: UNK SUBCUTANEOUS
  448. TRESIBA [Suspect]
     Active Substance: INSULIN DEGLUDEC
     Dosage: UNK
     Route: 065
  449. ATROVENT [Suspect]
     Active Substance: IPRATROPIUM BROMIDE
     Indication: Dyspnoea
     Dosage: UNK UNK, QID
  450. ATROVENT [Suspect]
     Active Substance: IPRATROPIUM BROMIDE
     Indication: Sleep disorder therapy
     Dosage: UNK, QID, EVERY 6 HOURS
     Route: 055
  451. ATROVENT [Suspect]
     Active Substance: IPRATROPIUM BROMIDE
     Indication: Somnolence
     Dosage: UNK
     Route: 065
  452. ATROVENT [Suspect]
     Active Substance: IPRATROPIUM BROMIDE
     Indication: Off label use
     Dosage: UNK
     Route: 050
  453. ATROVENT [Suspect]
     Active Substance: IPRATROPIUM BROMIDE
     Dosage: UNK
     Route: 055
  454. ATROVENT [Suspect]
     Active Substance: IPRATROPIUM BROMIDE
     Dosage: UNK UNK, Q6H
     Route: 055
  455. ATROVENT [Suspect]
     Active Substance: IPRATROPIUM BROMIDE
     Dosage: 6 HOURS
     Route: 050
  456. ATROVENT [Suspect]
     Active Substance: IPRATROPIUM BROMIDE
     Dosage: UNK, Q4D
     Route: 055
  457. ATROVENT [Suspect]
     Active Substance: IPRATROPIUM BROMIDE
     Dosage: 6 HOURS
     Route: 065
  458. ATROVENT [Suspect]
     Active Substance: IPRATROPIUM BROMIDE
     Dosage: UNK UNK, QID
     Route: 055
  459. ATROVENT [Suspect]
     Active Substance: IPRATROPIUM BROMIDE
     Dosage: 1 EVERY 6 HOURS
     Route: 050
  460. ATROVENT [Suspect]
     Active Substance: IPRATROPIUM BROMIDE
     Dosage: 1 DOSAGE FORM, 1 DOSE PER 4D
     Route: 050
  461. ATROVENT [Suspect]
     Active Substance: IPRATROPIUM BROMIDE
     Dosage: UNK UNK, QD
     Route: 055
  462. ATROVENT [Suspect]
     Active Substance: IPRATROPIUM BROMIDE
     Dosage: UNK
     Route: 050
  463. ATROVENT [Suspect]
     Active Substance: IPRATROPIUM BROMIDE
     Dosage: 1 DOSAGE FORM
     Route: 050
  464. ATROVENT [Suspect]
     Active Substance: IPRATROPIUM BROMIDE
     Dosage: 1 EVERY 8 HOURS
     Route: 050
  465. ATROVENT [Suspect]
     Active Substance: IPRATROPIUM BROMIDE
     Dosage: UNK UNK, Q6H
     Route: 055
  466. ATROVENT [Suspect]
     Active Substance: IPRATROPIUM BROMIDE
     Dosage: 1 EVERY 6 HOURS; DOSAGE FORM: NOT SPECIFIED
  467. ATROVENT [Suspect]
     Active Substance: IPRATROPIUM BROMIDE
     Dosage: 1 EVERY 1 DAYS
  468. ATROVENT [Suspect]
     Active Substance: IPRATROPIUM BROMIDE
     Dosage: 1 EVERY 1 DAYS
     Route: 065
  469. ATROVENT [Suspect]
     Active Substance: IPRATROPIUM BROMIDE
     Dosage: 1 EVERY 8 HOURS
     Route: 065
  470. ATROVENT [Suspect]
     Active Substance: IPRATROPIUM BROMIDE
     Dosage: UNK
  471. ATROVENT [Suspect]
     Active Substance: IPRATROPIUM BROMIDE
     Dosage: 1 EVERY 4 DAYS
  472. ATROVENT [Suspect]
     Active Substance: IPRATROPIUM BROMIDE
     Dosage: UNK
     Route: 065
  473. ATROVENT [Suspect]
     Active Substance: IPRATROPIUM BROMIDE
     Dosage: UNK, Q6H
     Route: 050
  474. ATROVENT [Suspect]
     Active Substance: IPRATROPIUM BROMIDE
     Dosage: UNK
     Route: 065
  475. ATROVENT [Suspect]
     Active Substance: IPRATROPIUM BROMIDE
     Dosage: UNK FORMULATION NOT SPECIFIED
     Route: 065
  476. ATROVENT [Suspect]
     Active Substance: IPRATROPIUM BROMIDE
     Dosage: 1 DOSAGE FORM, 1 DOSE PER 1 D
     Route: 065
  477. ATROVENT [Suspect]
     Active Substance: IPRATROPIUM BROMIDE
     Dosage: 1 DOSAGE FORM, 1 DOSE PER 6HRS
     Route: 065
  478. ATROVENT [Suspect]
     Active Substance: IPRATROPIUM BROMIDE
     Dosage: UNK, FORMULATION NOT SPECIFIED
     Route: 065
  479. ATROVENT [Suspect]
     Active Substance: IPRATROPIUM BROMIDE
     Dosage: UNK, FORMULATION NOT SPECIFIED
     Route: 065
  480. ATROVENT [Suspect]
     Active Substance: IPRATROPIUM BROMIDE
     Dosage: UNK, FORMULATION NOT SPECIFIED
     Route: 065
  481. ATROVENT [Suspect]
     Active Substance: IPRATROPIUM BROMIDE
     Dosage: UNK, FORMULATION NOT SPECIFIED
     Route: 065
  482. ATROVENT [Suspect]
     Active Substance: IPRATROPIUM BROMIDE
     Dosage: UNK, FORMULATION NOT SPECIFIED
     Route: 050
  483. ATROVENT [Suspect]
     Active Substance: IPRATROPIUM BROMIDE
     Dosage: UNK, FORMULATION NOT SPECIFIED
     Route: 050
  484. ATROVENT [Suspect]
     Active Substance: IPRATROPIUM BROMIDE
     Dosage: UNK, FORMULATION NOT SPECIFIED
     Route: 065
  485. ATROVENT [Suspect]
     Active Substance: IPRATROPIUM BROMIDE
     Dosage: UNK, FORMULATION NOT SPECIFIED
     Route: 065
  486. ATROVENT [Suspect]
     Active Substance: IPRATROPIUM BROMIDE
     Dosage: UNK, FORMULATION NOT SPECIFIED
  487. ATROVENT [Suspect]
     Active Substance: IPRATROPIUM BROMIDE
     Dosage: UNK,FORMULATION NOT SPECIFIED
     Route: 065
  488. ATROVENT [Suspect]
     Active Substance: IPRATROPIUM BROMIDE
     Dosage: UNK, FORMULATION NOT SPECIFIED
     Route: 065
  489. ATROVENT [Suspect]
     Active Substance: IPRATROPIUM BROMIDE
     Dosage: UNK UNK, QD (DOSAGE FORM: NOT SPECIFIED)
     Route: 065
  490. ATROVENT [Suspect]
     Active Substance: IPRATROPIUM BROMIDE
     Dosage: 4 DOSAGE FORM
  491. ATROVENT [Suspect]
     Active Substance: IPRATROPIUM BROMIDE
     Dosage: UNK, TID
     Route: 050
  492. ATROVENT [Suspect]
     Active Substance: IPRATROPIUM BROMIDE
     Dosage: UNK
     Route: 065
  493. ATROVENT [Suspect]
     Active Substance: IPRATROPIUM BROMIDE
     Dosage: 4 DOSAGE FORM
     Route: 065
  494. ATROVENT [Suspect]
     Active Substance: IPRATROPIUM BROMIDE
     Dosage: UNK, 1 EVERY 6 HOURS, DOSAGE FORM: NOT SPECIFIED
     Route: 065
  495. ATROVENT [Suspect]
     Active Substance: IPRATROPIUM BROMIDE
     Dosage: 1 DOSAGE FORM, 1 EVERY 6 HOURS
     Route: 050
  496. ATROVENT [Suspect]
     Active Substance: IPRATROPIUM BROMIDE
     Dosage: UNK, 1 EVERY 1 DAY; DOSAGE FORM: NOT SPECIFIED
     Route: 050
  497. ATROVENT [Suspect]
     Active Substance: IPRATROPIUM BROMIDE
     Dosage: 4 DOSAGE FORM, 1 EVERY 1 DAY; DOSAGE FORM: NOT SPECIFIED
  498. ATROVENT [Suspect]
     Active Substance: IPRATROPIUM BROMIDE
     Dosage: 1 DOSAGE FORM, 1 DOSE PER 1HR
     Route: 050
  499. ATROVENT [Suspect]
     Active Substance: IPRATROPIUM BROMIDE
     Dosage: UNK, 1 DOSE PER 8HRS
     Route: 050
  500. ATROVENT [Suspect]
     Active Substance: IPRATROPIUM BROMIDE
     Dosage: UNK
     Route: 050
  501. ATROVENT [Suspect]
     Active Substance: IPRATROPIUM BROMIDE
     Dosage: 1 DOSAGE FORM, 3 DOSEPER1D
     Route: 050
  502. ATROVENT [Suspect]
     Active Substance: IPRATROPIUM BROMIDE
     Dosage: UNK, 1 DOSE PER 8HRS
     Route: 065
  503. ATROVENT [Suspect]
     Active Substance: IPRATROPIUM BROMIDE
     Dosage: UNK, 4 DOSE PER 1 D
     Route: 065
  504. ATROVENT [Suspect]
     Active Substance: IPRATROPIUM BROMIDE
     Dosage: UNK, 1 DOSE PER 1 D
     Route: 065
  505. ATROVENT [Suspect]
     Active Substance: IPRATROPIUM BROMIDE
     Dosage: UNK, 1 DOSE PER 1 D
     Route: 050
  506. ATROVENT [Suspect]
     Active Substance: IPRATROPIUM BROMIDE
     Dosage: UNK, 4 DOSE PER 1 D
     Route: 050
  507. ATROVENT [Suspect]
     Active Substance: IPRATROPIUM BROMIDE
     Dosage: UNK, QID, 6 HOURS, INHALATION
  508. ATROVENT [Suspect]
     Active Substance: IPRATROPIUM BROMIDE
     Dosage: UNK, 4 DOSE PER 1 D
  509. ATROVENT [Suspect]
     Active Substance: IPRATROPIUM BROMIDE
     Dosage: UNK
     Route: 065
  510. ATROVENT [Suspect]
     Active Substance: IPRATROPIUM BROMIDE
     Dosage: 1 EVERY 6 HOURS
     Route: 065
  511. ATROVENT [Suspect]
     Active Substance: IPRATROPIUM BROMIDE
     Dosage: 1 DOSAGE FORM, 1 EVERY 6 HOURS
  512. ATROVENT [Suspect]
     Active Substance: IPRATROPIUM BROMIDE
     Dosage: 1 DOSAGE FORM, 1 DOSE PER 8HRS
     Route: 065
  513. ATROVENT [Suspect]
     Active Substance: IPRATROPIUM BROMIDE
     Dosage: UNK, 1 DOSE PER 1 D
  514. ATROVENT [Suspect]
     Active Substance: IPRATROPIUM BROMIDE
     Dosage: 1 DOSAGE FORM, 1 DOSE PER 8HRS
     Route: 050
  515. PREVACID [Suspect]
     Active Substance: LANSOPRAZOLE
     Indication: Antacid therapy
     Dosage: 30 MILLIGRAM, 1 DOSE PER 1 D
     Route: 065
  516. PREVACID [Suspect]
     Active Substance: LANSOPRAZOLE
     Indication: Intentional product misuse
     Dosage: 30 MILLIGRAM
     Route: 065
  517. PREVACID [Suspect]
     Active Substance: LANSOPRAZOLE
     Indication: Off label use
     Dosage: 30 MILLIGRAM
     Route: 048
  518. PREVACID [Suspect]
     Active Substance: LANSOPRAZOLE
     Dosage: 30 MILLIGRAM, 1 DOSE PER 1 D
     Route: 048
  519. PREVACID [Suspect]
     Active Substance: LANSOPRAZOLE
     Dosage: 30 MILLIGRAM (DOAGE FORM : NOT SPECIFIED)
     Route: 065
  520. PREVACID [Suspect]
     Active Substance: LANSOPRAZOLE
     Dosage: 30 MILLIGRAM, QD, DOSAGE FORM: CAPSULE DELAYED RELEASE
     Route: 048
  521. PREVACID [Suspect]
     Active Substance: LANSOPRAZOLE
     Dosage: UNK
     Route: 065
  522. PREVACID [Suspect]
     Active Substance: LANSOPRAZOLE
     Dosage: 30 MILLIGRAM
     Route: 048
  523. PREVACID [Suspect]
     Active Substance: LANSOPRAZOLE
     Dosage: 30 MILLIGRAM
     Route: 048
  524. PREVACID [Suspect]
     Active Substance: LANSOPRAZOLE
     Dosage: 30 MILLIGRAM
     Route: 048
  525. PREVACID [Suspect]
     Active Substance: LANSOPRAZOLE
     Dosage: 30 MILLIGRAM
     Route: 048
  526. PREVACID [Suspect]
     Active Substance: LANSOPRAZOLE
     Dosage: 30 MILLIGRAM, QD
     Route: 065
  527. PREVACID [Suspect]
     Active Substance: LANSOPRAZOLE
     Dosage: UNK
     Route: 048
  528. PREVACID [Suspect]
     Active Substance: LANSOPRAZOLE
     Dosage: UNK
     Route: 065
  529. FOSRENOL [Suspect]
     Active Substance: LANTHANUM CARBONATE
     Indication: Hyperphosphataemia
     Dosage: 500 MILLIGRAM 1 EVERY 1 DAYS ORAL
  530. FOSRENOL [Suspect]
     Active Substance: LANTHANUM CARBONATE
     Indication: Off label use
     Dosage: 500 MILLIGRAM, AS NECESSARY
  531. FOSRENOL [Suspect]
     Active Substance: LANTHANUM CARBONATE
     Indication: Blood phosphorus increased
     Dosage: 500 MILLIGRAM, QD
  532. FOSRENOL [Suspect]
     Active Substance: LANTHANUM CARBONATE
     Dosage: UNK
     Route: 065
  533. FOSRENOL [Suspect]
     Active Substance: LANTHANUM CARBONATE
     Dosage: UNK
     Route: 048
  534. FOSRENOL [Suspect]
     Active Substance: LANTHANUM CARBONATE
     Dosage: UNK
     Route: 065
  535. FOSRENOL [Suspect]
     Active Substance: LANTHANUM CARBONATE
     Dosage: 500 MILLIGRAM
     Route: 048
  536. FOSRENOL [Suspect]
     Active Substance: LANTHANUM CARBONATE
     Dosage: 500 MILLIGRAM
     Route: 048
  537. FOSRENOL [Suspect]
     Active Substance: LANTHANUM CARBONATE
     Dosage: 500 MILLIGRAM
     Route: 048
  538. FOSRENOL [Suspect]
     Active Substance: LANTHANUM CARBONATE
     Dosage: 500 MILLIGRAM
     Route: 048
  539. FOSRENOL [Suspect]
     Active Substance: LANTHANUM CARBONATE
     Dosage: UNK
     Route: 065
  540. FOSRENOL [Suspect]
     Active Substance: LANTHANUM CARBONATE
     Dosage: 500 MILLIGRAM
     Route: 048
  541. FOSRENOL [Suspect]
     Active Substance: LANTHANUM CARBONATE
     Dosage: UNK
     Route: 065
  542. FOSRENOL [Suspect]
     Active Substance: LANTHANUM CARBONATE
     Dosage: 500 MILLIGRAM
     Route: 048
  543. FOSRENOL [Suspect]
     Active Substance: LANTHANUM CARBONATE
     Dosage: 500 MILLIGRAM
     Route: 048
  544. FOSRENOL [Suspect]
     Active Substance: LANTHANUM CARBONATE
     Dosage: 500 MILLIGRAM
     Route: 048
  545. FOSRENOL [Suspect]
     Active Substance: LANTHANUM CARBONATE
     Dosage: 550 MILLIGRAM
     Route: 048
  546. FOSRENOL [Suspect]
     Active Substance: LANTHANUM CARBONATE
     Dosage: 550 MILLIGRAM, 1 DOSE PER 1 D
     Route: 048
  547. FOSRENOL [Suspect]
     Active Substance: LANTHANUM CARBONATE
     Dosage: 500 MICROGRAM, QD
     Route: 048
  548. FOSRENOL [Suspect]
     Active Substance: LANTHANUM CARBONATE
     Dosage: 500 MICROGRAM, QD
     Route: 048
  549. FOSRENOL [Suspect]
     Active Substance: LANTHANUM CARBONATE
     Dosage: 500 MILLIGRAM, QD
     Route: 048
  550. FOSRENOL [Suspect]
     Active Substance: LANTHANUM CARBONATE
     Dosage: 500 MICROGRAM, QD
     Route: 048
  551. FOSRENOL [Suspect]
     Active Substance: LANTHANUM CARBONATE
     Dosage: 500 MILLIGRAM, QD
     Route: 048
  552. FOSRENOL [Suspect]
     Active Substance: LANTHANUM CARBONATE
     Dosage: 500 MICROGRAM, QD
     Route: 065
  553. FOSRENOL [Suspect]
     Active Substance: LANTHANUM CARBONATE
     Dosage: 500 MG, PRN
     Route: 054
  554. POLYETHYLENE GLYCOL 3350 [Suspect]
     Active Substance: POLYETHYLENE GLYCOL 3350
     Indication: Constipation
     Dosage: 17 GRAM, QD
  555. POLYETHYLENE GLYCOL 3350 [Suspect]
     Active Substance: POLYETHYLENE GLYCOL 3350
     Indication: Product used for unknown indication
     Dosage: 17 MILLIGRAM, QD
  556. POLYETHYLENE GLYCOL 3350 [Suspect]
     Active Substance: POLYETHYLENE GLYCOL 3350
     Indication: Off label use
     Dosage: 17 MG, 1 X/ DAY
     Route: 048
  557. POLYETHYLENE GLYCOL 3350 [Suspect]
     Active Substance: POLYETHYLENE GLYCOL 3350
     Dosage: UNK, QD
     Route: 048
  558. POLYETHYLENE GLYCOL 3350 [Suspect]
     Active Substance: POLYETHYLENE GLYCOL 3350
     Dosage: 3 MILLIGRAM 1 EVERY 1 WEEKS ORAL
  559. POLYETHYLENE GLYCOL 3350 [Suspect]
     Active Substance: POLYETHYLENE GLYCOL 3350
     Dosage: 17 MG, 1 X/ DAY
     Route: 048
  560. POLYETHYLENE GLYCOL 3350 [Suspect]
     Active Substance: POLYETHYLENE GLYCOL 3350
     Dosage: 2.5 MILLILITER
  561. POLYETHYLENE GLYCOL 3350 [Suspect]
     Active Substance: POLYETHYLENE GLYCOL 3350
     Dosage: 17 MG, 1 X/ DAY
     Route: 048
  562. POLYETHYLENE GLYCOL 3350 [Suspect]
     Active Substance: POLYETHYLENE GLYCOL 3350
     Dosage: 17 MG, 1 X/ DAY
     Route: 048
  563. POLYETHYLENE GLYCOL 3350 [Suspect]
     Active Substance: POLYETHYLENE GLYCOL 3350
     Dosage: UNK(DOSAGE FORM: POWDER FOR ORAL SOLUTION)
     Route: 048
  564. POLYETHYLENE GLYCOL 3350 [Suspect]
     Active Substance: POLYETHYLENE GLYCOL 3350
     Dosage: UNK
     Route: 065
  565. POLYETHYLENE GLYCOL 3350 [Suspect]
     Active Substance: POLYETHYLENE GLYCOL 3350
     Dosage: UNK(DOSAGE FORM: NOT SPECIFIED)
     Route: 048
  566. POLYETHYLENE GLYCOL 3350 [Suspect]
     Active Substance: POLYETHYLENE GLYCOL 3350
     Dosage: 3 MILLIGRAM, QW
     Route: 048
  567. POLYETHYLENE GLYCOL 3350 [Suspect]
     Active Substance: POLYETHYLENE GLYCOL 3350
     Dosage: 17 GRAM, QD
     Route: 065
  568. POLYETHYLENE GLYCOL 3350 [Suspect]
     Active Substance: POLYETHYLENE GLYCOL 3350
     Dosage: 17 GRAM
  569. POLYETHYLENE GLYCOL 3350 [Suspect]
     Active Substance: POLYETHYLENE GLYCOL 3350
     Dosage: UNK(DOSAGE FORM: NOT SPECIFIED)
     Route: 048
  570. POLYETHYLENE GLYCOL 3350 [Suspect]
     Active Substance: POLYETHYLENE GLYCOL 3350
     Dosage: UNK(DOSAGE FORM: NOT SPECIFIED)
     Route: 048
  571. POLYETHYLENE GLYCOL 3350 [Suspect]
     Active Substance: POLYETHYLENE GLYCOL 3350
     Dosage: UNK
  572. POLYETHYLENE GLYCOL 3350 [Suspect]
     Active Substance: POLYETHYLENE GLYCOL 3350
     Dosage: 2.5 MILLIGRAM
  573. POLYETHYLENE GLYCOL 3350 [Suspect]
     Active Substance: POLYETHYLENE GLYCOL 3350
     Dosage: UNK, 1 DOSE PER 1 D
  574. MELATONIN [Suspect]
     Active Substance: MELATONIN
     Indication: Sleep disorder therapy
     Dosage: 3 MILLIGRAM, QD
  575. MELATONIN [Suspect]
     Active Substance: MELATONIN
     Indication: Intentional product misuse
     Dosage: 3 MILLIGRAM ORAL
  576. MELATONIN [Suspect]
     Active Substance: MELATONIN
     Indication: Product used for unknown indication
     Dosage: 3 MILLIGRAM
     Route: 048
  577. MELATONIN [Suspect]
     Active Substance: MELATONIN
     Indication: Off label use
     Dosage: UNK
     Route: 065
  578. MELATONIN [Suspect]
     Active Substance: MELATONIN
     Dosage: 3 MILLIGRAM
     Route: 048
  579. MELATONIN [Suspect]
     Active Substance: MELATONIN
     Dosage: 3 MILLIGRAM
     Route: 048
  580. MELATONIN [Suspect]
     Active Substance: MELATONIN
     Dosage: UNK
     Route: 048
  581. MELATONIN [Suspect]
     Active Substance: MELATONIN
     Dosage: 30 MILLIGRAM, 1 EVERY 1 DAYS; DOSAGE FORM: NOT SPECIFIED
     Route: 048
  582. MELATONIN [Suspect]
     Active Substance: MELATONIN
     Dosage: UNK
     Route: 048
  583. MELATONIN [Suspect]
     Active Substance: MELATONIN
     Dosage: 3 MILLIGRAM, QD
     Route: 048
  584. MELATONIN [Suspect]
     Active Substance: MELATONIN
     Dosage: 3 MILLIGRAM, QW
     Route: 065
  585. MELATONIN [Suspect]
     Active Substance: MELATONIN
     Dosage: 3 MG, QD
     Route: 061
  586. MELATONIN [Suspect]
     Active Substance: MELATONIN
     Dosage: 3 MG, QD
     Route: 065
  587. MELATONIN [Suspect]
     Active Substance: MELATONIN
     Dosage: UNK
     Route: 065
  588. METRONIDAZOLE [Suspect]
     Active Substance: METRONIDAZOLE
     Indication: Bacterial infection
     Dosage: 500 MILLIGRAM
  589. METRONIDAZOLE [Suspect]
     Active Substance: METRONIDAZOLE
     Indication: Intentional product misuse
     Dosage: 500 MILLIGRAM, 1 DOSE PER 0.3D
  590. METRONIDAZOLE [Suspect]
     Active Substance: METRONIDAZOLE
     Indication: Off label use
     Dosage: 500 MILLIGRAM, 1 DOSE PER 1 D
  591. METRONIDAZOLE [Suspect]
     Active Substance: METRONIDAZOLE
     Indication: Product used for unknown indication
     Dosage: 1500 MILLIGRAM, 500 MG TID
  592. METRONIDAZOLE [Suspect]
     Active Substance: METRONIDAZOLE
     Dosage: 500 MILLIGRAM, 1 EVERY 8HRS
  593. METRONIDAZOLE [Suspect]
     Active Substance: METRONIDAZOLE
     Dosage: 1500 MILLIGRAM, 1 DOSE PER 1D
  594. METRONIDAZOLE [Suspect]
     Active Substance: METRONIDAZOLE
     Dosage: 500 MG, Q8H (1500 MG QD)
  595. METRONIDAZOLE [Suspect]
     Active Substance: METRONIDAZOLE
     Dosage: UNK
     Route: 065
  596. METRONIDAZOLE [Suspect]
     Active Substance: METRONIDAZOLE
     Dosage: 1500 MILLIGRAM
     Route: 065
  597. METRONIDAZOLE [Suspect]
     Active Substance: METRONIDAZOLE
     Dosage: 1500 MILLIGRAM
  598. METRONIDAZOLE [Suspect]
     Active Substance: METRONIDAZOLE
     Dosage: 500 MILLIGRAM
     Route: 048
  599. METRONIDAZOLE [Suspect]
     Active Substance: METRONIDAZOLE
     Dosage: 500 MILLIGRAM
     Route: 048
  600. METRONIDAZOLE [Suspect]
     Active Substance: METRONIDAZOLE
     Dosage: 500 MILLIGRAM
     Route: 048
  601. METRONIDAZOLE [Suspect]
     Active Substance: METRONIDAZOLE
     Dosage: 500 MILLIGRAM
     Route: 048
  602. METRONIDAZOLE [Suspect]
     Active Substance: METRONIDAZOLE
     Dosage: 500 MILLIGRAM
     Route: 048
  603. METRONIDAZOLE [Suspect]
     Active Substance: METRONIDAZOLE
     Dosage: 1500 MILLIGRAM, 1 DOSE PER 8HRS
  604. METRONIDAZOLE [Suspect]
     Active Substance: METRONIDAZOLE
     Dosage: 1500 MICROGRAM, 1 DOSE PER 1D
  605. METRONIDAZOLE [Suspect]
     Active Substance: METRONIDAZOLE
     Dosage: 500 MG, Q8H, 1500 MG QD
     Route: 048
  606. METRONIDAZOLE [Suspect]
     Active Substance: METRONIDAZOLE
     Dosage: 500 MILLIGRAM, 1 DOSE PER 0.3D
  607. METRONIDAZOLE [Suspect]
     Active Substance: METRONIDAZOLE
     Dosage: 500 MICROGRAM, 1 DOSE PER 1 D
  608. METRONIDAZOLE [Suspect]
     Active Substance: METRONIDAZOLE
     Dosage: 500 MG, QD
     Route: 048
  609. METRONIDAZOLE [Suspect]
     Active Substance: METRONIDAZOLE
     Dosage: 500 MILLIGRAM, QD
     Route: 048
  610. METRONIDAZOLE [Suspect]
     Active Substance: METRONIDAZOLE
     Dosage: 500 MG, QD
     Route: 048
  611. METRONIDAZOLE [Suspect]
     Active Substance: METRONIDAZOLE
     Dosage: 1500 MICROGRAM, QD
     Route: 048
  612. METRONIDAZOLE [Suspect]
     Active Substance: METRONIDAZOLE
     Dosage: 500 MILLIGRAM, 1 EVERY 8 HOURS
     Route: 048
  613. METRONIDAZOLE [Suspect]
     Active Substance: METRONIDAZOLE
     Dosage: 500 MILLIGRAM, TID
     Route: 048
  614. METRONIDAZOLE [Suspect]
     Active Substance: METRONIDAZOLE
     Dosage: 500 MILLIGRAM, TID
     Route: 048
  615. METRONIDAZOLE [Suspect]
     Active Substance: METRONIDAZOLE
     Dosage: 500 MILLIGRAM, TID
     Route: 048
  616. METRONIDAZOLE [Suspect]
     Active Substance: METRONIDAZOLE
     Dosage: 500 MILLIGRAM, TID
     Route: 048
  617. METRONIDAZOLE [Suspect]
     Active Substance: METRONIDAZOLE
     Dosage: 500 GRAM, 1 EVERY 8 HOURS
     Route: 048
  618. METRONIDAZOLE [Suspect]
     Active Substance: METRONIDAZOLE
     Dosage: UNK
     Route: 065
  619. METRONIDAZOLE [Suspect]
     Active Substance: METRONIDAZOLE
     Dosage: UNK UNK, 1 DOSE PER 1 D
  620. METRONIDAZOLE [Suspect]
     Active Substance: METRONIDAZOLE
     Dosage: UNK
  621. METRONIDAZOLE [Suspect]
     Active Substance: METRONIDAZOLE
     Dosage: 4500 MILLIGRAM, 1 DOSE PER 1D
  622. METRONIDAZOLE [Suspect]
     Active Substance: METRONIDAZOLE
     Dosage: UNK UNK, 1 DOSE PER 8HRS
  623. METRONIDAZOLE [Suspect]
     Active Substance: METRONIDAZOLE
     Dosage: UNK, 3 DOSE PER 1D
     Route: 065
  624. METRONIDAZOLE [Suspect]
     Active Substance: METRONIDAZOLE
     Dosage: 1500 MILLIGRAM
     Route: 065
  625. METRONIDAZOLE [Suspect]
     Active Substance: METRONIDAZOLE
     Dosage: 500 MICROGRAM, 1 EVERY 8HRS
  626. SODIUM PHOSPHATE, MONOBASIC [Suspect]
     Active Substance: SODIUM PHOSPHATE, MONOBASIC
     Indication: Constipation
     Dosage: 133 MILLILITER, AS NECESSARY
     Route: 065
  627. SODIUM PHOSPHATE, MONOBASIC [Suspect]
     Active Substance: SODIUM PHOSPHATE, MONOBASIC
     Dosage: 133 MILLILITER,
     Route: 054
  628. SODIUM PHOSPHATE, MONOBASIC [Suspect]
     Active Substance: SODIUM PHOSPHATE, MONOBASIC
     Dosage: 133 MILLILITER, PRN
     Route: 065
  629. SODIUM PHOSPHATE, MONOBASIC [Suspect]
     Active Substance: SODIUM PHOSPHATE, MONOBASIC
     Dosage: 133ML
     Route: 054
  630. SODIUM PHOSPHATE, MONOBASIC [Suspect]
     Active Substance: SODIUM PHOSPHATE, MONOBASIC
     Dosage: UNK
     Route: 065
  631. SODIUM PHOSPHATE, MONOBASIC [Suspect]
     Active Substance: SODIUM PHOSPHATE, MONOBASIC
     Dosage: 133 MILLILITER
     Route: 054
  632. SODIUM PHOSPHATE, MONOBASIC [Suspect]
     Active Substance: SODIUM PHOSPHATE, MONOBASIC
     Dosage: 133 MILLILITER
     Route: 054
  633. SODIUM PHOSPHATE, MONOBASIC [Suspect]
     Active Substance: SODIUM PHOSPHATE, MONOBASIC
     Dosage: 133 MILLILITER
     Route: 065
  634. SODIUM PHOSPHATE, MONOBASIC [Suspect]
     Active Substance: SODIUM PHOSPHATE, MONOBASIC
     Dosage: 133 MILLILITER
     Route: 054
  635. SODIUM PHOSPHATE, MONOBASIC [Suspect]
     Active Substance: SODIUM PHOSPHATE, MONOBASIC
     Dosage: 133 MILLIGRAM
     Route: 054
  636. SODIUM PHOSPHATE, MONOBASIC [Suspect]
     Active Substance: SODIUM PHOSPHATE, MONOBASIC
     Dosage: UNK
     Route: 054
  637. SODIUM PHOSPHATE, MONOBASIC [Suspect]
     Active Substance: SODIUM PHOSPHATE, MONOBASIC
     Dosage: UNK
     Route: 065
  638. NOREPINEPHRINE [Suspect]
     Active Substance: NOREPINEPHRINE\NOREPINEPHRINE BITARTRATE
     Indication: Stress
     Dosage: UNK (DOSAGE FORM: LIQUID INTRAVENOUS)
     Route: 042
  639. NOREPINEPHRINE [Suspect]
     Active Substance: NOREPINEPHRINE\NOREPINEPHRINE BITARTRATE
     Indication: Intentional product misuse
     Dosage: UNK (DOSAGE FORM : NOT SPECIFIED)
     Route: 042
  640. NOREPINEPHRINE [Suspect]
     Active Substance: NOREPINEPHRINE\NOREPINEPHRINE BITARTRATE
     Indication: Off label use
     Dosage: UNK
     Route: 042
  641. NOREPINEPHRINE [Suspect]
     Active Substance: NOREPINEPHRINE\NOREPINEPHRINE BITARTRATE
     Indication: Nutritional supplementation
     Dosage: UNK
     Route: 042
  642. NOREPINEPHRINE [Suspect]
     Active Substance: NOREPINEPHRINE\NOREPINEPHRINE BITARTRATE
     Indication: Product used for unknown indication
     Dosage: 3 MILLIGRAM 1 EVERY 1 DAYS INTRAVENOUS
  643. NOREPINEPHRINE [Suspect]
     Active Substance: NOREPINEPHRINE\NOREPINEPHRINE BITARTRATE
     Dosage: UNK
     Route: 065
  644. NOREPINEPHRINE [Suspect]
     Active Substance: NOREPINEPHRINE\NOREPINEPHRINE BITARTRATE
     Dosage: UNK
     Route: 065
  645. NOREPINEPHRINE [Suspect]
     Active Substance: NOREPINEPHRINE\NOREPINEPHRINE BITARTRATE
     Dosage: UNK
     Route: 065
  646. NOREPINEPHRINE [Suspect]
     Active Substance: NOREPINEPHRINE\NOREPINEPHRINE BITARTRATE
     Dosage: UNK
     Route: 042
  647. NOREPINEPHRINE [Suspect]
     Active Substance: NOREPINEPHRINE\NOREPINEPHRINE BITARTRATE
     Dosage: UNK
     Route: 042
  648. NOREPINEPHRINE [Suspect]
     Active Substance: NOREPINEPHRINE\NOREPINEPHRINE BITARTRATE
     Dosage: UNK
     Route: 065
  649. NOREPINEPHRINE [Suspect]
     Active Substance: NOREPINEPHRINE\NOREPINEPHRINE BITARTRATE
     Dosage: UNK
     Route: 042
  650. NOREPINEPHRINE [Suspect]
     Active Substance: NOREPINEPHRINE\NOREPINEPHRINE BITARTRATE
     Dosage: 3 MILLIGRAM 1 EVERY 1 DAYS INTRAVENOUS
  651. NOREPINEPHRINE [Suspect]
     Active Substance: NOREPINEPHRINE\NOREPINEPHRINE BITARTRATE
     Dosage: 1 DOSAGE FORM 1 EVERY 1 DAYS INTRAVENOUS
  652. NOREPINEPHRINE [Suspect]
     Active Substance: NOREPINEPHRINE\NOREPINEPHRINE BITARTRATE
     Dosage: 1 DOSAGE FORM 1 EVERY 1 DAYS INTRAVENOUS
     Route: 065
  653. NOREPINEPHRINE [Suspect]
     Active Substance: NOREPINEPHRINE\NOREPINEPHRINE BITARTRATE
     Dosage: 3 MILLIGRAM
     Route: 065
  654. NOREPINEPHRINE [Suspect]
     Active Substance: NOREPINEPHRINE\NOREPINEPHRINE BITARTRATE
     Dosage: 12.5 MILLIGRAM, QD
     Route: 065
  655. NOREPINEPHRINE [Suspect]
     Active Substance: NOREPINEPHRINE\NOREPINEPHRINE BITARTRATE
     Dosage: UNK
     Route: 065
  656. NOREPINEPHRINE [Suspect]
     Active Substance: NOREPINEPHRINE\NOREPINEPHRINE BITARTRATE
     Dosage: UNK
     Route: 048
  657. NOREPINEPHRINE [Suspect]
     Active Substance: NOREPINEPHRINE\NOREPINEPHRINE BITARTRATE
     Dosage: UNK
     Route: 042
  658. NOREPINEPHRINE [Suspect]
     Active Substance: NOREPINEPHRINE\NOREPINEPHRINE BITARTRATE
     Dosage: UNK
     Route: 048
  659. NOREPINEPHRINE [Suspect]
     Active Substance: NOREPINEPHRINE\NOREPINEPHRINE BITARTRATE
     Dosage: 1 DOSAGE FORM 1 EVERY 1 DAYS INTRAVENOUS
  660. NOREPINEPHRINE [Suspect]
     Active Substance: NOREPINEPHRINE\NOREPINEPHRINE BITARTRATE
     Dosage: 1 DOSAGE FORM
     Route: 042
  661. NOREPINEPHRINE [Suspect]
     Active Substance: NOREPINEPHRINE\NOREPINEPHRINE BITARTRATE
     Dosage: 1 DOSAGE FORM
     Route: 042
  662. NOREPINEPHRINE [Suspect]
     Active Substance: NOREPINEPHRINE\NOREPINEPHRINE BITARTRATE
     Dosage: 1 DOSAGE FORM
     Route: 042
  663. NOREPINEPHRINE [Suspect]
     Active Substance: NOREPINEPHRINE\NOREPINEPHRINE BITARTRATE
     Dosage: 3 MILLIGRAM
     Route: 048
  664. NOREPINEPHRINE [Suspect]
     Active Substance: NOREPINEPHRINE\NOREPINEPHRINE BITARTRATE
     Dosage: 1 DOSAGE FORM, QD
     Route: 065
  665. NOREPINEPHRINE [Suspect]
     Active Substance: NOREPINEPHRINE\NOREPINEPHRINE BITARTRATE
     Dosage: 3 MILLIGRAM
     Route: 065
  666. NOREPINEPHRINE [Suspect]
     Active Substance: NOREPINEPHRINE\NOREPINEPHRINE BITARTRATE
     Dosage: 1 DOSAGE FORM, QD
     Route: 042
  667. NOREPINEPHRINE [Suspect]
     Active Substance: NOREPINEPHRINE\NOREPINEPHRINE BITARTRATE
     Dosage: UNK
     Route: 065
  668. NOREPINEPHRINE [Suspect]
     Active Substance: NOREPINEPHRINE\NOREPINEPHRINE BITARTRATE
     Dosage: UNK
     Route: 065
  669. NOREPINEPHRINE [Suspect]
     Active Substance: NOREPINEPHRINE\NOREPINEPHRINE BITARTRATE
     Dosage: UNK
     Route: 065
  670. NOREPINEPHRINE [Suspect]
     Active Substance: NOREPINEPHRINE\NOREPINEPHRINE BITARTRATE
     Dosage: 1 MILLIGRAM
  671. NOREPINEPHRINE [Suspect]
     Active Substance: NOREPINEPHRINE\NOREPINEPHRINE BITARTRATE
     Dosage: UNK
  672. NOREPINEPHRINE [Suspect]
     Active Substance: NOREPINEPHRINE\NOREPINEPHRINE BITARTRATE
     Dosage: UNK
  673. NOREPINEPHRINE [Suspect]
     Active Substance: NOREPINEPHRINE\NOREPINEPHRINE BITARTRATE
     Dosage: UNK
  674. ONDANSETRON HYDROCHLORIDE [Suspect]
     Active Substance: ONDANSETRON HYDROCHLORIDE
     Indication: Vomiting
     Dosage: 12 MILLIGRAM, Q8H
     Route: 042
  675. ONDANSETRON HYDROCHLORIDE [Suspect]
     Active Substance: ONDANSETRON HYDROCHLORIDE
     Indication: Nausea
     Dosage: UNK
     Route: 065
  676. ONDANSETRON HYDROCHLORIDE [Suspect]
     Active Substance: ONDANSETRON HYDROCHLORIDE
     Indication: Off label use
     Dosage: 4 MILLIGRAM, Q8H
     Route: 042
  677. ONDANSETRON HYDROCHLORIDE [Suspect]
     Active Substance: ONDANSETRON HYDROCHLORIDE
     Indication: Product used for unknown indication
     Dosage: 4 MILLIGRAM, 1 EVERY 8 HOURS
     Route: 042
  678. ONDANSETRON HYDROCHLORIDE [Suspect]
     Active Substance: ONDANSETRON HYDROCHLORIDE
     Dosage: 40 MILLIGRAM, 1 EVERY 8 HOURS
     Route: 042
  679. ONDANSETRON HYDROCHLORIDE [Suspect]
     Active Substance: ONDANSETRON HYDROCHLORIDE
     Dosage: 36 MILLIGRAM, Q8H
     Route: 042
  680. ONDANSETRON HYDROCHLORIDE [Suspect]
     Active Substance: ONDANSETRON HYDROCHLORIDE
     Dosage: 8 MILLIGRAM, Q8H
     Route: 042
  681. ONDANSETRON HYDROCHLORIDE [Suspect]
     Active Substance: ONDANSETRON HYDROCHLORIDE
     Dosage: 1 DF
     Route: 042
  682. ONDANSETRON HYDROCHLORIDE [Suspect]
     Active Substance: ONDANSETRON HYDROCHLORIDE
     Dosage: 41.14 MILLIGRAM, 1 IN 7 HOURS UNK
     Route: 042
  683. ONDANSETRON HYDROCHLORIDE [Suspect]
     Active Substance: ONDANSETRON HYDROCHLORIDE
     Dosage: 4 MILLIGRAM, QD
     Route: 042
  684. ONDANSETRON HYDROCHLORIDE [Suspect]
     Active Substance: ONDANSETRON HYDROCHLORIDE
     Dosage: 24 MILLIGRAM, Q8H (QD)
     Route: 042
  685. ONDANSETRON HYDROCHLORIDE [Suspect]
     Active Substance: ONDANSETRON HYDROCHLORIDE
     Dosage: 40 MILLIGRAM, TID
     Route: 042
  686. ONDANSETRON HYDROCHLORIDE [Suspect]
     Active Substance: ONDANSETRON HYDROCHLORIDE
     Dosage: 12 MILLIGRAM, TID
     Route: 042
  687. ONDANSETRON HYDROCHLORIDE [Suspect]
     Active Substance: ONDANSETRON HYDROCHLORIDE
     Dosage: 8 MILLIGRAM, TID
     Route: 042
  688. ONDANSETRON HYDROCHLORIDE [Suspect]
     Active Substance: ONDANSETRON HYDROCHLORIDE
     Dosage: 41.14 MILLIGRAM, TID
     Route: 042
  689. ONDANSETRON HYDROCHLORIDE [Suspect]
     Active Substance: ONDANSETRON HYDROCHLORIDE
     Dosage: 36 MILLIGRAM, TID
     Route: 042
  690. PHYTONADIONE [Suspect]
     Active Substance: PHYTONADIONE
     Indication: Vitamin supplementation
     Dosage: 5 MILLIGRAM, 1 DOSE PER 1 D
     Route: 065
  691. PHYTONADIONE [Suspect]
     Active Substance: PHYTONADIONE
     Indication: Off label use
     Dosage: 5 MILLIGRAM UNKNOWN
     Route: 065
  692. PHYTONADIONE [Suspect]
     Active Substance: PHYTONADIONE
     Dosage: 5 MILLIGRAM, 1 DOSE PER 1 D
  693. PHYTONADIONE [Suspect]
     Active Substance: PHYTONADIONE
     Dosage: 5 MILLIGRAM, 1 DOSE PER 1 D
  694. PHYTONADIONE [Suspect]
     Active Substance: PHYTONADIONE
     Dosage: 5 MILLIGRAM, 1 DOSE PER 1 D
     Route: 065
  695. PHYTONADIONE [Suspect]
     Active Substance: PHYTONADIONE
     Dosage: UNK
     Route: 065
  696. PHYTONADIONE [Suspect]
     Active Substance: PHYTONADIONE
     Dosage: UNK
     Route: 065
  697. PHYTONADIONE [Suspect]
     Active Substance: PHYTONADIONE
     Dosage: 5 MILLIGRAM,
  698. PHYTONADIONE [Suspect]
     Active Substance: PHYTONADIONE
     Dosage: 5 MILLIGRAM
  699. PHYTONADIONE [Suspect]
     Active Substance: PHYTONADIONE
     Dosage: 5 MILLIGRAM
     Route: 042
  700. PHYTONADIONE [Suspect]
     Active Substance: PHYTONADIONE
     Dosage: 5 MILLIGRAM, DOSAGE FORM: NOT SPECIFIED
     Route: 042
  701. PHYTONADIONE [Suspect]
     Active Substance: PHYTONADIONE
     Dosage: 5 MILLIGRAM
     Route: 042
  702. PHYTONADIONE [Suspect]
     Active Substance: PHYTONADIONE
     Dosage: 5 MILLIGRAM
     Route: 042
  703. PHYTONADIONE [Suspect]
     Active Substance: PHYTONADIONE
     Dosage: 5 MILLIGRAM, 1 EVERY 1 DAY
     Route: 042
  704. PHYTONADIONE [Suspect]
     Active Substance: PHYTONADIONE
     Dosage: 5 MILLIGRAM, QD (DOSAGE FORM: NOT SPECIFIED)
     Route: 017
  705. PHYTONADIONE [Suspect]
     Active Substance: PHYTONADIONE
     Dosage: 5 MILLIGRAM, QD (DOSAGE FORM: NOT SPECIFIED)
     Route: 065
  706. PHYTONADIONE [Suspect]
     Active Substance: PHYTONADIONE
     Dosage: 5 MILLIGRAM
     Route: 017
  707. PHYTONADIONE [Suspect]
     Active Substance: PHYTONADIONE
     Dosage: 5 MILLIGRAM, QD (DOSAGE FORM: NOT SPECIFIED)
     Route: 017
  708. PHYTONADIONE [Suspect]
     Active Substance: PHYTONADIONE
     Dosage: 5 MILLIGRAM, QD (DOSAGE FORM: NOT SPECIFIED)
     Route: 065
  709. PHYTONADIONE [Suspect]
     Active Substance: PHYTONADIONE
     Dosage: 5 MILLIGRAM, PRN (DOSAGE FORM: NOT SPECIFIED)
     Route: 017
  710. PYRIDOXINE HYDROCHLORIDE [Suspect]
     Active Substance: PYRIDOXINE HYDROCHLORIDE
     Indication: Vitamin supplementation
     Dosage: UNK , QID
     Route: 048
  711. PYRIDOXINE HYDROCHLORIDE [Suspect]
     Active Substance: PYRIDOXINE HYDROCHLORIDE
     Indication: Constipation
     Dosage: UNK; DOSAGE FORM: NOT SPECIFIED
     Route: 048
  712. PYRIDOXINE HYDROCHLORIDE [Suspect]
     Active Substance: PYRIDOXINE HYDROCHLORIDE
     Indication: Analgesic therapy
     Dosage: UNK
     Route: 065
  713. PYRIDOXINE HYDROCHLORIDE [Suspect]
     Active Substance: PYRIDOXINE HYDROCHLORIDE
     Indication: Off label use
     Dosage: UNK UNK, QD, 1X/DAY (ONCE A DAY)
     Route: 065
  714. PYRIDOXINE HYDROCHLORIDE [Suspect]
     Active Substance: PYRIDOXINE HYDROCHLORIDE
     Dosage: 10 MILLIGRAM
     Route: 048
  715. PYRIDOXINE HYDROCHLORIDE [Suspect]
     Active Substance: PYRIDOXINE HYDROCHLORIDE
     Dosage: 4 UNK, 4 EVERY 1 DAYS
     Route: 048
  716. PYRIDOXINE HYDROCHLORIDE [Suspect]
     Active Substance: PYRIDOXINE HYDROCHLORIDE
     Dosage: UNK
     Route: 048
  717. PYRIDOXINE HYDROCHLORIDE [Suspect]
     Active Substance: PYRIDOXINE HYDROCHLORIDE
     Dosage: UNK, QID
     Route: 048
  718. PYRIDOXINE HYDROCHLORIDE [Suspect]
     Active Substance: PYRIDOXINE HYDROCHLORIDE
     Dosage: UNK
     Route: 048
  719. PYRIDOXINE HYDROCHLORIDE [Suspect]
     Active Substance: PYRIDOXINE HYDROCHLORIDE
     Dosage: 10 MILLIGRAM, PRN
     Route: 048
  720. PYRIDOXINE HYDROCHLORIDE [Suspect]
     Active Substance: PYRIDOXINE HYDROCHLORIDE
     Dosage: 10 MILLIGRAM, PRN
     Route: 048
  721. PYRIDOXINE HYDROCHLORIDE [Suspect]
     Active Substance: PYRIDOXINE HYDROCHLORIDE
     Dosage: UNK
     Route: 065
  722. PYRIDOXINE HYDROCHLORIDE [Suspect]
     Active Substance: PYRIDOXINE HYDROCHLORIDE
     Dosage: UNK
     Route: 065
  723. PYRIDOXINE HYDROCHLORIDE [Suspect]
     Active Substance: PYRIDOXINE HYDROCHLORIDE
     Dosage: UNK, QD
     Route: 065
  724. PYRIDOXINE HYDROCHLORIDE [Suspect]
     Active Substance: PYRIDOXINE HYDROCHLORIDE
     Dosage: UNK
     Route: 048
  725. PYRIDOXINE HYDROCHLORIDE [Suspect]
     Active Substance: PYRIDOXINE HYDROCHLORIDE
     Dosage: UNK
     Route: 048
  726. PYRIDOXINE HYDROCHLORIDE [Suspect]
     Active Substance: PYRIDOXINE HYDROCHLORIDE
     Dosage: UNK
     Route: 065
  727. PYRIDOXINE HYDROCHLORIDE [Suspect]
     Active Substance: PYRIDOXINE HYDROCHLORIDE
     Dosage: UNK
     Route: 048
  728. PYRIDOXINE HYDROCHLORIDE [Suspect]
     Active Substance: PYRIDOXINE HYDROCHLORIDE
     Dosage: UNK, 1 EVERY 1 DAY
     Route: 048
  729. PYRIDOXINE HYDROCHLORIDE [Suspect]
     Active Substance: PYRIDOXINE HYDROCHLORIDE
     Dosage: 1 INTERNATIONAL UNIT
     Route: 048
  730. PYRIDOXINE HYDROCHLORIDE [Suspect]
     Active Substance: PYRIDOXINE HYDROCHLORIDE
     Dosage: UNK, QID
     Route: 065
  731. PYRIDOXINE HYDROCHLORIDE [Suspect]
     Active Substance: PYRIDOXINE HYDROCHLORIDE
     Dosage: 4 INTERNATIONAL UNIT
     Route: 048
  732. PYRIDOXINE HYDROCHLORIDE [Suspect]
     Active Substance: PYRIDOXINE HYDROCHLORIDE
     Dosage: UNK, QID
  733. PYRIDOXINE HYDROCHLORIDE [Suspect]
     Active Substance: PYRIDOXINE HYDROCHLORIDE
     Dosage: 4 INTERNATIONAL UNIT, 1 DOSE PER 6HRS
     Route: 065
  734. PYRIDOXINE HYDROCHLORIDE [Suspect]
     Active Substance: PYRIDOXINE HYDROCHLORIDE
     Dosage: 4 INTERNATIONAL UNIT, 1 DOSE PER 1 D
     Route: 048
  735. PYRIDOXINE HYDROCHLORIDE [Suspect]
     Active Substance: PYRIDOXINE HYDROCHLORIDE
     Dosage: 1 UNK, 1 DOSE PER 1 D
  736. PYRIDOXINE HYDROCHLORIDE [Suspect]
     Active Substance: PYRIDOXINE HYDROCHLORIDE
     Dosage: UNK, 1 DOSE PER 1D
     Route: 048
  737. PYRIDOXINE HYDROCHLORIDE [Suspect]
     Active Substance: PYRIDOXINE HYDROCHLORIDE
     Dosage: 10 MILLIGRAM, 4 DOSE PER 1 D
     Route: 048
  738. PYRIDOXINE HYDROCHLORIDE [Suspect]
     Active Substance: PYRIDOXINE HYDROCHLORIDE
     Dosage: UNK
     Route: 065
  739. PYRIDOXINE HYDROCHLORIDE [Suspect]
     Active Substance: PYRIDOXINE HYDROCHLORIDE
     Dosage: UNK
  740. PYRIDOXINE HYDROCHLORIDE [Suspect]
     Active Substance: PYRIDOXINE HYDROCHLORIDE
     Dosage: 4 INTERNATIONAL UNIT, 1 DOSE PER 6HRS
  741. SODIUM FERRIC GLUCONATE COMPLEX [Suspect]
     Active Substance: SODIUM FERRIC GLUCONATE COMPLEX
     Indication: Iron deficiency
     Dosage: 4.64 MILLIGRAM, Q4W
     Route: 042
  742. SODIUM FERRIC GLUCONATE COMPLEX [Suspect]
     Active Substance: SODIUM FERRIC GLUCONATE COMPLEX
     Dosage: 4.64 MILLIGRAM, 1 EVERY 4 WEEK
     Route: 042
  743. SODIUM FERRIC GLUCONATE COMPLEX [Suspect]
     Active Substance: SODIUM FERRIC GLUCONATE COMPLEX
     Dosage: 4.64 MILLIGRAM, 1 EVERY 4 WEEK
     Route: 042
  744. SODIUM FERRIC GLUCONATE COMPLEX [Suspect]
     Active Substance: SODIUM FERRIC GLUCONATE COMPLEX
     Dosage: 4.64 MILLIGRAM, 1 EVERY 4 WEEK
     Route: 042
  745. SODIUM FERRIC GLUCONATE COMPLEX [Suspect]
     Active Substance: SODIUM FERRIC GLUCONATE COMPLEX
     Dosage: 125 MILLIGRAM, QW
     Route: 042
  746. SODIUM FERRIC GLUCONATE COMPLEX [Suspect]
     Active Substance: SODIUM FERRIC GLUCONATE COMPLEX
     Dosage: 125 MILLIGRAM, Q4WEEKS (EVERY 4 WEEKS)
     Route: 042
  747. SODIUM FERRIC GLUCONATE COMPLEX [Suspect]
     Active Substance: SODIUM FERRIC GLUCONATE COMPLEX
     Dosage: 1.25 MILLIGRAM, QW
     Route: 042
  748. SODIUM FERRIC GLUCONATE COMPLEX [Suspect]
     Active Substance: SODIUM FERRIC GLUCONATE COMPLEX
     Dosage: 4.64 MILLIGRAM Q4W
     Route: 042
  749. SODIUM FERRIC GLUCONATE COMPLEX [Suspect]
     Active Substance: SODIUM FERRIC GLUCONATE COMPLEX
     Dosage: 4.64 MILLIGRAM
     Route: 042
  750. SODIUM FERRIC GLUCONATE COMPLEX [Suspect]
     Active Substance: SODIUM FERRIC GLUCONATE COMPLEX
     Dosage: 125 MILLIGRAM
     Route: 042
  751. SODIUM FERRIC GLUCONATE COMPLEX [Suspect]
     Active Substance: SODIUM FERRIC GLUCONATE COMPLEX
     Dosage: 4.64 MILLIGRAM Q4W
     Route: 017
  752. SODIUM FERRIC GLUCONATE COMPLEX [Suspect]
     Active Substance: SODIUM FERRIC GLUCONATE COMPLEX
     Dosage: 1.25 MILLIGRAM, Q4W
     Route: 042
  753. SODIUM FERRIC GLUCONATE COMPLEX [Suspect]
     Active Substance: SODIUM FERRIC GLUCONATE COMPLEX
     Dosage: 125 MILLIGRAM
     Route: 042
  754. SODIUM FERRIC GLUCONATE COMPLEX [Suspect]
     Active Substance: SODIUM FERRIC GLUCONATE COMPLEX
     Dosage: 125 MILLIGRAM, QM
     Route: 042
  755. SODIUM FERRIC GLUCONATE COMPLEX [Suspect]
     Active Substance: SODIUM FERRIC GLUCONATE COMPLEX
     Dosage: UNK
     Route: 065
  756. SODIUM FERRIC GLUCONATE COMPLEX [Suspect]
     Active Substance: SODIUM FERRIC GLUCONATE COMPLEX
     Dosage: 125 MILLIGRAM, QD
     Route: 042
  757. SODIUM FERRIC GLUCONATE COMPLEX [Suspect]
     Active Substance: SODIUM FERRIC GLUCONATE COMPLEX
     Dosage: 17.85 MILLIGRAM
     Route: 042
  758. SODIUM FERRIC GLUCONATE COMPLEX [Suspect]
     Active Substance: SODIUM FERRIC GLUCONATE COMPLEX
     Dosage: 17.85 MG, 1/WEEK
     Route: 042
  759. SODIUM FERRIC GLUCONATE COMPLEX [Suspect]
     Active Substance: SODIUM FERRIC GLUCONATE COMPLEX
     Dosage: 133 MILLILITER
     Route: 042
  760. SODIUM FERRIC GLUCONATE COMPLEX [Suspect]
     Active Substance: SODIUM FERRIC GLUCONATE COMPLEX
     Dosage: 125 MILLIGRAM, QD
     Route: 065
  761. SODIUM FERRIC GLUCONATE COMPLEX [Suspect]
     Active Substance: SODIUM FERRIC GLUCONATE COMPLEX
     Dosage: 125 MILLIGRAM, Q4WEEKS (EVERY 4 WEEKS)
     Route: 065
  762. SODIUM FERRIC GLUCONATE COMPLEX [Suspect]
     Active Substance: SODIUM FERRIC GLUCONATE COMPLEX
     Dosage: 4.64 MILLIGRAM Q4W
     Route: 065
  763. SODIUM FERRIC GLUCONATE COMPLEX [Suspect]
     Active Substance: SODIUM FERRIC GLUCONATE COMPLEX
     Dosage: 125 MILLIGRAM, QW
     Route: 065
  764. SODIUM FERRIC GLUCONATE COMPLEX [Suspect]
     Active Substance: SODIUM FERRIC GLUCONATE COMPLEX
     Dosage: 4.64 MILLIGRAM QM
     Route: 042
  765. SODIUM FERRIC GLUCONATE COMPLEX [Suspect]
     Active Substance: SODIUM FERRIC GLUCONATE COMPLEX
     Dosage: 4.64 MILLIGRAM Q6H
     Route: 065
  766. SODIUM FERRIC GLUCONATE COMPLEX [Suspect]
     Active Substance: SODIUM FERRIC GLUCONATE COMPLEX
     Dosage: 125 MILLIGRAM Q4W
     Route: 065
  767. SODIUM FERRIC GLUCONATE COMPLEX [Suspect]
     Active Substance: SODIUM FERRIC GLUCONATE COMPLEX
     Dosage: 17.85 MILLIGRAM
     Route: 065
  768. SODIUM FERRIC GLUCONATE COMPLEX [Suspect]
     Active Substance: SODIUM FERRIC GLUCONATE COMPLEX
     Dosage: 17.85 MG, 1/WEEK
     Route: 065
  769. SODIUM FERRIC GLUCONATE COMPLEX [Suspect]
     Active Substance: SODIUM FERRIC GLUCONATE COMPLEX
     Dosage: UNK
     Route: 065
  770. SODIUM FERRIC GLUCONATE COMPLEX [Suspect]
     Active Substance: SODIUM FERRIC GLUCONATE COMPLEX
     Dosage: 4.64 MILLIGRAM QM
     Route: 065
  771. SODIUM FERRIC GLUCONATE COMPLEX [Suspect]
     Active Substance: SODIUM FERRIC GLUCONATE COMPLEX
     Dosage: UNK
     Route: 042
  772. SODIUM FERRIC GLUCONATE COMPLEX [Suspect]
     Active Substance: SODIUM FERRIC GLUCONATE COMPLEX
     Dosage: UNK
     Route: 042
  773. SODIUM FERRIC GLUCONATE COMPLEX [Suspect]
     Active Substance: SODIUM FERRIC GLUCONATE COMPLEX
     Dosage: 125 MG, Q4W
     Route: 048
  774. SODIUM FERRIC GLUCONATE COMPLEX [Suspect]
     Active Substance: SODIUM FERRIC GLUCONATE COMPLEX
     Dosage: 125 MG, Q4W
     Route: 058
  775. UMECLIDINIUM BROMIDE\VILANTEROL TRIFENATATE [Suspect]
     Active Substance: UMECLIDINIUM BROMIDE\VILANTEROL TRIFENATATE
     Indication: Dyspnoea
     Dosage: 1 INTERNATIONAL UNIT 1 EVERY 1 DAYS ORAL
     Route: 048
  776. UMECLIDINIUM BROMIDE\VILANTEROL TRIFENATATE [Suspect]
     Active Substance: UMECLIDINIUM BROMIDE\VILANTEROL TRIFENATATE
     Dosage: 1 INTERNATIONAL UNIT, QD
     Route: 048
  777. UMECLIDINIUM BROMIDE\VILANTEROL TRIFENATATE [Suspect]
     Active Substance: UMECLIDINIUM BROMIDE\VILANTEROL TRIFENATATE
     Dosage: UNK UNK, 1 DOSE PER 1D
     Route: 048
  778. UMECLIDINIUM BROMIDE\VILANTEROL TRIFENATATE [Suspect]
     Active Substance: UMECLIDINIUM BROMIDE\VILANTEROL TRIFENATATE
     Dosage: 1 INTERNATIONAL UNIT
     Route: 048
  779. UMECLIDINIUM BROMIDE\VILANTEROL TRIFENATATE [Suspect]
     Active Substance: UMECLIDINIUM BROMIDE\VILANTEROL TRIFENATATE
     Dosage: 1 INTERNATIONAL UNIT
     Route: 048
  780. UMECLIDINIUM BROMIDE\VILANTEROL TRIFENATATE [Suspect]
     Active Substance: UMECLIDINIUM BROMIDE\VILANTEROL TRIFENATATE
     Dosage: 1 DOSAGE FORM
     Route: 048
  781. UMECLIDINIUM BROMIDE\VILANTEROL TRIFENATATE [Suspect]
     Active Substance: UMECLIDINIUM BROMIDE\VILANTEROL TRIFENATATE
     Dosage: 1 INTERNATIONAL UNIT
     Route: 048
  782. UMECLIDINIUM BROMIDE\VILANTEROL TRIFENATATE [Suspect]
     Active Substance: UMECLIDINIUM BROMIDE\VILANTEROL TRIFENATATE
     Dosage: UNK
     Route: 065
  783. UMECLIDINIUM BROMIDE\VILANTEROL TRIFENATATE [Suspect]
     Active Substance: UMECLIDINIUM BROMIDE\VILANTEROL TRIFENATATE
     Dosage: 1 INTERNATIONAL UNIT
     Route: 048
  784. UMECLIDINIUM BROMIDE\VILANTEROL TRIFENATATE [Suspect]
     Active Substance: UMECLIDINIUM BROMIDE\VILANTEROL TRIFENATATE
     Dosage: 1 INTERNATIONAL UNIT
     Route: 048
  785. UMECLIDINIUM BROMIDE\VILANTEROL TRIFENATATE [Suspect]
     Active Substance: UMECLIDINIUM BROMIDE\VILANTEROL TRIFENATATE
     Dosage: UNK, 1 EVERY 1 DAYS
     Route: 048
  786. UMECLIDINIUM BROMIDE\VILANTEROL TRIFENATATE [Suspect]
     Active Substance: UMECLIDINIUM BROMIDE\VILANTEROL TRIFENATATE
     Dosage: 1 DOSAGE FORM
     Route: 048
  787. VASOPRESSIN [Suspect]
     Active Substance: VASOPRESSIN
     Indication: Drug therapy
     Dosage: UNK
     Route: 042
  788. VASOPRESSIN [Suspect]
     Active Substance: VASOPRESSIN
     Indication: Product used for unknown indication
     Dosage: UNK
     Route: 042
  789. VASOPRESSIN [Suspect]
     Active Substance: VASOPRESSIN
     Dosage: 50 MILLILITER, 1 DOSE PER 1 D
     Route: 042
  790. VASOPRESSIN [Suspect]
     Active Substance: VASOPRESSIN
     Dosage: 50 MILLILITER, QD
     Route: 042
  791. VASOPRESSIN [Suspect]
     Active Substance: VASOPRESSIN
     Dosage: UNK
     Route: 065
  792. VASOPRESSIN [Suspect]
     Active Substance: VASOPRESSIN
     Dosage: 250 MILLILITER, 1 DOSE PER 1 D
     Route: 042
  793. VASOPRESSIN [Suspect]
     Active Substance: VASOPRESSIN
     Dosage: UNK
     Route: 042
  794. VASOPRESSIN [Suspect]
     Active Substance: VASOPRESSIN
     Dosage: UNK
     Route: 042
  795. VASOPRESSIN [Suspect]
     Active Substance: VASOPRESSIN
     Dosage: UNK
     Route: 042
  796. VASOPRESSIN [Suspect]
     Active Substance: VASOPRESSIN
     Dosage: UNK
     Route: 042
  797. VASOPRESSIN [Suspect]
     Active Substance: VASOPRESSIN
     Dosage: UNK
     Route: 042
  798. VASOPRESSIN [Suspect]
     Active Substance: VASOPRESSIN
     Dosage: UNK
     Route: 017
  799. VASOPRESSIN [Suspect]
     Active Substance: VASOPRESSIN
     Dosage: UNK
     Route: 042
  800. VASOPRESSIN [Suspect]
     Active Substance: VASOPRESSIN
     Dosage: UNK
     Route: 065
  801. VASOPRESSIN [Suspect]
     Active Substance: VASOPRESSIN
     Dosage: UNK
     Route: 065
  802. VASOPRESSIN [Suspect]
     Active Substance: VASOPRESSIN
     Dosage: 250 MILLIGRAM
     Route: 042
  803. VASOPRESSIN [Suspect]
     Active Substance: VASOPRESSIN
     Dosage: 50 MILLIGRAM
     Route: 042
  804. VASOPRESSIN [Suspect]
     Active Substance: VASOPRESSIN
     Dosage: 250 MILLILITER, QD (ONCE A DAY)
     Route: 042
  805. VASOPRESSIN [Suspect]
     Active Substance: VASOPRESSIN
     Dosage: 250 MILLILITER, QD
     Route: 065
  806. VASOPRESSIN [Suspect]
     Active Substance: VASOPRESSIN
     Dosage: 50 MILLILITER, QD
     Route: 065
  807. VASOPRESSIN [Suspect]
     Active Substance: VASOPRESSIN
     Dosage: 1 INTERNATIONAL UNIT, QD
     Route: 065
  808. VASOPRESSIN [Suspect]
     Active Substance: VASOPRESSIN
     Dosage: UNK
     Route: 017
  809. VASOPRESSIN [Suspect]
     Active Substance: VASOPRESSIN
     Dosage: 250 MILLILITER, QD
     Route: 065
  810. VASOPRESSIN [Suspect]
     Active Substance: VASOPRESSIN
     Dosage: UNK
     Route: 065
  811. VASOPRESSIN [Suspect]
     Active Substance: VASOPRESSIN
     Dosage: UNK
     Route: 065
  812. VASOPRESSIN [Suspect]
     Active Substance: VASOPRESSIN
     Dosage: UNK
  813. WARFARIN SODIUM [Suspect]
     Active Substance: WARFARIN SODIUM
     Indication: Thrombosis
     Dosage: 2 GRAM, QD
     Route: 048
  814. WARFARIN SODIUM [Suspect]
     Active Substance: WARFARIN SODIUM
     Indication: Off label use
     Dosage: 2 MILLIGRAM, QD
     Route: 048
  815. WARFARIN SODIUM [Suspect]
     Active Substance: WARFARIN SODIUM
     Indication: Intentional product misuse
     Dosage: 2 MILLILITER, QD
     Route: 048
  816. WARFARIN SODIUM [Suspect]
     Active Substance: WARFARIN SODIUM
     Dosage: 2 GRAM, QD
     Route: 042
  817. WARFARIN SODIUM [Suspect]
     Active Substance: WARFARIN SODIUM
     Dosage: UNK
     Route: 048
  818. WARFARIN SODIUM [Suspect]
     Active Substance: WARFARIN SODIUM
     Dosage: 2 MILLILITER, QD
     Route: 048
  819. WARFARIN SODIUM [Suspect]
     Active Substance: WARFARIN SODIUM
     Dosage: 2 MILLILITER, QD
     Route: 048
  820. WARFARIN SODIUM [Suspect]
     Active Substance: WARFARIN SODIUM
     Dosage: 2 GRAM, QD
     Route: 042
  821. WARFARIN SODIUM [Suspect]
     Active Substance: WARFARIN SODIUM
     Dosage: 2 MILLIGRAM, QD
     Route: 048
  822. WARFARIN SODIUM [Suspect]
     Active Substance: WARFARIN SODIUM
     Dosage: 2 MILLIGRAM
     Route: 065
  823. WARFARIN SODIUM [Suspect]
     Active Substance: WARFARIN SODIUM
     Dosage: UNK
     Route: 048
  824. WARFARIN SODIUM [Suspect]
     Active Substance: WARFARIN SODIUM
     Dosage: 2 MILLIGRAM
     Route: 048
  825. WARFARIN SODIUM [Suspect]
     Active Substance: WARFARIN SODIUM
     Dosage: 2 MILLILITER
     Route: 048
  826. WARFARIN SODIUM [Suspect]
     Active Substance: WARFARIN SODIUM
     Dosage: 2 MILLILITER
     Route: 065
  827. WARFARIN SODIUM [Suspect]
     Active Substance: WARFARIN SODIUM
     Dosage: 2 MILLILITER
     Route: 048
  828. WARFARIN SODIUM [Suspect]
     Active Substance: WARFARIN SODIUM
     Dosage: 250 MILLILITER
     Route: 042
  829. WARFARIN SODIUM [Suspect]
     Active Substance: WARFARIN SODIUM
     Dosage: 2 GRAM
     Route: 048
  830. WARFARIN SODIUM [Suspect]
     Active Substance: WARFARIN SODIUM
     Dosage: 2 MILLIGRAM
     Route: 048
  831. WARFARIN SODIUM [Suspect]
     Active Substance: WARFARIN SODIUM
     Dosage: 2 GRAM
     Route: 048
  832. WARFARIN SODIUM [Suspect]
     Active Substance: WARFARIN SODIUM
     Dosage: UNK
     Route: 065
  833. WARFARIN SODIUM [Suspect]
     Active Substance: WARFARIN SODIUM
     Dosage: 2 MILLILITER
     Route: 048
  834. WARFARIN SODIUM [Suspect]
     Active Substance: WARFARIN SODIUM
     Dosage: 250 MILLILITER
     Route: 042
  835. WARFARIN SODIUM [Suspect]
     Active Substance: WARFARIN SODIUM
     Dosage: 2 GRAM, QD
     Route: 048
  836. WARFARIN SODIUM [Suspect]
     Active Substance: WARFARIN SODIUM
     Dosage: 2 MILLIGRAM, QD
     Route: 048
  837. ASCORBIC ACID\PEG-3350\POTASSIUM CHLORIDE\SODIUM (ASCORBATE/CHLORIDE/S [Suspect]
     Active Substance: ASCORBIC ACID\POLYETHYLENE GLYCOL 3350\POTASSIUM CHLORIDE\SODIUM ASCORBATE\SODIUM CHLORIDE\SODIUM SU
     Indication: Constipation
     Dosage: 17 GRAM, QD
     Route: 048
  838. ASCORBIC ACID\PEG-3350\POTASSIUM CHLORIDE\SODIUM (ASCORBATE/CHLORIDE/S [Suspect]
     Active Substance: ASCORBIC ACID\POLYETHYLENE GLYCOL 3350\POTASSIUM CHLORIDE\SODIUM ASCORBATE\SODIUM CHLORIDE\SODIUM SU
     Indication: Iron deficiency
     Dosage: 17 MILLIGRAM
     Route: 048
  839. ASCORBIC ACID\PEG-3350\POTASSIUM CHLORIDE\SODIUM (ASCORBATE/CHLORIDE/S [Suspect]
     Active Substance: ASCORBIC ACID\POLYETHYLENE GLYCOL 3350\POTASSIUM CHLORIDE\SODIUM ASCORBATE\SODIUM CHLORIDE\SODIUM SU
     Dosage: 17 MILLIGRAM, QD
     Route: 048
  840. ASCORBIC ACID\PEG-3350\POTASSIUM CHLORIDE\SODIUM (ASCORBATE/CHLORIDE/S [Suspect]
     Active Substance: ASCORBIC ACID\POLYETHYLENE GLYCOL 3350\POTASSIUM CHLORIDE\SODIUM ASCORBATE\SODIUM CHLORIDE\SODIUM SU
     Dosage: 17 GRAM, QD
     Route: 048
  841. ASCORBIC ACID\PEG-3350\POTASSIUM CHLORIDE\SODIUM (ASCORBATE/CHLORIDE/S [Suspect]
     Active Substance: ASCORBIC ACID\POLYETHYLENE GLYCOL 3350\POTASSIUM CHLORIDE\SODIUM ASCORBATE\SODIUM CHLORIDE\SODIUM SU
     Dosage: 3 MILLIGRAM
     Route: 048
  842. ASCORBIC ACID\PEG-3350\POTASSIUM CHLORIDE\SODIUM (ASCORBATE/CHLORIDE/S [Suspect]
     Active Substance: ASCORBIC ACID\POLYETHYLENE GLYCOL 3350\POTASSIUM CHLORIDE\SODIUM ASCORBATE\SODIUM CHLORIDE\SODIUM SU
     Dosage: 3 MILLIGRAM, 1 DOSE PER 1W
     Route: 048
  843. ASCORBIC ACID\PEG-3350\POTASSIUM CHLORIDE\SODIUM (ASCORBATE/CHLORIDE/S [Suspect]
     Active Substance: ASCORBIC ACID\POLYETHYLENE GLYCOL 3350\POTASSIUM CHLORIDE\SODIUM ASCORBATE\SODIUM CHLORIDE\SODIUM SU
     Dosage: UNK
     Route: 065
  844. ASCORBIC ACID\PEG-3350\POTASSIUM CHLORIDE\SODIUM (ASCORBATE/CHLORIDE/S [Suspect]
     Active Substance: ASCORBIC ACID\POLYETHYLENE GLYCOL 3350\POTASSIUM CHLORIDE\SODIUM ASCORBATE\SODIUM CHLORIDE\SODIUM SU
     Dosage: 3 MILLIGRAM, 1 DOSE PER 1W
     Route: 065
  845. ASCORBIC ACID\PEG-3350\POTASSIUM CHLORIDE\SODIUM (ASCORBATE/CHLORIDE/S [Suspect]
     Active Substance: ASCORBIC ACID\POLYETHYLENE GLYCOL 3350\POTASSIUM CHLORIDE\SODIUM ASCORBATE\SODIUM CHLORIDE\SODIUM SU
     Dosage: UNK, 1 DOSE PER 1 D
     Route: 048
  846. ASCORBIC ACID\PEG-3350\POTASSIUM CHLORIDE\SODIUM (ASCORBATE/CHLORIDE/S [Suspect]
     Active Substance: ASCORBIC ACID\POLYETHYLENE GLYCOL 3350\POTASSIUM CHLORIDE\SODIUM ASCORBATE\SODIUM CHLORIDE\SODIUM SU
     Dosage: 2.5 MILLILITER
     Route: 042
  847. ASCORBIC ACID\PEG-3350\POTASSIUM CHLORIDE\SODIUM (ASCORBATE/CHLORIDE/S [Suspect]
     Active Substance: ASCORBIC ACID\POLYETHYLENE GLYCOL 3350\POTASSIUM CHLORIDE\SODIUM ASCORBATE\SODIUM CHLORIDE\SODIUM SU
     Dosage: 1 DOSAGE FORM, 1 EVERY 6 HOURS
  848. DIETARY SUPPLEMENT [Suspect]
     Active Substance: DIETARY SUPPLEMENT
     Indication: Vitamin supplementation
     Dosage: 5 MILLIGRAM
     Route: 065
  849. DIETARY SUPPLEMENT [Suspect]
     Active Substance: DIETARY SUPPLEMENT
     Dosage: UNK
     Route: 065
  850. SODIUM PICOSULFATE [Suspect]
     Active Substance: SODIUM PICOSULFATE
     Indication: Constipation
     Dosage: 10 MILLIGRAM (DOSAGE FORM: NOT SPECIFIED)
     Route: 054
  851. SODIUM PICOSULFATE [Suspect]
     Active Substance: SODIUM PICOSULFATE
     Indication: Analgesic therapy
     Dosage: 10 MILLIGRAM, AS NECESSARY
     Route: 065
  852. SODIUM PICOSULFATE [Suspect]
     Active Substance: SODIUM PICOSULFATE
     Indication: Ventricular fibrillation
     Dosage: 10 MG, PRN
     Route: 054
  853. SODIUM PICOSULFATE [Suspect]
     Active Substance: SODIUM PICOSULFATE
     Indication: Drug therapy
     Dosage: 10 MG,QD; DOSAGE FORM: NOT SPECIFIED
     Route: 054
  854. SODIUM PICOSULFATE [Suspect]
     Active Substance: SODIUM PICOSULFATE
     Dosage: 10 MG,QD; DOSAGE FORM: NOT SPECIFIED
     Route: 054
  855. SODIUM PICOSULFATE [Suspect]
     Active Substance: SODIUM PICOSULFATE
     Dosage: 10 MG, PRN
     Route: 065
  856. SODIUM PICOSULFATE [Suspect]
     Active Substance: SODIUM PICOSULFATE
     Dosage: 10 MILLIGRAM
     Route: 065
  857. SODIUM PICOSULFATE [Suspect]
     Active Substance: SODIUM PICOSULFATE
     Dosage: 10 MILLIGRAM
     Route: 054
  858. SODIUM PICOSULFATE [Suspect]
     Active Substance: SODIUM PICOSULFATE
     Dosage: 10 MILLIGRAM
     Route: 054
  859. SODIUM PICOSULFATE [Suspect]
     Active Substance: SODIUM PICOSULFATE
     Dosage: 10 MILLIGRAM
     Route: 054
  860. SODIUM PICOSULFATE [Suspect]
     Active Substance: SODIUM PICOSULFATE
     Dosage: 10 MILLIGRAM
     Route: 054
  861. SODIUM PICOSULFATE [Suspect]
     Active Substance: SODIUM PICOSULFATE
     Dosage: 10 MILLIGRAM
     Route: 054
  862. SODIUM PICOSULFATE [Suspect]
     Active Substance: SODIUM PICOSULFATE
     Dosage: UNK; DOSAGE FORM: NOT SPECIFIED
     Route: 065
  863. SODIUM PICOSULFATE [Suspect]
     Active Substance: SODIUM PICOSULFATE
     Dosage: 10 MILLIGRAM
     Route: 054
  864. SODIUM PICOSULFATE [Suspect]
     Active Substance: SODIUM PICOSULFATE
     Dosage: 10 MILLIGRAM
     Route: 054
  865. SODIUM PICOSULFATE [Suspect]
     Active Substance: SODIUM PICOSULFATE
     Dosage: 10 MILLIGRAM
     Route: 054
  866. SODIUM PICOSULFATE [Suspect]
     Active Substance: SODIUM PICOSULFATE
     Dosage: 10 MILLIGRAM
     Route: 065
  867. SODIUM PICOSULFATE [Suspect]
     Active Substance: SODIUM PICOSULFATE
     Dosage: UNK; DOSAGE FORM: NOT SPECIFIED
     Route: 054
  868. SODIUM PICOSULFATE [Suspect]
     Active Substance: SODIUM PICOSULFATE
     Dosage: 10 MG,QD; DOSAGE FORM: NOT SPECIFIED
     Route: 054
  869. SODIUM PICOSULFATE [Suspect]
     Active Substance: SODIUM PICOSULFATE
     Dosage: UNK; DOSAGE FORM: NOT SPECIFIED
     Route: 065
  870. SODIUM PICOSULFATE [Suspect]
     Active Substance: SODIUM PICOSULFATE
     Dosage: 10 MG,QD; DOSAGE FORM: NOT SPECIFIED
     Route: 054
  871. SODIUM PICOSULFATE [Suspect]
     Active Substance: SODIUM PICOSULFATE
     Dosage: 10 MG,QD; DOSAGE FORM: NOT SPECIFIED
     Route: 054
  872. ONDANSETRON [Suspect]
     Active Substance: ONDANSETRON
     Indication: Vomiting
     Dosage: 40 MILLIGRAM, PER 8 HOURS
     Route: 042
  873. ONDANSETRON [Suspect]
     Active Substance: ONDANSETRON
     Indication: Nausea
     Dosage: 4 MILLIGRAM 1 DOSE PER 8HRS INTRAVENOUS
     Route: 042
  874. ONDANSETRON [Suspect]
     Active Substance: ONDANSETRON
     Indication: Off label use
     Dosage: 1 DOSAGE FORM, UNK
     Route: 065
  875. ONDANSETRON [Suspect]
     Active Substance: ONDANSETRON
     Dosage: 40 MILLIGRAM, PER 8 HOURS
     Route: 065
  876. ONDANSETRON [Suspect]
     Active Substance: ONDANSETRON
     Dosage: 12 MILLIGRAM
  877. ONDANSETRON [Suspect]
     Active Substance: ONDANSETRON
     Dosage: 12 MILLIGRAM, 1 DOSE PER 1D
  878. ONDANSETRON [Suspect]
     Active Substance: ONDANSETRON
     Dosage: 36 MILLIGRAM, Q8HR IV
  879. ONDANSETRON [Suspect]
     Active Substance: ONDANSETRON
     Dosage: UNK
     Route: 065
  880. ONDANSETRON [Suspect]
     Active Substance: ONDANSETRON
     Dosage: 4 MILLIGRAM, QD
     Route: 042
  881. ONDANSETRON [Suspect]
     Active Substance: ONDANSETRON
     Dosage: 4 MILLIGRAM, 1 DOSE PER 1D
     Route: 065
  882. ONDANSETRON [Suspect]
     Active Substance: ONDANSETRON
     Dosage: 41.14 MILLIGRAM 1 EVERY 8 HOURS
     Route: 065
  883. ONDANSETRON [Suspect]
     Active Substance: ONDANSETRON
     Dosage: 8 MILLIGRAM, 3 DOSE PER 1 D
     Route: 042
  884. ONDANSETRON [Suspect]
     Active Substance: ONDANSETRON
     Dosage: 36 MILLIGRAM, 1 DOSE PER 8HRS
     Route: 065
  885. ONDANSETRON [Suspect]
     Active Substance: ONDANSETRON
     Dosage: 12 MILLIGRAM, 1 DOSE PER 8HRS
     Route: 065
  886. ONDANSETRON [Suspect]
     Active Substance: ONDANSETRON
     Dosage: 108 MILLIGRAM, 1 DOSE PER 1 D
     Route: 065
  887. ONDANSETRON [Suspect]
     Active Substance: ONDANSETRON
     Dosage: 12 MILLIGRAM, Q8HR IV
  888. ONDANSETRON [Suspect]
     Active Substance: ONDANSETRON
     Dosage: UNK
     Route: 065
  889. ONDANSETRON [Suspect]
     Active Substance: ONDANSETRON
     Dosage: 41.14 MILLIGRAM, 1 IN 7 HOURS UNK
  890. ONDANSETRON [Suspect]
     Active Substance: ONDANSETRON
     Dosage: 4 MILLIGRAM, 3 DOSE PER 1D
  891. ONDANSETRON [Suspect]
     Active Substance: ONDANSETRON
     Dosage: UNK
     Route: 065
  892. ONDANSETRON [Suspect]
     Active Substance: ONDANSETRON
     Dosage: 24 MILLIGRAM 1 EVERY 1 DAYS INTRAVENOUS
  893. ONDANSETRON [Suspect]
     Active Substance: ONDANSETRON
     Dosage: 1 DOSAGE FORM, 1 EVERY 8 HOURS
     Route: 065
  894. ONDANSETRON [Suspect]
     Active Substance: ONDANSETRON
     Dosage: 40 MILLIGRAM, 1 DOSE PER 1D
  895. ONDANSETRON [Suspect]
     Active Substance: ONDANSETRON
     Dosage: 41.14 MILLIGRAM
  896. ONDANSETRON [Suspect]
     Active Substance: ONDANSETRON
     Dosage: UNK
     Route: 065
  897. ONDANSETRON [Suspect]
     Active Substance: ONDANSETRON
     Dosage: 4 MILLIGRAM 1 DOSE PER 8HRS
     Route: 065
  898. ONDANSETRON [Suspect]
     Active Substance: ONDANSETRON
     Dosage: UNK, FORMULATION: NOT SPECIFIED
     Route: 065
  899. ONDANSETRON [Suspect]
     Active Substance: ONDANSETRON
     Dosage: 8 MILLIGRAM, 1 EVERY 8HRS
  900. ONDANSETRON [Suspect]
     Active Substance: ONDANSETRON
     Dosage: 41.14 MILLIGRAM INTRAVENOUS
  901. ONDANSETRON [Suspect]
     Active Substance: ONDANSETRON
     Dosage: UNK
     Route: 065
  902. ONDANSETRON [Suspect]
     Active Substance: ONDANSETRON
     Dosage: 36 MILLIGRAM, 1 DOSE PER 1D
     Route: 042
  903. ONDANSETRON [Suspect]
     Active Substance: ONDANSETRON
     Dosage: 40 MILLIGRAM, 1 DOSE PER 1D
     Route: 065
  904. ONDANSETRON [Suspect]
     Active Substance: ONDANSETRON
     Dosage: 1 DOSAGE FORM,
  905. ONDANSETRON [Suspect]
     Active Substance: ONDANSETRON
     Dosage: 4 MILLIGRAM
     Route: 065
  906. ONDANSETRON [Suspect]
     Active Substance: ONDANSETRON
     Dosage: 1 DOSAGE FORM, 1 EVERY 6 HOURS
  907. ONDANSETRON [Suspect]
     Active Substance: ONDANSETRON
     Dosage: 12 MILLIGRAM
     Route: 042
  908. ONDANSETRON [Suspect]
     Active Substance: ONDANSETRON
     Dosage: UNK
     Route: 065
  909. ONDANSETRON [Suspect]
     Active Substance: ONDANSETRON
     Dosage: 12 MILLIGRAM,FORMULATION: NOT SPECIFIED
     Route: 042
  910. ONDANSETRON [Suspect]
     Active Substance: ONDANSETRON
     Dosage: 12 MILLIGRAM, FORMULATION: NOT SPECIFIED
     Route: 042
  911. ONDANSETRON [Suspect]
     Active Substance: ONDANSETRON
     Dosage: 36 MILLIGRAM 3 EVERY 1 DAYS INTRAVENOUS
  912. ONDANSETRON [Suspect]
     Active Substance: ONDANSETRON
     Dosage: 40 MILLIGRAM, 3 DOSE PER 1D
  913. ONDANSETRON [Suspect]
     Active Substance: ONDANSETRON
     Dosage: 24 MILLIGRAM 1 EVERY 8HRS
     Route: 065
  914. ONDANSETRON [Suspect]
     Active Substance: ONDANSETRON
     Dosage: 41.14 MILLIGRAM 1 EVERY 8 HOURS
  915. ONDANSETRON [Suspect]
     Active Substance: ONDANSETRON
     Dosage: 4 MILLIGRAM
     Route: 042
  916. ONDANSETRON [Suspect]
     Active Substance: ONDANSETRON
     Dosage: 12 MILLIGRAM
     Route: 042
  917. ONDANSETRON [Suspect]
     Active Substance: ONDANSETRON
     Dosage: 41.4 MILLIGRAM
     Route: 065
  918. ONDANSETRON [Suspect]
     Active Substance: ONDANSETRON
     Dosage: 12 MG, Q8H
     Route: 065
  919. ONDANSETRON [Suspect]
     Active Substance: ONDANSETRON
     Dosage: 41.4 MILLIGRAM, Q8H
     Route: 065
  920. ONDANSETRON [Suspect]
     Active Substance: ONDANSETRON
     Dosage: 40 MILLIGRAM, Q8H
     Route: 065
  921. ONDANSETRON [Suspect]
     Active Substance: ONDANSETRON
     Dosage: 41.14 MILLIGRAM
     Route: 065
  922. ONDANSETRON [Suspect]
     Active Substance: ONDANSETRON
     Dosage: UNK, 1 DOSE PER 8HRS
  923. ONDANSETRON [Suspect]
     Active Substance: ONDANSETRON
     Dosage: 14.14 MILLIGRAM, 1 DOSE PER 8HRS
     Route: 065
  924. ONDANSETRON [Suspect]
     Active Substance: ONDANSETRON
     Dosage: UNK
  925. ONDANSETRON [Suspect]
     Active Substance: ONDANSETRON
     Dosage: 12 DOSAGE FORM
  926. ONDANSETRON [Suspect]
     Active Substance: ONDANSETRON
     Dosage: UNK, 1 EVERY 8 HOURS
     Route: 065
  927. ONDANSETRON [Suspect]
     Active Substance: ONDANSETRON
     Dosage: 14.14 MILLIGRAM, 1 DOSE PER 8HRS
  928. ONDANSETRON [Suspect]
     Active Substance: ONDANSETRON
     Dosage: UNK
     Route: 065
  929. ONDANSETRON [Suspect]
     Active Substance: ONDANSETRON
     Dosage: 14.14 MILLIGRAM
  930. ONDANSETRON [Suspect]
     Active Substance: ONDANSETRON
     Dosage: 12 MILLIGRAM, 3 DOSE PER 1D
     Route: 065
  931. ONDANSETRON [Suspect]
     Active Substance: ONDANSETRON
     Dosage: 24 MILLIGRAM, 3 DOSE PER 1 D
  932. ONDANSETRON [Suspect]
     Active Substance: ONDANSETRON
     Dosage: 1 DOSAGE FORM, 1 DOSE PER 1D
  933. ONDANSETRON [Suspect]
     Active Substance: ONDANSETRON
     Dosage: 8 MILLIGRAM, 1 EVERY 8HRS
     Route: 065
  934. ONDANSETRON [Suspect]
     Active Substance: ONDANSETRON
     Dosage: 41.14 MILLIGRAM
  935. ONDANSETRON [Suspect]
     Active Substance: ONDANSETRON
     Dosage: 1 DOSAGE FORM, 1 DOSE PER 1D
  936. ONDANSETRON [Suspect]
     Active Substance: ONDANSETRON
     Dosage: 12 DOSAGE FORM, 1 DOSE PER 1D
     Route: 065
  937. ONDANSETRON [Suspect]
     Active Substance: ONDANSETRON
     Dosage: 24 MILLIGRAM 1 EVERY 8HRS
  938. DISTIGMINE BROMIDE [Suspect]
     Active Substance: DISTIGMINE BROMIDE
     Indication: Dyspnoea
     Dosage: 1 INTERNATIONAL UNIT, QD
  939. DISTIGMINE BROMIDE [Suspect]
     Active Substance: DISTIGMINE BROMIDE
     Indication: Off label use
     Dosage: 1 INTERNATIONAL UNIT
  940. DISTIGMINE BROMIDE [Suspect]
     Active Substance: DISTIGMINE BROMIDE
     Dosage: UNK
     Route: 048
  941. DISTIGMINE BROMIDE [Suspect]
     Active Substance: DISTIGMINE BROMIDE
     Dosage: UNK
     Route: 065
  942. DISTIGMINE BROMIDE [Suspect]
     Active Substance: DISTIGMINE BROMIDE
     Dosage: 1 INTERNATIONAL UNIT, QD
     Route: 048
  943. DISTIGMINE BROMIDE [Suspect]
     Active Substance: DISTIGMINE BROMIDE
     Dosage: 1 EVERY 1 DAYS
     Route: 048
  944. DISTIGMINE BROMIDE [Suspect]
     Active Substance: DISTIGMINE BROMIDE
     Dosage: 1 INTERNATIONAL UNIT
     Route: 048
  945. DISTIGMINE BROMIDE [Suspect]
     Active Substance: DISTIGMINE BROMIDE
     Dosage: 1 INTERNATIONAL UNIT
     Route: 048
  946. DISTIGMINE BROMIDE [Suspect]
     Active Substance: DISTIGMINE BROMIDE
     Dosage: 1 INTERNATIONAL UNIT
     Route: 048
  947. DISTIGMINE BROMIDE [Suspect]
     Active Substance: DISTIGMINE BROMIDE
     Dosage: UNK UNK, QD
  948. AMIODARONE HYDROCHLORIDE [Suspect]
     Active Substance: AMIODARONE HYDROCHLORIDE
     Indication: Ventricular fibrillation
     Dosage: 150 MILLIGRAM, 1 EVERY 1 DAYS (DOSAGE FORM: LIQUID INTRAVENOUS)
     Route: 042
  949. AMIODARONE HYDROCHLORIDE [Suspect]
     Active Substance: AMIODARONE HYDROCHLORIDE
     Indication: Drug therapy
     Dosage: 150 MILLIGRAM, 1 EVERY 1 DAYS
     Route: 042
  950. AMIODARONE HYDROCHLORIDE [Suspect]
     Active Substance: AMIODARONE HYDROCHLORIDE
     Indication: Intentional product misuse
     Dosage: UNK, (DOSAGE FORM: LIQUID INTRAVENOUS)
     Route: 042
  951. AMIODARONE HYDROCHLORIDE [Suspect]
     Active Substance: AMIODARONE HYDROCHLORIDE
     Indication: Off label use
     Dosage: UNK, (DOSAGE FORM: LIQUID INTRAVENOUS)
     Route: 065
  952. AMIODARONE HYDROCHLORIDE [Suspect]
     Active Substance: AMIODARONE HYDROCHLORIDE
     Indication: Product used for unknown indication
     Dosage: 150 MILLIGRAM
     Route: 042
  953. AMIODARONE HYDROCHLORIDE [Suspect]
     Active Substance: AMIODARONE HYDROCHLORIDE
     Dosage: 150 MILLIGRAM, 1 EVERY 1 DAYS (DOSAGE FORM: LIQUID INTRAVENOUS)
     Route: 065
  954. AMIODARONE HYDROCHLORIDE [Suspect]
     Active Substance: AMIODARONE HYDROCHLORIDE
     Dosage: 150 MILLIGRAM, 1 EVERY 1 DAYS (DOSAGE FORM: LIQUID INTRAVENOUS)
     Route: 065
  955. AMIODARONE HYDROCHLORIDE [Suspect]
     Active Substance: AMIODARONE HYDROCHLORIDE
     Dosage: 1 EVERY 1 DAYS, (DOSAGE FORM: LIQUID INTRAVENOUS)
     Route: 065
  956. AMIODARONE HYDROCHLORIDE [Suspect]
     Active Substance: AMIODARONE HYDROCHLORIDE
     Dosage: UNK, (DOSAGE FORM: LIQUID INTRAVENOUS)
     Route: 065
  957. AMIODARONE HYDROCHLORIDE [Suspect]
     Active Substance: AMIODARONE HYDROCHLORIDE
     Dosage: 1 EVERY 1 DAYS, (DOSAGE FORM: LIQUID INTRAVENOUS)
     Route: 065
  958. AMIODARONE HYDROCHLORIDE [Suspect]
     Active Substance: AMIODARONE HYDROCHLORIDE
     Dosage: 150 MILLIGRAM, 1 EVERY 1 DAYS
     Route: 042
  959. AMIODARONE HYDROCHLORIDE [Suspect]
     Active Substance: AMIODARONE HYDROCHLORIDE
     Dosage: UNK, 1 EVERY 1 DAYS
     Route: 042
  960. AMIODARONE HYDROCHLORIDE [Suspect]
     Active Substance: AMIODARONE HYDROCHLORIDE
     Dosage: 150 MICROGRAM, QD
     Route: 042
  961. FLUTICASONE FUROATE\VILANTEROL TRIFENATATE [Suspect]
     Active Substance: FLUTICASONE FUROATE\VILANTEROL TRIFENATATE
     Indication: Product used for unknown indication
     Dosage: UNK
     Route: 065
  962. FLUTICASONE FUROATE\VILANTEROL TRIFENATATE [Suspect]
     Active Substance: FLUTICASONE FUROATE\VILANTEROL TRIFENATATE
     Indication: Dyspnoea
     Dosage: UNK
     Route: 065
  963. FLUTICASONE FUROATE\VILANTEROL TRIFENATATE [Suspect]
     Active Substance: FLUTICASONE FUROATE\VILANTEROL TRIFENATATE
     Indication: Nutritional supplementation
     Dosage: UNK
     Route: 065
  964. FLUTICASONE FUROATE\VILANTEROL TRIFENATATE [Suspect]
     Active Substance: FLUTICASONE FUROATE\VILANTEROL TRIFENATATE
     Indication: Blood phosphorus increased
     Dosage: 1 INTERNATIONAL UNIT, 1 EVERY 1 DAY (DOSAGE FORM: INHALATION)
     Route: 048
  965. FLUTICASONE FUROATE\VILANTEROL TRIFENATATE [Suspect]
     Active Substance: FLUTICASONE FUROATE\VILANTEROL TRIFENATATE
     Indication: Intentional product misuse
     Dosage: 1 DOSAGE FORM
     Route: 050
  966. FLUTICASONE FUROATE\VILANTEROL TRIFENATATE [Suspect]
     Active Substance: FLUTICASONE FUROATE\VILANTEROL TRIFENATATE
     Dosage: UNK
     Route: 058
  967. FLUTICASONE FUROATE\VILANTEROL TRIFENATATE [Suspect]
     Active Substance: FLUTICASONE FUROATE\VILANTEROL TRIFENATATE
     Dosage: 1 INTERNATIONAL UNIT
     Route: 048
  968. FLUTICASONE FUROATE\VILANTEROL TRIFENATATE [Suspect]
     Active Substance: FLUTICASONE FUROATE\VILANTEROL TRIFENATATE
     Dosage: UNK
     Route: 065
  969. FLUTICASONE FUROATE\VILANTEROL TRIFENATATE [Suspect]
     Active Substance: FLUTICASONE FUROATE\VILANTEROL TRIFENATATE
     Dosage: UNK
     Route: 065
  970. FLUTICASONE FUROATE\VILANTEROL TRIFENATATE [Suspect]
     Active Substance: FLUTICASONE FUROATE\VILANTEROL TRIFENATATE
     Dosage: UNK
     Route: 065
  971. FLUTICASONE FUROATE\VILANTEROL TRIFENATATE [Suspect]
     Active Substance: FLUTICASONE FUROATE\VILANTEROL TRIFENATATE
     Dosage: UNK, FORMULATION NOT SPECIFIED
     Route: 065
  972. FLUTICASONE FUROATE\VILANTEROL TRIFENATATE [Suspect]
     Active Substance: FLUTICASONE FUROATE\VILANTEROL TRIFENATATE
     Dosage: 1 INTERNATIONAL UNIT, QD
     Route: 065
  973. FLUTICASONE FUROATE\VILANTEROL TRIFENATATE [Suspect]
     Active Substance: FLUTICASONE FUROATE\VILANTEROL TRIFENATATE
     Dosage: 1 INTERNATIONAL UNIT
     Route: 048
  974. FLUTICASONE FUROATE\VILANTEROL TRIFENATATE [Suspect]
     Active Substance: FLUTICASONE FUROATE\VILANTEROL TRIFENATATE
     Dosage: UNK
     Route: 048
  975. FLUTICASONE FUROATE\VILANTEROL TRIFENATATE [Suspect]
     Active Substance: FLUTICASONE FUROATE\VILANTEROL TRIFENATATE
     Dosage: UNK
     Route: 065
  976. DIETARY SUPPLEMENT\HERBALS [Suspect]
     Active Substance: DIETARY SUPPLEMENT\HERBALS
     Indication: Nutritional supplementation
     Dosage: 12.5 GRAM, AS NECESSARY
     Route: 042
  977. DIETARY SUPPLEMENT\HERBALS [Suspect]
     Active Substance: DIETARY SUPPLEMENT\HERBALS
     Dosage: UNK, DOSAGE FORM: NOT SPECIFIED
     Route: 065
  978. DIETARY SUPPLEMENT\HERBALS [Suspect]
     Active Substance: DIETARY SUPPLEMENT\HERBALS
     Dosage: 12.5 GRAM, PRN
     Route: 065
  979. DIETARY SUPPLEMENT\HERBALS [Suspect]
     Active Substance: DIETARY SUPPLEMENT\HERBALS
     Dosage: 12.5 MILLIGRAM
     Route: 042
  980. DIETARY SUPPLEMENT\HERBALS [Suspect]
     Active Substance: DIETARY SUPPLEMENT\HERBALS
     Dosage: 12.5 GRAM
     Route: 042
  981. DIETARY SUPPLEMENT\HERBALS [Suspect]
     Active Substance: DIETARY SUPPLEMENT\HERBALS
     Dosage: UNK, DOSAGE FORM: NOT SPECIFIED
     Route: 065
  982. DIETARY SUPPLEMENT\HERBALS [Suspect]
     Active Substance: DIETARY SUPPLEMENT\HERBALS
     Dosage: UNK, DOSAGE FORM: NOT SPECIFIED
     Route: 065
  983. DIETARY SUPPLEMENT\HERBALS [Suspect]
     Active Substance: DIETARY SUPPLEMENT\HERBALS
     Dosage: 12.5 GRAM
     Route: 065
  984. DIETARY SUPPLEMENT\HERBALS [Suspect]
     Active Substance: DIETARY SUPPLEMENT\HERBALS
     Dosage: UNK
  985. DEXTROSE [Suspect]
     Active Substance: DEXTROSE\DEXTROSE MONOHYDRATE
     Indication: Nutritional supplementation
     Dosage: 12.5 GRAM
     Route: 065
  986. DEXTROSE [Suspect]
     Active Substance: DEXTROSE\DEXTROSE MONOHYDRATE
     Indication: Nutritional supplementation
     Dosage: 12.5 GRAM
  987. DEXTROSE [Suspect]
     Active Substance: DEXTROSE\DEXTROSE MONOHYDRATE
     Dosage: 12.5 MILLIGRAM
     Route: 065
  988. DEXTROSE [Suspect]
     Active Substance: DEXTROSE\DEXTROSE MONOHYDRATE
     Dosage: 12.5 MILLIGRAM
  989. DEXTROSE [Suspect]
     Active Substance: DEXTROSE\DEXTROSE MONOHYDRATE
     Dosage: UNK
     Route: 065
  990. DEXTROSE [Suspect]
     Active Substance: DEXTROSE\DEXTROSE MONOHYDRATE
     Dosage: 12.5 GRAM, AS REQUIRED
  991. DEXTROSE [Suspect]
     Active Substance: DEXTROSE\DEXTROSE MONOHYDRATE
     Dosage: 12.5 MILLIGRAM, 1 DOSE PER 1 D
  992. DEXTROSE [Suspect]
     Active Substance: DEXTROSE\DEXTROSE MONOHYDRATE
     Dosage: 12.5 MILLIGRAM, 1 DOSE PER 1 D
     Route: 065
  993. DEXTROSE [Suspect]
     Active Substance: DEXTROSE\DEXTROSE MONOHYDRATE
     Dosage: 12.5 MILLIGRAM
     Route: 042
  994. DEXTROSE [Suspect]
     Active Substance: DEXTROSE\DEXTROSE MONOHYDRATE
     Dosage: 12.5 GRAM, AS REQUIRED
     Route: 042
  995. DEXTROSE [Suspect]
     Active Substance: DEXTROSE\DEXTROSE MONOHYDRATE
     Dosage: 12.5 GRAM
     Route: 065
  996. DEXTROSE [Suspect]
     Active Substance: DEXTROSE\DEXTROSE MONOHYDRATE
     Dosage: UNK
     Route: 065
  997. MANNITOL [Suspect]
     Active Substance: MANNITOL
     Indication: Nutritional supplementation
     Dosage: 12.5 GRAM  INTRAVENOUS
  998. MANNITOL [Suspect]
     Active Substance: MANNITOL
     Dosage: UNK
     Route: 042
  999. MANNITOL [Suspect]
     Active Substance: MANNITOL
     Dosage: UNK
     Route: 065
  1000. MANNITOL [Suspect]
     Active Substance: MANNITOL
     Dosage: UNK
  1001. MALTOSE [Suspect]
     Active Substance: MALTOSE
     Indication: Nutritional supplementation
     Dosage: 12.5 GRAM
  1002. MALTOSE [Suspect]
     Active Substance: MALTOSE
     Dosage: 12.5 GRAM
     Route: 065
  1003. MALTOSE [Suspect]
     Active Substance: MALTOSE
     Dosage: 12.5 GRAM
     Route: 042
  1004. MALTOSE [Suspect]
     Active Substance: MALTOSE
     Dosage: 12.5 MILLIGRAM
     Route: 042
  1005. MALTOSE [Suspect]
     Active Substance: MALTOSE
     Dosage: UNK
     Route: 065
  1006. POLYETHYLENE GLYCOLS [Suspect]
     Active Substance: POLYETHYLENE GLYCOLS
     Indication: Nutritional supplementation
     Dosage: 12.5 GRAM
     Route: 042
  1007. POLYETHYLENE GLYCOLS [Suspect]
     Active Substance: POLYETHYLENE GLYCOLS
     Indication: Constipation
     Dosage: UNK, 1 EVERY 1 DAYS (DOSAGE FORM: NOT SPECIFIED)
     Route: 048
  1008. POLYETHYLENE GLYCOLS [Suspect]
     Active Substance: POLYETHYLENE GLYCOLS
     Dosage: 2.5 MILLILITER; (DOSAGE FORM: POWDER FOR SOLUTION)
     Route: 042
  1009. POLYETHYLENE GLYCOLS [Suspect]
     Active Substance: POLYETHYLENE GLYCOLS
     Dosage: 3 MILLIGRAM, 1 EVERY 1 WEEK; (DOSAGE FORM: POWDER FOR SOLUTION)
     Route: 048
  1010. POLYETHYLENE GLYCOLS [Suspect]
     Active Substance: POLYETHYLENE GLYCOLS
     Dosage: 17 MILLIGRAM, 1 EVERY 1 DAY; (DOSAGE FORM: POWDER FOR SOLUTION)
     Route: 048
  1011. POLYETHYLENE GLYCOLS [Suspect]
     Active Substance: POLYETHYLENE GLYCOLS
     Dosage: 17 MILLIGRAM; (DOSAGE FORM: POWDER FOR SOLUTION)
     Route: 048
  1012. DEXTROSE\SODIUM CHLORIDE [Suspect]
     Active Substance: DEXTROSE\SODIUM CHLORIDE
     Indication: Nutritional supplementation
     Dosage: 12.5 GRAM, AS NECESSARY
     Route: 042
  1013. SODIUM BICARBONATE [Suspect]
     Active Substance: SODIUM BICARBONATE
     Indication: Nutritional supplementation
     Dosage: 12.5 GRAM
     Route: 065
  1014. SODIUM BICARBONATE [Suspect]
     Active Substance: SODIUM BICARBONATE
     Dosage: UNK
     Route: 065
  1015. SODIUM BICARBONATE [Suspect]
     Active Substance: SODIUM BICARBONATE
     Dosage: UNK
     Route: 065
  1016. DEXTROSE\HEPARIN SODIUM [Suspect]
     Active Substance: DEXTROSE\HEPARIN SODIUM
     Indication: Anticoagulant therapy
     Dosage: (50 MILLILITER, AS NECESSARY, QD), (250 MILLILITER, AS NECESSARY)
     Route: 042
  1017. DEXTROSE\HEPARIN SODIUM [Suspect]
     Active Substance: DEXTROSE\HEPARIN SODIUM
     Indication: Product used for unknown indication
     Dosage: 250 ML QD
     Route: 042
  1018. DEXTROSE\HEPARIN SODIUM [Suspect]
     Active Substance: DEXTROSE\HEPARIN SODIUM
     Indication: Intentional product misuse
     Dosage: 250 MILLILITER
     Route: 042
  1019. DEXTROSE\HEPARIN SODIUM [Suspect]
     Active Substance: DEXTROSE\HEPARIN SODIUM
     Dosage: 50 MILLILITER
     Route: 042
  1020. DEXTROSE\HEPARIN SODIUM [Suspect]
     Active Substance: DEXTROSE\HEPARIN SODIUM
     Dosage: 50 MILLILITER
     Route: 042
  1021. DEXTROSE\HEPARIN SODIUM [Suspect]
     Active Substance: DEXTROSE\HEPARIN SODIUM
     Dosage: UNK
     Route: 042
  1022. DEXTROSE\HEPARIN SODIUM [Suspect]
     Active Substance: DEXTROSE\HEPARIN SODIUM
     Dosage: UNK
     Route: 065
  1023. DEXTROSE\HEPARIN SODIUM [Suspect]
     Active Substance: DEXTROSE\HEPARIN SODIUM
     Dosage: 250 MILLILITER
     Route: 042
  1024. DEXTROSE\HEPARIN SODIUM [Suspect]
     Active Substance: DEXTROSE\HEPARIN SODIUM
     Dosage: 250 MILLILITER
     Route: 042
  1025. DEXTROSE\HEPARIN SODIUM [Suspect]
     Active Substance: DEXTROSE\HEPARIN SODIUM
     Dosage: 50 MILLILITER
     Route: 065
  1026. DEXTROSE\HEPARIN SODIUM [Suspect]
     Active Substance: DEXTROSE\HEPARIN SODIUM
     Dosage: 250 MILLILITER
     Route: 042
  1027. DEXTROSE\HEPARIN SODIUM [Suspect]
     Active Substance: DEXTROSE\HEPARIN SODIUM
     Dosage: 50 MILLILITER
     Route: 065
  1028. DEXTROSE\HEPARIN SODIUM [Suspect]
     Active Substance: DEXTROSE\HEPARIN SODIUM
     Dosage: 50 MILLILITER
     Route: 042
  1029. DEXTROSE\HEPARIN SODIUM [Suspect]
     Active Substance: DEXTROSE\HEPARIN SODIUM
     Dosage: 12.5 GRAM
     Route: 042
  1030. DEXTROSE\HEPARIN SODIUM [Suspect]
     Active Substance: DEXTROSE\HEPARIN SODIUM
     Dosage: 12.5 MILLIGRAM
     Route: 042
  1031. DEXTROSE\HEPARIN SODIUM [Suspect]
     Active Substance: DEXTROSE\HEPARIN SODIUM
     Dosage: 12.5 MILLIGRAM
     Route: 042
  1032. DEXTROSE\HEPARIN SODIUM [Suspect]
     Active Substance: DEXTROSE\HEPARIN SODIUM
     Dosage: 12.5 GRAM, QD
     Route: 042
  1033. DEXTROSE\HEPARIN SODIUM [Suspect]
     Active Substance: DEXTROSE\HEPARIN SODIUM
     Dosage: 250 ML, AS NECESSARY
     Route: 042
  1034. HEPARIN SODIUM IN DEXTROSE [Suspect]
     Active Substance: HEPARIN SODIUM
     Indication: Anticoagulant therapy
     Dosage: 50 MILLILITER, QD
     Route: 042
  1035. HEPARIN SODIUM IN DEXTROSE [Suspect]
     Active Substance: HEPARIN SODIUM
     Indication: Off label use
     Dosage: 250 MILLILITER
     Route: 042
  1036. HEPARIN SODIUM IN DEXTROSE [Suspect]
     Active Substance: HEPARIN SODIUM
     Indication: Intentional product misuse
     Dosage: 50 MILLILITER, QD
     Route: 065
  1037. HEPARIN SODIUM IN DEXTROSE [Suspect]
     Active Substance: HEPARIN SODIUM
     Dosage: 50 MILLILITER, QD
     Route: 065
  1038. HEPARIN SODIUM IN DEXTROSE [Suspect]
     Active Substance: HEPARIN SODIUM
     Dosage: 250 MILLILITER, CYCLIC, AS NECESSARY
     Route: 042
  1039. HEPARIN SODIUM IN DEXTROSE [Suspect]
     Active Substance: HEPARIN SODIUM
     Dosage: 250 MILLILITER
     Route: 042
  1040. HEPARIN SODIUM IN DEXTROSE [Suspect]
     Active Substance: HEPARIN SODIUM
     Dosage: 50 MILLILITER, PRN
     Route: 042
  1041. HEPARIN SODIUM IN DEXTROSE [Suspect]
     Active Substance: HEPARIN SODIUM
     Dosage: 50 MILLILITER, QD
     Route: 042
  1042. HEPARIN SODIUM IN DEXTROSE [Suspect]
     Active Substance: HEPARIN SODIUM
     Dosage: 250 ML, QD
     Route: 042
  1043. HEPARIN SODIUM IN DEXTROSE [Suspect]
     Active Substance: HEPARIN SODIUM
     Dosage: UNK; (DOSAGE FORM: SOLUTION INTRAVENOUS)
     Route: 065
  1044. HEPARIN SODIUM IN DEXTROSE [Suspect]
     Active Substance: HEPARIN SODIUM
     Dosage: UNK
     Route: 065
  1045. HEPARIN SODIUM IN DEXTROSE [Suspect]
     Active Substance: HEPARIN SODIUM
     Dosage: UNK, PRN; (DOSAGE FORM: SOLUTION INTRAVENOUS)
     Route: 065
  1046. HEPARIN SODIUM IN DEXTROSE [Suspect]
     Active Substance: HEPARIN SODIUM
     Dosage: 250 ML, QD; (DOSAGE FORM: SOLUTION INTRAVENOUS)
     Route: 065
  1047. HEPARIN SODIUM IN DEXTROSE [Suspect]
     Active Substance: HEPARIN SODIUM
     Dosage: 50 ML, QD; (DOSAGE FORM: SOLUTION INTRAVENOUS)
     Route: 065
  1048. HEPARIN SODIUM IN DEXTROSE [Suspect]
     Active Substance: HEPARIN SODIUM
     Dosage: 250 MILLILITER, PRN; (DOSAGE FORM: SOLUTION INTRAVENOUS)
     Route: 042
  1049. HEPARIN SODIUM IN DEXTROSE [Suspect]
     Active Substance: HEPARIN SODIUM
     Dosage: 250 MILLIGRAM; (DOSAGE FORM: SOLUTION INTRAVENOUS)
     Route: 065
  1050. SODIUM PICOSULFATE [Suspect]
     Active Substance: SODIUM PICOSULFATE
     Indication: Constipation
     Dosage: 10 MILLIGRAM, 1 DOSE PER 1M
     Route: 065
  1051. SODIUM PICOSULFATE [Suspect]
     Active Substance: SODIUM PICOSULFATE
     Indication: Analgesic therapy
     Dosage: 10 MILLIGRAM,
     Route: 054
  1052. SODIUM PICOSULFATE [Suspect]
     Active Substance: SODIUM PICOSULFATE
     Indication: Product used for unknown indication
     Dosage: 10 MILLIGRAM 1 EVERY 1 DAYS RECTAL
     Route: 054
  1053. SODIUM PICOSULFATE [Suspect]
     Active Substance: SODIUM PICOSULFATE
     Indication: Drug therapy
     Dosage: 10 MILLIGRAM, AS NECESSARY
     Route: 065
  1054. SODIUM PICOSULFATE [Suspect]
     Active Substance: SODIUM PICOSULFATE
     Indication: Ventricular fibrillation
     Dosage: 10 MILLIGRAM
     Route: 065
  1055. SODIUM PICOSULFATE [Suspect]
     Active Substance: SODIUM PICOSULFATE
     Dosage: 10 MILLIGRAM, PRN
     Route: 065
  1056. SODIUM PICOSULFATE [Suspect]
     Active Substance: SODIUM PICOSULFATE
     Dosage: 10 MILLIGRAM
     Route: 065
  1057. SODIUM PICOSULFATE [Suspect]
     Active Substance: SODIUM PICOSULFATE
     Dosage: UNK
     Route: 065
  1058. SODIUM PICOSULFATE [Suspect]
     Active Substance: SODIUM PICOSULFATE
     Dosage: 12.5 MILLIGRAM
     Route: 065
  1059. SODIUM PICOSULFATE [Suspect]
     Active Substance: SODIUM PICOSULFATE
     Dosage: 12.5 MILLIGRAM, 1 DOSE PER 1M
     Route: 054
  1060. SODIUM PICOSULFATE [Suspect]
     Active Substance: SODIUM PICOSULFATE
     Dosage: 12.5 GRAM, 1 DOSE PER 1M
     Route: 065
  1061. SODIUM PICOSULFATE [Suspect]
     Active Substance: SODIUM PICOSULFATE
     Dosage: 10 MILLIGRAM, QD
     Route: 054
  1062. SODIUM PICOSULFATE [Suspect]
     Active Substance: SODIUM PICOSULFATE
     Dosage: 10 MILLIGRAM, QD
     Route: 065
  1063. SODIUM PICOSULFATE [Suspect]
     Active Substance: SODIUM PICOSULFATE
     Dosage: 10 MILLIGRAM, QD
     Route: 054
  1064. SODIUM PICOSULFATE [Suspect]
     Active Substance: SODIUM PICOSULFATE
     Dosage: 12.5 GRAM, QD
     Route: 065
  1065. SODIUM PICOSULFATE [Suspect]
     Active Substance: SODIUM PICOSULFATE
     Dosage: UNK
     Route: 054
  1066. SODIUM PICOSULFATE [Suspect]
     Active Substance: SODIUM PICOSULFATE
     Dosage: 12.5 MILLIGRAM, 1 DOSE PER 1M
     Route: 054
  1067. SODIUM PICOSULFATE [Suspect]
     Active Substance: SODIUM PICOSULFATE
     Dosage: 125 MILLIGRAM, 1 DOSE PER 1M
  1068. SODIUM PICOSULFATE [Suspect]
     Active Substance: SODIUM PICOSULFATE
     Dosage: UNK
     Route: 065
  1069. IPRATROPIUM BROMIDE [Suspect]
     Active Substance: IPRATROPIUM BROMIDE\IPRATROPIUM BROMIDE ANHYDROUS
     Indication: Dyspnoea
     Dosage: 1 DOSAGE FORM, 1 EVERY 6 HOURS
     Route: 065
  1070. IPRATROPIUM BROMIDE [Suspect]
     Active Substance: IPRATROPIUM BROMIDE\IPRATROPIUM BROMIDE ANHYDROUS
     Indication: Somnolence
     Dosage: 1 DOSAGE FORM, 1 DOSE PER 1 D
     Route: 065
  1071. IPRATROPIUM BROMIDE [Suspect]
     Active Substance: IPRATROPIUM BROMIDE\IPRATROPIUM BROMIDE ANHYDROUS
     Indication: Intentional product misuse
     Dosage: QD
     Route: 055
  1072. IPRATROPIUM BROMIDE [Suspect]
     Active Substance: IPRATROPIUM BROMIDE\IPRATROPIUM BROMIDE ANHYDROUS
     Indication: Sleep disorder therapy
     Dosage: 1 DOSAGE FORM, 1 DOSE PER 1 D
  1073. IPRATROPIUM BROMIDE [Suspect]
     Active Substance: IPRATROPIUM BROMIDE\IPRATROPIUM BROMIDE ANHYDROUS
     Dosage: UNK, QD
     Route: 050
  1074. IPRATROPIUM BROMIDE [Suspect]
     Active Substance: IPRATROPIUM BROMIDE\IPRATROPIUM BROMIDE ANHYDROUS
     Dosage: UNK UNK, QD
     Route: 050
  1075. IPRATROPIUM BROMIDE [Suspect]
     Active Substance: IPRATROPIUM BROMIDE\IPRATROPIUM BROMIDE ANHYDROUS
     Dosage: UNK
     Route: 065
  1076. IPRATROPIUM BROMIDE [Suspect]
     Active Substance: IPRATROPIUM BROMIDE\IPRATROPIUM BROMIDE ANHYDROUS
     Dosage: UNK, QD
     Route: 065
  1077. IPRATROPIUM BROMIDE [Suspect]
     Active Substance: IPRATROPIUM BROMIDE\IPRATROPIUM BROMIDE ANHYDROUS
     Dosage: UNK UNK, QD
     Route: 050
  1078. IPRATROPIUM BROMIDE [Suspect]
     Active Substance: IPRATROPIUM BROMIDE\IPRATROPIUM BROMIDE ANHYDROUS
     Dosage: 1 DF, Q6HR (EVERY 6 HOURS)
     Route: 065
  1079. IPRATROPIUM BROMIDE [Suspect]
     Active Substance: IPRATROPIUM BROMIDE\IPRATROPIUM BROMIDE ANHYDROUS
     Dosage: 1 DOSAGE FORM, 1 DOSE PER 8HRS
     Route: 050
  1080. IPRATROPIUM BROMIDE [Suspect]
     Active Substance: IPRATROPIUM BROMIDE\IPRATROPIUM BROMIDE ANHYDROUS
     Dosage: UNK UNK, QD
     Route: 050
  1081. IPRATROPIUM BROMIDE [Suspect]
     Active Substance: IPRATROPIUM BROMIDE\IPRATROPIUM BROMIDE ANHYDROUS
     Dosage: UNK
     Route: 050
  1082. IPRATROPIUM BROMIDE [Suspect]
     Active Substance: IPRATROPIUM BROMIDE\IPRATROPIUM BROMIDE ANHYDROUS
     Dosage: 1 DOSAGE FORM, 1 DOSE PER 1 D
     Route: 050
  1083. IPRATROPIUM BROMIDE [Suspect]
     Active Substance: IPRATROPIUM BROMIDE\IPRATROPIUM BROMIDE ANHYDROUS
     Dosage: 4 UNK, QD
     Route: 055
  1084. IPRATROPIUM BROMIDE [Suspect]
     Active Substance: IPRATROPIUM BROMIDE\IPRATROPIUM BROMIDE ANHYDROUS
     Dosage: EVERY 1 DAY
     Route: 065
  1085. IPRATROPIUM BROMIDE [Suspect]
     Active Substance: IPRATROPIUM BROMIDE\IPRATROPIUM BROMIDE ANHYDROUS
     Dosage: 1 DOSAGE FORM
     Route: 065
  1086. IPRATROPIUM BROMIDE [Suspect]
     Active Substance: IPRATROPIUM BROMIDE\IPRATROPIUM BROMIDE ANHYDROUS
     Dosage: UNK
     Route: 048
  1087. IPRATROPIUM BROMIDE [Suspect]
     Active Substance: IPRATROPIUM BROMIDE\IPRATROPIUM BROMIDE ANHYDROUS
     Dosage: UNK
     Route: 055
  1088. IPRATROPIUM BROMIDE [Suspect]
     Active Substance: IPRATROPIUM BROMIDE\IPRATROPIUM BROMIDE ANHYDROUS
     Dosage: 1 DOSAGE FORM, 1 EVERY 6 HOURS
  1089. IPRATROPIUM BROMIDE [Suspect]
     Active Substance: IPRATROPIUM BROMIDE\IPRATROPIUM BROMIDE ANHYDROUS
     Dosage: UNK
     Route: 065
  1090. IPRATROPIUM BROMIDE [Suspect]
     Active Substance: IPRATROPIUM BROMIDE\IPRATROPIUM BROMIDE ANHYDROUS
     Dosage: 4 DOSAGE FORM, 1 DOSE PER 1 D
     Route: 065
  1091. IPRATROPIUM BROMIDE [Suspect]
     Active Substance: IPRATROPIUM BROMIDE\IPRATROPIUM BROMIDE ANHYDROUS
     Dosage: 1 DOSAGE FORM, Q8H
     Route: 065
  1092. IPRATROPIUM BROMIDE [Suspect]
     Active Substance: IPRATROPIUM BROMIDE\IPRATROPIUM BROMIDE ANHYDROUS
     Dosage: 4 DOSAGE FORM
  1093. IPRATROPIUM BROMIDE [Suspect]
     Active Substance: IPRATROPIUM BROMIDE\IPRATROPIUM BROMIDE ANHYDROUS
     Dosage: 1 DOSAGE FORM
     Route: 050
  1094. IPRATROPIUM BROMIDE [Suspect]
     Active Substance: IPRATROPIUM BROMIDE\IPRATROPIUM BROMIDE ANHYDROUS
     Dosage: UNK
  1095. IPRATROPIUM BROMIDE [Suspect]
     Active Substance: IPRATROPIUM BROMIDE\IPRATROPIUM BROMIDE ANHYDROUS
     Dosage: 1 DOSAGE FORM
  1096. IPRATROPIUM BROMIDE [Suspect]
     Active Substance: IPRATROPIUM BROMIDE\IPRATROPIUM BROMIDE ANHYDROUS
     Dosage: UNK
  1097. IPRATROPIUM BROMIDE [Suspect]
     Active Substance: IPRATROPIUM BROMIDE\IPRATROPIUM BROMIDE ANHYDROUS
     Dosage: 1 DOSAGE FORM
     Route: 065
  1098. IPRATROPIUM BROMIDE [Suspect]
     Active Substance: IPRATROPIUM BROMIDE\IPRATROPIUM BROMIDE ANHYDROUS
     Dosage: UNK
  1099. IPRATROPIUM BROMIDE [Suspect]
     Active Substance: IPRATROPIUM BROMIDE\IPRATROPIUM BROMIDE ANHYDROUS
     Dosage: 4 DOSAGE FORM
  1100. IPRATROPIUM BROMIDE [Suspect]
     Active Substance: IPRATROPIUM BROMIDE\IPRATROPIUM BROMIDE ANHYDROUS
     Dosage: 1 DOSAGE FORM
     Route: 050
  1101. IPRATROPIUM BROMIDE [Suspect]
     Active Substance: IPRATROPIUM BROMIDE\IPRATROPIUM BROMIDE ANHYDROUS
     Dosage: UNK
     Route: 050
  1102. IPRATROPIUM BROMIDE [Suspect]
     Active Substance: IPRATROPIUM BROMIDE\IPRATROPIUM BROMIDE ANHYDROUS
     Dosage: 1 DOSAGE FORM
  1103. IPRATROPIUM BROMIDE [Suspect]
     Active Substance: IPRATROPIUM BROMIDE\IPRATROPIUM BROMIDE ANHYDROUS
     Dosage: UNK
  1104. IPRATROPIUM BROMIDE [Suspect]
     Active Substance: IPRATROPIUM BROMIDE\IPRATROPIUM BROMIDE ANHYDROUS
     Dosage: 1 DOSAGE FORM
     Route: 065
  1105. IPRATROPIUM BROMIDE [Suspect]
     Active Substance: IPRATROPIUM BROMIDE\IPRATROPIUM BROMIDE ANHYDROUS
     Dosage: UNK
  1106. IPRATROPIUM BROMIDE [Suspect]
     Active Substance: IPRATROPIUM BROMIDE\IPRATROPIUM BROMIDE ANHYDROUS
     Dosage: 1 DOSAGE FORM
     Route: 065
  1107. IPRATROPIUM BROMIDE [Suspect]
     Active Substance: IPRATROPIUM BROMIDE\IPRATROPIUM BROMIDE ANHYDROUS
     Dosage: UNK
     Route: 065
  1108. IPRATROPIUM BROMIDE [Suspect]
     Active Substance: IPRATROPIUM BROMIDE\IPRATROPIUM BROMIDE ANHYDROUS
     Dosage: UNK
  1109. IPRATROPIUM BROMIDE [Suspect]
     Active Substance: IPRATROPIUM BROMIDE\IPRATROPIUM BROMIDE ANHYDROUS
     Dosage: UNK
     Route: 050
  1110. IPRATROPIUM BROMIDE [Suspect]
     Active Substance: IPRATROPIUM BROMIDE\IPRATROPIUM BROMIDE ANHYDROUS
     Dosage: UNK
     Route: 050
  1111. IPRATROPIUM BROMIDE [Suspect]
     Active Substance: IPRATROPIUM BROMIDE\IPRATROPIUM BROMIDE ANHYDROUS
     Dosage: UNK
  1112. IPRATROPIUM BROMIDE [Suspect]
     Active Substance: IPRATROPIUM BROMIDE\IPRATROPIUM BROMIDE ANHYDROUS
     Dosage: UNK
     Route: 050
  1113. IPRATROPIUM BROMIDE [Suspect]
     Active Substance: IPRATROPIUM BROMIDE\IPRATROPIUM BROMIDE ANHYDROUS
     Dosage: UNK
     Route: 050
  1114. IPRATROPIUM BROMIDE [Suspect]
     Active Substance: IPRATROPIUM BROMIDE\IPRATROPIUM BROMIDE ANHYDROUS
     Dosage: UNK UNK, TID
     Route: 065
  1115. IPRATROPIUM BROMIDE [Suspect]
     Active Substance: IPRATROPIUM BROMIDE\IPRATROPIUM BROMIDE ANHYDROUS
     Dosage: 1 DOSAGE FORM, QID
     Route: 065
  1116. IPRATROPIUM BROMIDE [Suspect]
     Active Substance: IPRATROPIUM BROMIDE\IPRATROPIUM BROMIDE ANHYDROUS
     Dosage: 3 DOSAGE FORM, 3 EVERY 1 DAYS
     Route: 065
  1117. IPRATROPIUM BROMIDE [Suspect]
     Active Substance: IPRATROPIUM BROMIDE\IPRATROPIUM BROMIDE ANHYDROUS
     Dosage: 1 DOSAGE FORM, 3 EVERY 1 DAYS
     Route: 065
  1118. IPRATROPIUM BROMIDE [Suspect]
     Active Substance: IPRATROPIUM BROMIDE\IPRATROPIUM BROMIDE ANHYDROUS
     Dosage: UNK, Q4D
     Route: 065
  1119. IPRATROPIUM BROMIDE [Suspect]
     Active Substance: IPRATROPIUM BROMIDE\IPRATROPIUM BROMIDE ANHYDROUS
     Dosage: UNK, 4 DOSE PER 1 D
     Route: 050
  1120. IPRATROPIUM BROMIDE [Suspect]
     Active Substance: IPRATROPIUM BROMIDE\IPRATROPIUM BROMIDE ANHYDROUS
     Dosage: UNK UNK, 1 DOSE PER 0.3D
  1121. IPRATROPIUM BROMIDE [Suspect]
     Active Substance: IPRATROPIUM BROMIDE\IPRATROPIUM BROMIDE ANHYDROUS
     Dosage: UNK, 1 DOSE PER 1 D
  1122. IPRATROPIUM BROMIDE [Suspect]
     Active Substance: IPRATROPIUM BROMIDE\IPRATROPIUM BROMIDE ANHYDROUS
     Dosage: UNK
     Route: 065
  1123. IPRATROPIUM BROMIDE [Suspect]
     Active Substance: IPRATROPIUM BROMIDE\IPRATROPIUM BROMIDE ANHYDROUS
     Dosage: UNK, 1 DOSE PER 1 D
     Route: 065
  1124. IPRATROPIUM BROMIDE [Suspect]
     Active Substance: IPRATROPIUM BROMIDE\IPRATROPIUM BROMIDE ANHYDROUS
     Dosage: UNK, 4 DOSE PER 1 D
     Route: 065
  1125. BISMUTH SUBNITRATE\MAGNESIUM OXIDE\MAGNESIUM TRISILICATE\SODIUM PHOSPH [Suspect]
     Active Substance: BISMUTH SUBNITRATE\MAGNESIUM OXIDE\MAGNESIUM TRISILICATE\SODIUM PHOSPHATE, MONOBASIC, ANHYDROUS
     Indication: Constipation
     Dosage: 133 MILLILITER, PRN
     Route: 054
  1126. BISMUTH SUBNITRATE\MAGNESIUM OXIDE\MAGNESIUM TRISILICATE\SODIUM PHOSPH [Suspect]
     Active Substance: BISMUTH SUBNITRATE\MAGNESIUM OXIDE\MAGNESIUM TRISILICATE\SODIUM PHOSPHATE, MONOBASIC, ANHYDROUS
     Dosage: 133 MILLILITER, PRN, DOSAGE FORM: NOT SPECIFIED
     Route: 054
  1127. BISMUTH SUBNITRATE\MAGNESIUM OXIDE\MAGNESIUM TRISILICATE\SODIUM PHOSPH [Suspect]
     Active Substance: BISMUTH SUBNITRATE\MAGNESIUM OXIDE\MAGNESIUM TRISILICATE\SODIUM PHOSPHATE, MONOBASIC, ANHYDROUS
     Dosage: 133 MILLIGRAM
     Route: 054
  1128. BISMUTH SUBNITRATE\MAGNESIUM OXIDE\MAGNESIUM TRISILICATE\SODIUM PHOSPH [Suspect]
     Active Substance: BISMUTH SUBNITRATE\MAGNESIUM OXIDE\MAGNESIUM TRISILICATE\SODIUM PHOSPHATE, MONOBASIC, ANHYDROUS
     Dosage: 133ML DOSAGE NOT SPECIFIED
     Route: 065
  1129. BISMUTH SUBNITRATE\MAGNESIUM OXIDE\MAGNESIUM TRISILICATE\SODIUM PHOSPH [Suspect]
     Active Substance: BISMUTH SUBNITRATE\MAGNESIUM OXIDE\MAGNESIUM TRISILICATE\SODIUM PHOSPHATE, MONOBASIC, ANHYDROUS
     Dosage: 133 MILLIGRAM, AS REQUIRED, DOSAGE FORM: NOT SPECIFIED
     Route: 065
  1130. BISMUTH SUBNITRATE\MAGNESIUM OXIDE\MAGNESIUM TRISILICATE\SODIUM PHOSPH [Suspect]
     Active Substance: BISMUTH SUBNITRATE\MAGNESIUM OXIDE\MAGNESIUM TRISILICATE\SODIUM PHOSPHATE, MONOBASIC, ANHYDROUS
     Dosage: 133 MILLIGRAM, AS REQUIRED, DOSAGE FORM: NOT SPECIFIED
     Route: 054
  1131. BISMUTH SUBNITRATE\MAGNESIUM OXIDE\MAGNESIUM TRISILICATE\SODIUM PHOSPH [Suspect]
     Active Substance: BISMUTH SUBNITRATE\MAGNESIUM OXIDE\MAGNESIUM TRISILICATE\SODIUM PHOSPHATE, MONOBASIC, ANHYDROUS
     Dosage: 133 MILLILITER, PRN
     Route: 054
  1132. BISMUTH SUBNITRATE\MAGNESIUM OXIDE\MAGNESIUM TRISILICATE\SODIUM PHOSPH [Suspect]
     Active Substance: BISMUTH SUBNITRATE\MAGNESIUM OXIDE\MAGNESIUM TRISILICATE\SODIUM PHOSPHATE, MONOBASIC, ANHYDROUS
     Dosage: 133 MILLILITER, PRN, DOSAGE FORM: NOT SPECIFIED
     Route: 054
  1133. BISMUTH SUBNITRATE\MAGNESIUM OXIDE\MAGNESIUM TRISILICATE\SODIUM PHOSPH [Suspect]
     Active Substance: BISMUTH SUBNITRATE\MAGNESIUM OXIDE\MAGNESIUM TRISILICATE\SODIUM PHOSPHATE, MONOBASIC, ANHYDROUS
     Dosage: 133 MILLILITER
     Route: 054
  1134. BISMUTH SUBNITRATE\MAGNESIUM OXIDE\MAGNESIUM TRISILICATE\SODIUM PHOSPH [Suspect]
     Active Substance: BISMUTH SUBNITRATE\MAGNESIUM OXIDE\MAGNESIUM TRISILICATE\SODIUM PHOSPHATE, MONOBASIC, ANHYDROUS
     Dosage: 133 MILLILITER
     Route: 065
  1135. UNSPECIFIED INGREDIENT [Suspect]
     Active Substance: UNSPECIFIED INGREDIENT
     Indication: Anticoagulant therapy
     Dosage: 50 MILLILITER, QD
     Route: 042
  1136. UNSPECIFIED INGREDIENT [Suspect]
     Active Substance: UNSPECIFIED INGREDIENT
     Indication: Product used for unknown indication
     Dosage: 250 MILLILITER
     Route: 065
  1137. UNSPECIFIED INGREDIENT [Suspect]
     Active Substance: UNSPECIFIED INGREDIENT
     Dosage: 50 MILLILITER
     Route: 042
  1138. UNSPECIFIED INGREDIENT [Suspect]
     Active Substance: UNSPECIFIED INGREDIENT
     Dosage: 250 MILLILITER
     Route: 042
  1139. UNSPECIFIED INGREDIENT [Suspect]
     Active Substance: UNSPECIFIED INGREDIENT
     Dosage: 250 MILLILITER, QD
     Route: 065
  1140. UNSPECIFIED INGREDIENT [Suspect]
     Active Substance: UNSPECIFIED INGREDIENT
     Dosage: UNK
     Route: 042
  1141. UNSPECIFIED INGREDIENT [Suspect]
     Active Substance: UNSPECIFIED INGREDIENT
     Dosage: 250 MILLILITRE, 1 DOSE PER 1 D
     Route: 065
  1142. UNSPECIFIED INGREDIENT [Suspect]
     Active Substance: UNSPECIFIED INGREDIENT
     Dosage: UNK
  1143. UNSPECIFIED INGREDIENT [Suspect]
     Active Substance: UNSPECIFIED INGREDIENT
     Dosage: 50 MILLILITRE, 1 DOSE PER 1 D
     Route: 065
  1144. UNSPECIFIED INGREDIENT [Suspect]
     Active Substance: UNSPECIFIED INGREDIENT
     Dosage: 250 MILLIGRAM, 1 DOSE PER 1 D
     Route: 042
  1145. DEXTROSE\SODIUM CHLORIDE [Suspect]
     Active Substance: DEXTROSE\SODIUM CHLORIDE
     Indication: Nutritional supplementation
     Dosage: 12.5 GRAM, QD
     Route: 042
  1146. DEXTROSE\SODIUM CHLORIDE [Suspect]
     Active Substance: DEXTROSE\SODIUM CHLORIDE
     Dosage: UNK
     Route: 042
  1147. DEXTROSE\SODIUM CHLORIDE [Suspect]
     Active Substance: DEXTROSE\SODIUM CHLORIDE
     Dosage: UNK; (DOSAGE FORM: SOLUTION INTRAVENOUS)
     Route: 065
  1148. DEXTROSE\SODIUM CHLORIDE [Suspect]
     Active Substance: DEXTROSE\SODIUM CHLORIDE
     Dosage: UNK; (DOSAGE FORM: SOLUTION INTRAVENOUS)
     Route: 065
  1149. DEXTROSE\SODIUM CHLORIDE [Suspect]
     Active Substance: DEXTROSE\SODIUM CHLORIDE
     Dosage: UNK; (DOSAGE FORM: SOLUTION INTRAVENOUS)
     Route: 065
  1150. DEXTROSE\SODIUM CHLORIDE [Suspect]
     Active Substance: DEXTROSE\SODIUM CHLORIDE
     Dosage: 12.5 MILLIGRAM
     Route: 042
  1151. VILANTEROL TRIFENATATE [Suspect]
     Active Substance: VILANTEROL TRIFENATATE
     Indication: Product used for unknown indication
     Dosage: UNK
     Route: 065
  1152. VILANTEROL TRIFENATATE [Suspect]
     Active Substance: VILANTEROL TRIFENATATE
     Indication: Dyspnoea
     Dosage: UNK
     Route: 065
  1153. VILANTEROL TRIFENATATE [Suspect]
     Active Substance: VILANTEROL TRIFENATATE
     Indication: Nutritional supplementation
     Dosage: UNK
     Route: 065
  1154. VILANTEROL TRIFENATATE [Suspect]
     Active Substance: VILANTEROL TRIFENATATE
     Dosage: UNK
     Route: 065
  1155. VILANTEROL TRIFENATATE [Suspect]
     Active Substance: VILANTEROL TRIFENATATE
     Dosage: UNK
     Route: 065
  1156. VILANTEROL TRIFENATATE [Suspect]
     Active Substance: VILANTEROL TRIFENATATE
     Dosage: UNK
     Route: 065
  1157. VILANTEROL TRIFENATATE [Suspect]
     Active Substance: VILANTEROL TRIFENATATE
     Dosage: UNK
     Route: 065
  1158. VILANTEROL TRIFENATATE [Suspect]
     Active Substance: VILANTEROL TRIFENATATE
     Dosage: UNK UNK, QD
     Route: 048
  1159. VILANTEROL TRIFENATATE [Suspect]
     Active Substance: VILANTEROL TRIFENATATE
     Dosage: UNK UNK, QD
     Route: 048
  1160. VILANTEROL TRIFENATATE [Suspect]
     Active Substance: VILANTEROL TRIFENATATE
     Dosage: 1 INTERNATIONAL UNIT
     Route: 048
  1161. VILANTEROL TRIFENATATE [Suspect]
     Active Substance: VILANTEROL TRIFENATATE
     Dosage: 1 DOSAGE FORM
     Route: 065
  1162. VILANTEROL TRIFENATATE [Suspect]
     Active Substance: VILANTEROL TRIFENATATE
     Dosage: UNK
     Route: 048
  1163. VILANTEROL TRIFENATATE [Suspect]
     Active Substance: VILANTEROL TRIFENATATE
     Dosage: UNK UNK, QD
     Route: 065
  1164. VILANTEROL TRIFENATATE [Suspect]
     Active Substance: VILANTEROL TRIFENATATE
     Dosage: UNK UNK, QD
  1165. ALBUTEROL SULFATE [Suspect]
     Active Substance: ALBUTEROL SULFATE
     Indication: Chronic obstructive pulmonary disease
     Dosage: 1 DOSAGE FORM, 1 EVERY 6 HOURS
     Route: 065
  1166. ALBUTEROL SULFATE [Suspect]
     Active Substance: ALBUTEROL SULFATE
     Dosage: UNK UNK, Q6H
     Route: 065
  1167. ALBUTEROL SULFATE [Suspect]
     Active Substance: ALBUTEROL SULFATE
     Dosage: UNK UNK, Q6H
     Route: 050
  1168. ALBUTEROL SULFATE [Suspect]
     Active Substance: ALBUTEROL SULFATE
     Dosage: UNK,4X/DAY (Q6H; EVERY 6 HOURS)
     Route: 065
  1169. ALBUTEROL SULFATE [Suspect]
     Active Substance: ALBUTEROL SULFATE
     Dosage: 4 DOSAGE FORM, 1 DOSE PER 1 D
     Route: 065
  1170. ALBUTEROL SULFATE [Suspect]
     Active Substance: ALBUTEROL SULFATE
     Dosage: UNK
     Route: 065
  1171. ALBUTEROL SULFATE [Suspect]
     Active Substance: ALBUTEROL SULFATE
     Dosage: UNK, QD
     Route: 050
  1172. ALBUTEROL SULFATE [Suspect]
     Active Substance: ALBUTEROL SULFATE
     Dosage: 4 DOSAGE FORM, 1 DOSE PER 1 D
  1173. ALBUTEROL SULFATE [Suspect]
     Active Substance: ALBUTEROL SULFATE
     Dosage: 1 DOSAGE FORM, 4 DOSE PER 1D
  1174. ALBUTEROL SULFATE [Suspect]
     Active Substance: ALBUTEROL SULFATE
     Dosage: 4 DOSAGE FORM, 1 EVERY 6 HOURS
  1175. ALBUTEROL SULFATE [Suspect]
     Active Substance: ALBUTEROL SULFATE
     Dosage: UNK UNK, Q6H
     Route: 065
  1176. ALBUTEROL SULFATE [Suspect]
     Active Substance: ALBUTEROL SULFATE
     Dosage: UNK UNK, Q6H
     Route: 065
  1177. ALBUTEROL SULFATE [Suspect]
     Active Substance: ALBUTEROL SULFATE
     Dosage: 1 DOSAGE FORM
     Route: 050
  1178. ALBUTEROL SULFATE [Suspect]
     Active Substance: ALBUTEROL SULFATE
     Dosage: UNK
     Route: 065
  1179. ALBUTEROL SULFATE [Suspect]
     Active Substance: ALBUTEROL SULFATE
     Dosage: UNK UNK, QID
     Route: 065
  1180. ALBUTEROL SULFATE [Suspect]
     Active Substance: ALBUTEROL SULFATE
     Dosage: UNK, QD
     Route: 050
  1181. ALBUTEROL SULFATE [Suspect]
     Active Substance: ALBUTEROL SULFATE
     Dosage: 4 DOSAGE FORM, 1 EVERY 6 HOURS
     Route: 065
  1182. ALBUTEROL SULFATE [Suspect]
     Active Substance: ALBUTEROL SULFATE
     Dosage: 1 DOSAGE FORM
  1183. ALBUTEROL SULFATE [Suspect]
     Active Substance: ALBUTEROL SULFATE
     Dosage: 1 DOSAGE FORM, QD
     Route: 065
  1184. ALBUTEROL SULFATE [Suspect]
     Active Substance: ALBUTEROL SULFATE
     Dosage: 1 DOSAGE FORM, QID
     Route: 065
  1185. ALBUTEROL SULFATE [Suspect]
     Active Substance: ALBUTEROL SULFATE
     Dosage: UNK UNK, QD
  1186. ALBUTEROL SULFATE [Suspect]
     Active Substance: ALBUTEROL SULFATE
     Dosage: UNK UNK, 1 DOSE PER 6HRS
  1187. ALBUTEROL SULFATE [Suspect]
     Active Substance: ALBUTEROL SULFATE
     Dosage: UNK UNK, 1 DOSE PER 6HRS
     Route: 050
  1188. ALBUTEROL SULFATE [Suspect]
     Active Substance: ALBUTEROL SULFATE
     Dosage: UNK UNK, 1 DOSE PER 6HRS
     Route: 065
  1189. ALBUTEROL SULFATE [Suspect]
     Active Substance: ALBUTEROL SULFATE
     Dosage: UNK
     Route: 065
  1190. ALBUTEROL SULFATE [Suspect]
     Active Substance: ALBUTEROL SULFATE
     Dosage: 1 DOSAGE FORM, 4 DOSE PER 1D
     Route: 065
  1191. ALBUTEROL SULFATE [Suspect]
     Active Substance: ALBUTEROL SULFATE
     Dosage: UNK UNK, 4 DOSE PER 1 D
     Route: 065
  1192. ALBUTEROL SULFATE [Suspect]
     Active Substance: ALBUTEROL SULFATE
     Dosage: UNK, Q6H
  1193. DEXTROSE\SODIUM CHLORIDE [Suspect]
     Active Substance: DEXTROSE\SODIUM CHLORIDE
     Indication: Nutritional supplementation
     Dosage: 12.5 MILLIGRAM, AS NECESSARY
     Route: 042
  1194. DEXTROSE\SODIUM CHLORIDE [Suspect]
     Active Substance: DEXTROSE\SODIUM CHLORIDE
     Indication: Product used for unknown indication
     Dosage: 12.5 MILLIGRAM, PRN
     Route: 042
  1195. DEXTROSE\SODIUM CHLORIDE [Suspect]
     Active Substance: DEXTROSE\SODIUM CHLORIDE
     Dosage: 12.5 MILLIGRAM
     Route: 042
  1196. DEXTROSE\SODIUM CHLORIDE [Suspect]
     Active Substance: DEXTROSE\SODIUM CHLORIDE
     Dosage: UNK
     Route: 042
  1197. DEXTROSE\SODIUM CHLORIDE [Suspect]
     Active Substance: DEXTROSE\SODIUM CHLORIDE
     Dosage: 12.5 G, QD
     Route: 042
  1198. DEXTROSE\SODIUM CHLORIDE [Suspect]
     Active Substance: DEXTROSE\SODIUM CHLORIDE
     Dosage: 12.5 G
     Route: 042
  1199. DEXTROSE\SODIUM CHLORIDE [Suspect]
     Active Substance: DEXTROSE\SODIUM CHLORIDE
     Dosage: 12.5 G, QD; (DOSAGE FORM: NOT SPECIFIED)
     Route: 065
  1200. DEXTROSE\SODIUM CHLORIDE [Suspect]
     Active Substance: DEXTROSE\SODIUM CHLORIDE
     Dosage: 12.5 MILLIGRAM, AS NECESSARY
     Route: 065
  1201. DEXTROSE\SODIUM CHLORIDE [Suspect]
     Active Substance: DEXTROSE\SODIUM CHLORIDE
     Dosage: 12.5 G, QD; (DOSAGE FORM: NOT SPECIFIED)
     Route: 065
  1202. DEXTROSE\SODIUM CHLORIDE [Suspect]
     Active Substance: DEXTROSE\SODIUM CHLORIDE
     Dosage: 12.5 MILLIGRAM
     Route: 065
  1203. DEXTROSE\SODIUM CHLORIDE [Suspect]
     Active Substance: DEXTROSE\SODIUM CHLORIDE
     Dosage: 12.5 MILLIGRAM, AS NECESSARY
     Route: 065
  1204. FLUTICASONE FUROATE [Suspect]
     Active Substance: FLUTICASONE FUROATE
     Indication: Product used for unknown indication
     Dosage: UNK
     Route: 065
  1205. FLUTICASONE FUROATE [Suspect]
     Active Substance: FLUTICASONE FUROATE
     Indication: Nutritional supplementation
     Dosage: UNK
     Route: 065
  1206. FLUTICASONE FUROATE [Suspect]
     Active Substance: FLUTICASONE FUROATE
     Indication: Dyspnoea
     Dosage: UNK
     Route: 065
  1207. FLUTICASONE FUROATE [Suspect]
     Active Substance: FLUTICASONE FUROATE
     Indication: Blood phosphorus increased
     Dosage: UNK
     Route: 065
  1208. FLUTICASONE FUROATE [Suspect]
     Active Substance: FLUTICASONE FUROATE
     Indication: Off label use
     Dosage: UNK
     Route: 048
  1209. FLUTICASONE FUROATE [Suspect]
     Active Substance: FLUTICASONE FUROATE
     Indication: Intentional product misuse
  1210. BISACODYL [Suspect]
     Active Substance: BISACODYL
     Indication: Constipation
     Dosage: 10 MILLIGRAM
     Route: 065
  1211. BISACODYL [Suspect]
     Active Substance: BISACODYL
     Indication: Ventricular fibrillation
     Dosage: 10 MILLIGRAM
     Route: 065
  1212. BISACODYL [Suspect]
     Active Substance: BISACODYL
     Indication: Drug therapy
     Dosage: 10 MILLIGRAM
     Route: 065
  1213. BISACODYL [Suspect]
     Active Substance: BISACODYL
     Indication: Product used for unknown indication
     Dosage: 10 MILLIGRAM 1 EVERY 1 DAYS RECTAL
  1214. BISACODYL [Suspect]
     Active Substance: BISACODYL
     Indication: Off label use
     Dosage: 10MG, (DOSAGE FORM: NOT SPECIFIED)
     Route: 065
  1215. BISACODYL [Suspect]
     Active Substance: BISACODYL
     Indication: Dyspnoea
     Dosage: UNK
     Route: 042
  1216. BISACODYL [Suspect]
     Active Substance: BISACODYL
     Indication: Intentional product misuse
     Dosage: 10 MILLIGRAM 1 EVERY 1 DAYS RECTAL
     Route: 054
  1217. BISACODYL [Suspect]
     Active Substance: BISACODYL
     Dosage: 10 MILLIGRAM
     Route: 042
  1218. BISACODYL [Suspect]
     Active Substance: BISACODYL
     Dosage: 10 MILLIGRAM
     Route: 054
  1219. BISACODYL [Suspect]
     Active Substance: BISACODYL
     Dosage: 10 MILLIGRAM
     Route: 054
  1220. BISACODYL [Suspect]
     Active Substance: BISACODYL
     Dosage: 10 MILLIGRAM
     Route: 042
  1221. BISACODYL [Suspect]
     Active Substance: BISACODYL
     Dosage: 10 MILLIGRAM
     Route: 054
  1222. BISACODYL [Suspect]
     Active Substance: BISACODYL
     Dosage: UNK, DOSAGE FORM: NOT SPECIFIED
     Route: 065
  1223. BISACODYL [Suspect]
     Active Substance: BISACODYL
     Dosage: 10 MILLIGRAM, DOSAGE FORM: NOT SPECIFIED
     Route: 054
  1224. BISACODYL [Suspect]
     Active Substance: BISACODYL
     Dosage: 10 MILLIGRAM, DOSAGE FORM: NOT SPECIFIED
     Route: 065
  1225. BISACODYL [Suspect]
     Active Substance: BISACODYL
     Dosage: 10 MILLIGRAM
     Route: 054
  1226. BISACODYL [Suspect]
     Active Substance: BISACODYL
     Dosage: 10 MILLIGRAM
     Route: 042
  1227. BISACODYL [Suspect]
     Active Substance: BISACODYL
     Dosage: 10 MILLIGRAM
     Route: 054
  1228. BISACODYL [Suspect]
     Active Substance: BISACODYL
     Dosage: 10 MILLIGRAM
     Route: 054
  1229. BISACODYL [Suspect]
     Active Substance: BISACODYL
     Dosage: 10 MILLIGRAM
     Route: 054
  1230. BISACODYL [Suspect]
     Active Substance: BISACODYL
     Dosage: 10 MILLIGRAM
     Route: 054
  1231. BISACODYL [Suspect]
     Active Substance: BISACODYL
     Dosage: 10 MILLIGRAM
     Route: 065
  1232. BISACODYL [Suspect]
     Active Substance: BISACODYL
     Dosage: 10 MILLIGRAM, EVERY DAY, DOSAGE FORM: NOT SPECIFIED
     Route: 065
  1233. BISACODYL [Suspect]
     Active Substance: BISACODYL
     Dosage: 10 MG, QD (10 MILLIGRAM, QD), DOSAGE FORM: NOT SPECIFIED
     Route: 054
  1234. BISACODYL [Suspect]
     Active Substance: BISACODYL
     Dosage: 10 MILLIGRAM, AS NECESSARY (DOSAGE FORM: NOT SPECIFIED)
     Route: 054
  1235. BISACODYL [Suspect]
     Active Substance: BISACODYL
     Dosage: UNK
     Route: 065
  1236. BISACODYL [Suspect]
     Active Substance: BISACODYL
     Dosage: UNK
     Route: 065
  1237. BISACODYL [Suspect]
     Active Substance: BISACODYL
     Dosage: UNK
     Route: 065
  1238. BISACODYL [Suspect]
     Active Substance: BISACODYL
     Dosage: UNK
     Route: 054
  1239. DIETARY SUPPLEMENT [Suspect]
     Active Substance: DIETARY SUPPLEMENT
     Indication: Vitamin supplementation
     Dosage: 5 MILLIGRAM, AS NECESSARY, QD
     Route: 042
  1240. DIETARY SUPPLEMENT [Suspect]
     Active Substance: DIETARY SUPPLEMENT
     Dosage: 5 MILLIGRAM, QD
     Route: 042
  1241. DIETARY SUPPLEMENT [Suspect]
     Active Substance: DIETARY SUPPLEMENT
     Dosage: UNK
     Route: 065
  1242. DIETARY SUPPLEMENT [Suspect]
     Active Substance: DIETARY SUPPLEMENT
     Dosage: 5 MILLIGRAM
     Route: 042
  1243. DIETARY SUPPLEMENT [Suspect]
     Active Substance: DIETARY SUPPLEMENT
     Dosage: 5 MILLIGRAM
     Route: 065
  1244. DIETARY SUPPLEMENT [Suspect]
     Active Substance: DIETARY SUPPLEMENT
     Dosage: 5 MILLIGRAM, 1 DOSE PER 1 D
     Route: 042
  1245. DIETARY SUPPLEMENT [Suspect]
     Active Substance: DIETARY SUPPLEMENT
     Dosage: UNK
     Route: 042
  1246. IPRATROPIUM [Suspect]
     Active Substance: IPRATROPIUM
     Indication: Dyspnoea
     Dosage: UNK,  QD
     Route: 050
  1247. IPRATROPIUM [Suspect]
     Active Substance: IPRATROPIUM
     Indication: Product used for unknown indication
     Dosage: UNK,  QD
     Route: 065
  1248. IPRATROPIUM [Suspect]
     Active Substance: IPRATROPIUM
     Indication: Sleep disorder therapy
     Dosage: UNK UNK, QD
     Route: 050
  1249. IPRATROPIUM [Suspect]
     Active Substance: IPRATROPIUM
     Dosage: 1 DOSAGE FORM, 1 DOSE PER 4D
  1250. IPRATROPIUM [Suspect]
     Active Substance: IPRATROPIUM
     Dosage: 1 EVERY 1 DAYS
     Route: 045
  1251. IPRATROPIUM [Suspect]
     Active Substance: IPRATROPIUM
     Dosage: 1 EVERY 6 HOURS
     Route: 045
  1252. IPRATROPIUM [Suspect]
     Active Substance: IPRATROPIUM
     Dosage: 4 EVERY 1 DAYS
     Route: 045
  1253. IPRATROPIUM [Suspect]
     Active Substance: IPRATROPIUM
     Dosage: UNK
     Route: 065
  1254. IPRATROPIUM [Suspect]
     Active Substance: IPRATROPIUM
     Dosage: 1 DOSAGE FORM, QD
  1255. IPRATROPIUM [Suspect]
     Active Substance: IPRATROPIUM
     Dosage: 1 DOSAGE FORM
     Route: 065
  1256. IPRATROPIUM [Suspect]
     Active Substance: IPRATROPIUM
     Dosage: 1 EVERY 1 DAYS; (DOSAGE FORM: NOT SPECIFIED)
     Route: 065
  1257. IPRATROPIUM [Suspect]
     Active Substance: IPRATROPIUM
     Dosage: UNK
     Route: 050
  1258. IPRATROPIUM [Suspect]
     Active Substance: IPRATROPIUM
     Dosage: 1 DOSAGE FORM, 1 DOSE PER 6HRS
     Route: 050
  1259. IPRATROPIUM [Suspect]
     Active Substance: IPRATROPIUM
     Dosage: 1 DOSAGE FORM, QD
  1260. IPRATROPIUM [Suspect]
     Active Substance: IPRATROPIUM
     Dosage: 1 DOSAGE FORM, 1 DOSE PER 6HRS
     Route: 065
  1261. IPRATROPIUM [Suspect]
     Active Substance: IPRATROPIUM
     Dosage: 1 DOSAGE FORM, 1 DOSE PER 1 D
     Route: 065
  1262. IPRATROPIUM [Suspect]
     Active Substance: IPRATROPIUM
     Dosage: 1 EVERY 1 DAYS
  1263. IPRATROPIUM [Suspect]
     Active Substance: IPRATROPIUM
     Dosage: UNK
  1264. IPRATROPIUM [Suspect]
     Active Substance: IPRATROPIUM
     Dosage: UNK
  1265. IPRATROPIUM [Suspect]
     Active Substance: IPRATROPIUM
     Dosage: UNK
     Route: 065
  1266. IPRATROPIUM [Suspect]
     Active Substance: IPRATROPIUM
     Dosage: UNK, 1 DOSE PER 1 D
     Route: 065
  1267. IPRATROPIUM [Suspect]
     Active Substance: IPRATROPIUM
     Dosage: 4 IU, 1 DOSE PER 1D
     Route: 065
  1268. IPRATROPIUM [Suspect]
     Active Substance: IPRATROPIUM
     Dosage: UNK
     Route: 050
  1269. IPRATROPIUM [Suspect]
     Active Substance: IPRATROPIUM
     Dosage: UNK ENDOSINUSIAL
  1270. IPRATROPIUM [Suspect]
     Active Substance: IPRATROPIUM
     Dosage: UNK, 1 DOSE PER 1 D
  1271. IPRATROPIUM [Suspect]
     Active Substance: IPRATROPIUM
     Dosage: UNK
  1272. IPRATROPIUM [Suspect]
     Active Substance: IPRATROPIUM
     Dosage: 4 DOSAGE FORM, 1 DOSE PER 1 D
  1273. IPRATROPIUM [Suspect]
     Active Substance: IPRATROPIUM
     Dosage: 3 DOSAGE FORM, QD
  1274. IPRATROPIUM [Suspect]
     Active Substance: IPRATROPIUM
     Dosage: UNK, 4 DOSE PER 1 D
     Route: 065
  1275. IPRATROPIUM [Suspect]
     Active Substance: IPRATROPIUM
     Dosage: UNK, 3 DOSE PER 1 D
     Route: 065
  1276. IPRATROPIUM [Suspect]
     Active Substance: IPRATROPIUM
     Dosage: 4 DOSAGE FORM, 1 DOSE PER 1 D
  1277. DEXTROSE\SODIUM CHLORIDE [Suspect]
     Active Substance: DEXTROSE\SODIUM CHLORIDE
     Indication: Product used for unknown indication
     Dosage: 12.5 MILLIGRAM
     Route: 042
  1278. DEXTROSE\SODIUM CHLORIDE [Suspect]
     Active Substance: DEXTROSE\SODIUM CHLORIDE
     Indication: Intentional product misuse
     Dosage: 12.5 MILLIGRAM
     Route: 042
  1279. DEXTROSE\SODIUM CHLORIDE [Suspect]
     Active Substance: DEXTROSE\SODIUM CHLORIDE
     Indication: Off label use
     Dosage: 12.5 MILLIGRAM
     Route: 042
  1280. DEXTROSE\SODIUM CHLORIDE [Suspect]
     Active Substance: DEXTROSE\SODIUM CHLORIDE
     Dosage: 12.5 G, QD
     Route: 042
  1281. ALBUTEROL [Suspect]
     Active Substance: ALBUTEROL
     Indication: Chronic obstructive pulmonary disease
     Dosage: 1 DOSAGE FORM, QID
     Route: 055
  1282. ALBUTEROL [Suspect]
     Active Substance: ALBUTEROL
     Dosage: 1 DOSAGE FORM, QID
     Route: 055
  1283. ALBUTEROL [Suspect]
     Active Substance: ALBUTEROL
     Dosage: UNK, (PER 6 HOURS)
     Route: 065
  1284. ALBUTEROL [Suspect]
     Active Substance: ALBUTEROL
     Dosage: 1 DOSAGE FORM
     Route: 065
  1285. ALBUTEROL [Suspect]
     Active Substance: ALBUTEROL
     Dosage: UNK, QD
  1286. ALBUTEROL [Suspect]
     Active Substance: ALBUTEROL
     Dosage: 4 DOSAGE FORM, 1 DOSE PER 1 D
  1287. ALBUTEROL [Suspect]
     Active Substance: ALBUTEROL
     Dosage: UNK
     Route: 065
  1288. ALBUTEROL [Suspect]
     Active Substance: ALBUTEROL
     Dosage: 4 DOSAGE FORM, 1 DOSE PER 1 D
     Route: 065
  1289. ALBUTEROL [Suspect]
     Active Substance: ALBUTEROL
     Dosage: 4 DOSAGE FORM, 1 DOSE PER 6HRS
     Route: 065
  1290. ALBUTEROL [Suspect]
     Active Substance: ALBUTEROL
     Dosage: 4 DOSAGE FORM
  1291. ALBUTEROL [Suspect]
     Active Substance: ALBUTEROL
     Dosage: 1 DOSAGE FORM 1 EVERY 6 HOURS INHALATION
  1292. ALBUTEROL [Suspect]
     Active Substance: ALBUTEROL
     Dosage: UNK; DOSAGE FORM: NOT SPECIFIED
  1293. ALBUTEROL [Suspect]
     Active Substance: ALBUTEROL
     Dosage: UNK, Q6H; DOSAGE FORM: NOT SPECIFIED
     Route: 065
  1294. ALBUTEROL [Suspect]
     Active Substance: ALBUTEROL
     Dosage: 1 DOSAGE FORM INHALATION
  1295. ALBUTEROL [Suspect]
     Active Substance: ALBUTEROL
     Dosage: UNK; DOSAGE FORM: NOT SPECIFIED
  1296. ALBUTEROL [Suspect]
     Active Substance: ALBUTEROL
     Dosage: 1 DOSAGE FORM, 1 DOSE PER 1HR
     Route: 065
  1297. ALBUTEROL [Suspect]
     Active Substance: ALBUTEROL
     Dosage: UNK, Q6H; DOSAGE FORM: NOT SPECIFIED
     Route: 065
  1298. ALBUTEROL [Suspect]
     Active Substance: ALBUTEROL
     Dosage: UNK, QD; DOSAGE FORM: NOT SPECIFIED
     Route: 065
  1299. ALBUTEROL [Suspect]
     Active Substance: ALBUTEROL
     Dosage: 4 DOSAGE FORM, QD; DOSAGE FORM: NOT SPECIFIED
  1300. ALBUTEROL [Suspect]
     Active Substance: ALBUTEROL
     Dosage: 4 DOSAGE FORM, QD; DOSAGE FORM: NOT SPECIFIED
  1301. ALBUTEROL [Suspect]
     Active Substance: ALBUTEROL
     Dosage: 4 DOSAGE FORM, QD; DOSAGE FORM: NOT SPECIFIED
  1302. ALBUTEROL [Suspect]
     Active Substance: ALBUTEROL
     Dosage: 1 DOSAGE FORM, 4 EVERY 1 DAYS (INTRA NASAL)
     Route: 065
  1303. ALBUTEROL [Suspect]
     Active Substance: ALBUTEROL
     Dosage: UNK, QD
     Route: 050
  1304. ALBUTEROL [Suspect]
     Active Substance: ALBUTEROL
     Dosage: 4 DOSAGE FORM, QD; DOSAGE FORM: NOT SPECIFIED
     Route: 065
  1305. ALBUTEROL [Suspect]
     Active Substance: ALBUTEROL
     Dosage: 1 EVERY 0.3 DAYS INHALATION
  1306. ALBUTEROL [Suspect]
     Active Substance: ALBUTEROL
     Dosage: UNK
     Route: 065
  1307. ALBUTEROL [Suspect]
     Active Substance: ALBUTEROL
     Dosage: UNK UNK, 4 DOSE PER 1 D
     Route: 065
  1308. ALBUTEROL [Suspect]
     Active Substance: ALBUTEROL
     Dosage: 12.5 GRAM
  1309. ALBUTEROL [Suspect]
     Active Substance: ALBUTEROL
     Dosage: UNK UNK, 1 DOSE PER 6HRS
  1310. ALBUTEROL [Suspect]
     Active Substance: ALBUTEROL
     Dosage: UNK UNK, 1 DOSE PER 1 D
     Route: 050
  1311. ALBUTEROL [Suspect]
     Active Substance: ALBUTEROL
     Dosage: UNK UNK, 1 DOSE PER 1 D
  1312. ALBUTEROL [Suspect]
     Active Substance: ALBUTEROL
     Dosage: UNK
     Route: 050
  1313. ALBUTEROL [Suspect]
     Active Substance: ALBUTEROL
     Dosage: 1 DOSAGE FORM 1 EVERY 6 HOURS INHALATION
     Route: 065
  1314. ALBUTEROL [Suspect]
     Active Substance: ALBUTEROL
     Dosage: UNK
  1315. HERBALS\PAULLINIA CUPANA SEED [Suspect]
     Active Substance: HERBALS\PAULLINIA CUPANA SEED
     Indication: Nutritional supplementation
     Dosage: 12.5 MILLIGRAM UNKNOWN
     Route: 065
  1316. HERBALS\PAULLINIA CUPANA SEED [Suspect]
     Active Substance: HERBALS\PAULLINIA CUPANA SEED
     Indication: Vitamin supplementation
     Dosage: UNK
     Route: 042
  1317. HERBALS\PAULLINIA CUPANA SEED [Suspect]
     Active Substance: HERBALS\PAULLINIA CUPANA SEED
     Dosage: 17 MILLIGRAM UNKNOWN
     Route: 048
  1318. HERBALS\PAULLINIA CUPANA SEED [Suspect]
     Active Substance: HERBALS\PAULLINIA CUPANA SEED
     Dosage: 12.5 MILLIGRAM
     Route: 042
  1319. HERBALS\PAULLINIA CUPANA SEED [Suspect]
     Active Substance: HERBALS\PAULLINIA CUPANA SEED
     Dosage: 5 MILLIGRAM
     Route: 042
  1320. HERBALS\PAULLINIA CUPANA SEED [Suspect]
     Active Substance: HERBALS\PAULLINIA CUPANA SEED
     Dosage: UNK
     Route: 065
  1321. HERBALS\PAULLINIA CUPANA SEED [Suspect]
     Active Substance: HERBALS\PAULLINIA CUPANA SEED
     Dosage: UNK
  1322. HERBALS\PAULLINIA CUPANA SEED [Suspect]
     Active Substance: HERBALS\PAULLINIA CUPANA SEED
     Dosage: 17 MILLIGRAM UNKNOWN
     Route: 042
  1323. HERBALS\PAULLINIA CUPANA SEED [Suspect]
     Active Substance: HERBALS\PAULLINIA CUPANA SEED
     Dosage: 17 MILLIGRAM UNKNOWN
     Route: 065
  1324. HERBALS\PAULLINIA CUPANA SEED [Suspect]
     Active Substance: HERBALS\PAULLINIA CUPANA SEED
     Dosage: UNK
  1325. ACETAMINOPHEN [Suspect]
     Active Substance: ACETAMINOPHEN
     Indication: Analgesic therapy
     Dosage: 650 MILLIGRAM, 1 EVERY 1 DAYS
  1326. ACETAMINOPHEN [Suspect]
     Active Substance: ACETAMINOPHEN
     Indication: Product used for unknown indication
     Dosage: 650 MILLIGRAM, 1 EVERY 1 DAYS
     Route: 065
  1327. ACETAMINOPHEN [Suspect]
     Active Substance: ACETAMINOPHEN
     Indication: Off label use
     Dosage: 650 MILLIGRAM, 1 EVERY 1 DAYS (DOSAGE FORM: NOT SPECIFIED)
     Route: 048
  1328. ACETAMINOPHEN [Suspect]
     Active Substance: ACETAMINOPHEN
     Indication: Intentional product misuse
     Dosage: 5 MILLIGRAM, 1 DOSE PER 1 D
     Route: 042
  1329. ACETAMINOPHEN [Suspect]
     Active Substance: ACETAMINOPHEN
     Indication: Analgesic therapy
     Dosage: 650 MILLIGRAM
     Route: 048
  1330. ACETAMINOPHEN [Suspect]
     Active Substance: ACETAMINOPHEN
     Dosage: 650 MILLIGRAM
     Route: 048
  1331. ACETAMINOPHEN [Suspect]
     Active Substance: ACETAMINOPHEN
     Dosage: 650 MILLIGRAM
     Route: 048
  1332. ACETAMINOPHEN [Suspect]
     Active Substance: ACETAMINOPHEN
     Dosage: 650 MILLIGRAM
     Route: 048
  1333. ACETAMINOPHEN [Suspect]
     Active Substance: ACETAMINOPHEN
     Dosage: 650 MILLIGRAM
     Route: 048
  1334. ACETAMINOPHEN [Suspect]
     Active Substance: ACETAMINOPHEN
     Dosage: UNK (DOSAGE FORM: NOT SPECIFIED)
     Route: 048
  1335. ACETAMINOPHEN [Suspect]
     Active Substance: ACETAMINOPHEN
     Dosage: UNK
     Route: 048
  1336. ACETAMINOPHEN [Suspect]
     Active Substance: ACETAMINOPHEN
     Dosage: 650 MILLIGRAM, 1 EVERY 1 DAYS (DOSAGE FORM: NOT SPECIFIED)
     Route: 065
  1337. ACETAMINOPHEN [Suspect]
     Active Substance: ACETAMINOPHEN
     Dosage: 650 MILLIGRAM, 1 EVERY 1 DAYS (DOSAGE FORM: NOT SPECIFIED)
     Route: 065
  1338. ACETAMINOPHEN [Suspect]
     Active Substance: ACETAMINOPHEN
     Dosage: 5 MILLIGRAM, 1 EVERY 1 DAYS (DOSAGE FORM: NOT SPECIFIED)
     Route: 042
  1339. ACETAMINOPHEN [Suspect]
     Active Substance: ACETAMINOPHEN
     Dosage: 650 MILLIGRAM, 1 EVERY 1 DAYS (DOSAGE FORM: NOT SPECIFIED)
     Route: 048
  1340. ACETAMINOPHEN [Suspect]
     Active Substance: ACETAMINOPHEN
     Dosage: 650 MILLIGRAM, 1 EVERY 1 DAYS
  1341. ACETAMINOPHEN [Suspect]
     Active Substance: ACETAMINOPHEN
     Dosage: UNK, QD(1 EVERY 1 DAYS)
     Route: 048
  1342. ACETAMINOPHEN [Suspect]
     Active Substance: ACETAMINOPHEN
     Dosage: UNK, 1 DOSE PER 1D
     Route: 065
  1343. ACETAMINOPHEN [Suspect]
     Active Substance: ACETAMINOPHEN
     Dosage: UNK
     Route: 048
  1344. TRELEGY ELLIPTA [Suspect]
     Active Substance: FLUTICASONE FUROATE\UMECLIDINIUM BROMIDE\VILANTEROL TRIFENATATE
     Indication: Product used for unknown indication
     Dosage: UNK
     Route: 055
  1345. TRELEGY ELLIPTA [Suspect]
     Active Substance: FLUTICASONE FUROATE\UMECLIDINIUM BROMIDE\VILANTEROL TRIFENATATE
     Indication: Off label use
     Dosage: UNK
     Route: 065
  1346. TRELEGY ELLIPTA [Suspect]
     Active Substance: FLUTICASONE FUROATE\UMECLIDINIUM BROMIDE\VILANTEROL TRIFENATATE
     Indication: Intentional product misuse
     Dosage: UNK (DOSAGE FORM: INHALATION POWDER)
  1347. TRELEGY ELLIPTA [Suspect]
     Active Substance: FLUTICASONE FUROATE\UMECLIDINIUM BROMIDE\VILANTEROL TRIFENATATE
     Indication: Vitamin supplementation
     Dosage: UNK
     Route: 065
  1348. TRELEGY ELLIPTA [Suspect]
     Active Substance: FLUTICASONE FUROATE\UMECLIDINIUM BROMIDE\VILANTEROL TRIFENATATE
     Dosage: UNK UNK, QD
     Route: 065
  1349. DISTIGMINE BROMIDE [Suspect]
     Active Substance: DISTIGMINE BROMIDE
     Indication: Dyspnoea
     Dosage: 1 INTERNATIONAL UNIT, QD
     Route: 048
  1350. DISTIGMINE BROMIDE [Suspect]
     Active Substance: DISTIGMINE BROMIDE
     Dosage: UNK
     Route: 065
  1351. POLYETHYLENE GLYCOLS [Suspect]
     Active Substance: POLYETHYLENE GLYCOLS
     Indication: Constipation
     Dosage: UNK
     Route: 048
  1352. POLYETHYLENE GLYCOLS [Suspect]
     Active Substance: POLYETHYLENE GLYCOLS
     Indication: Product used for unknown indication
     Dosage: 17 MILLIGRAM, , 1 EVERY 1 DAYS  (POWDER FOR ORAL SOULUTION)
     Route: 048
  1353. POLYETHYLENE GLYCOLS [Suspect]
     Active Substance: POLYETHYLENE GLYCOLS
     Indication: Off label use
     Dosage: 17 MILLIGRAM, 1 EVERY 1 DAYS (POWDER FOR ORAL SOULUTION)
     Route: 048
  1354. POLYETHYLENE GLYCOLS [Suspect]
     Active Substance: POLYETHYLENE GLYCOLS
     Dosage: 17 GRAM, QD
     Route: 048
  1355. POLYETHYLENE GLYCOLS [Suspect]
     Active Substance: POLYETHYLENE GLYCOLS
     Dosage: 17 MILLIGRAM
     Route: 048
  1356. POLYETHYLENE GLYCOLS [Suspect]
     Active Substance: POLYETHYLENE GLYCOLS
     Dosage: 17 MILLIGRAM
     Route: 048
  1357. POLYETHYLENE GLYCOLS [Suspect]
     Active Substance: POLYETHYLENE GLYCOLS
     Dosage: 17 MILLIGRAM, 1X/DAY
     Route: 048
  1358. POLYETHYLENE GLYCOLS [Suspect]
     Active Substance: POLYETHYLENE GLYCOLS
     Dosage: 3 MILLIGRAM, 1/WEEK
     Route: 065
  1359. POLYETHYLENE GLYCOLS [Suspect]
     Active Substance: POLYETHYLENE GLYCOLS
     Dosage: 2.5 ML
     Route: 065
  1360. POLYETHYLENE GLYCOLS [Suspect]
     Active Substance: POLYETHYLENE GLYCOLS
     Dosage: 2.5 ML, (DOSAGE FORM: POWDER FOR SOLUTION)
     Route: 042
  1361. POLYETHYLENE GLYCOLS [Suspect]
     Active Substance: POLYETHYLENE GLYCOLS
     Dosage: UNK, 1 EVERY 1 DAY
     Route: 048
  1362. POLYETHYLENE GLYCOLS [Suspect]
     Active Substance: POLYETHYLENE GLYCOLS
     Dosage: UNK, 1 EVERY 1 DAY
     Route: 048
  1363. POLYETHYLENE GLYCOLS [Suspect]
     Active Substance: POLYETHYLENE GLYCOLS
     Dosage: UNK, 1 EVERY 1 DAY
     Route: 048
  1364. POLYETHYLENE GLYCOLS [Suspect]
     Active Substance: POLYETHYLENE GLYCOLS
     Dosage: 17 MILLIGRAM, , 1 EVERY 1 DAYS  (POWDER FOR ORAL SOULUTION)
     Route: 048
  1365. POLYETHYLENE GLYCOLS [Suspect]
     Active Substance: POLYETHYLENE GLYCOLS
     Dosage: 1 DOSAGE FORM, Q6H
  1366. POLYETHYLENE GLYCOLS [Suspect]
     Active Substance: POLYETHYLENE GLYCOLS
     Dosage: 3 MILLIGRAM, 1/WEEK
     Route: 048
  1367. POLYETHYLENE GLYCOLS [Suspect]
     Active Substance: POLYETHYLENE GLYCOLS
     Dosage: UNK
     Route: 065
  1368. DIETARY SUPPLEMENT [Suspect]
     Active Substance: DIETARY SUPPLEMENT
     Indication: Vitamin supplementation
     Dosage: 5 MILLIGRAM, UNKNOWN
     Route: 042
  1369. DIETARY SUPPLEMENT [Suspect]
     Active Substance: DIETARY SUPPLEMENT
     Indication: Off label use
     Dosage: UNK
     Route: 042
  1370. DIETARY SUPPLEMENT [Suspect]
     Active Substance: DIETARY SUPPLEMENT
     Indication: Vitamin D
     Dosage: UNK
     Route: 065
  1371. DIETARY SUPPLEMENT [Suspect]
     Active Substance: DIETARY SUPPLEMENT
     Indication: Intentional product misuse
     Dosage: 5 MG, PRN
     Route: 017
  1372. DIETARY SUPPLEMENT [Suspect]
     Active Substance: DIETARY SUPPLEMENT
     Dosage: 5 MILLIGRAM, QD; DOSAGE FORM: NOT SPECIFIED
     Route: 042
  1373. DIETARY SUPPLEMENT [Suspect]
     Active Substance: DIETARY SUPPLEMENT
     Dosage: UNK
     Route: 065
  1374. DIETARY SUPPLEMENT [Suspect]
     Active Substance: DIETARY SUPPLEMENT
     Dosage: 5 MILLIGRAM
     Route: 042
  1375. DIETARY SUPPLEMENT [Suspect]
     Active Substance: DIETARY SUPPLEMENT
     Dosage: 17 GRAM
     Route: 042
  1376. DIETARY SUPPLEMENT [Suspect]
     Active Substance: DIETARY SUPPLEMENT
     Dosage: UNK
     Route: 065
  1377. DIETARY SUPPLEMENT [Suspect]
     Active Substance: DIETARY SUPPLEMENT
     Dosage: 17 GRAM
     Route: 048
  1378. DIETARY SUPPLEMENT [Suspect]
     Active Substance: DIETARY SUPPLEMENT
     Dosage: 5 MILLIGRAM
     Route: 065
  1379. DIETARY SUPPLEMENT [Suspect]
     Active Substance: DIETARY SUPPLEMENT
     Dosage: 5 MILLIGRAM, QD; DOSAGE FORM: NOT SPECIFIED
     Route: 017
  1380. DIETARY SUPPLEMENT [Suspect]
     Active Substance: DIETARY SUPPLEMENT
     Dosage: 17 MILLIGRAM, QD; DOSAGE FORM: NOT SPECIFIED
     Route: 042
  1381. IPRATROPIUM BROMIDE\XYLOMETAZOLINE HYDROCHLORIDE [Suspect]
     Active Substance: IPRATROPIUM BROMIDE\XYLOMETAZOLINE HYDROCHLORIDE
     Indication: Dyspnoea
     Dosage: UNK
  1382. IPRATROPIUM BROMIDE\XYLOMETAZOLINE HYDROCHLORIDE [Suspect]
     Active Substance: IPRATROPIUM BROMIDE\XYLOMETAZOLINE HYDROCHLORIDE
     Dosage: UNK
     Route: 065
  1383. IPRATROPIUM BROMIDE\XYLOMETAZOLINE HYDROCHLORIDE [Suspect]
     Active Substance: IPRATROPIUM BROMIDE\XYLOMETAZOLINE HYDROCHLORIDE
     Dosage: UNK
     Route: 055
  1384. IPRATROPIUM BROMIDE\XYLOMETAZOLINE HYDROCHLORIDE [Suspect]
     Active Substance: IPRATROPIUM BROMIDE\XYLOMETAZOLINE HYDROCHLORIDE
     Dosage: 1 DF, QD
     Route: 065
  1385. IPRATROPIUM BROMIDE\XYLOMETAZOLINE HYDROCHLORIDE [Suspect]
     Active Substance: IPRATROPIUM BROMIDE\XYLOMETAZOLINE HYDROCHLORIDE
     Dosage: UNK
     Route: 050
  1386. IPRATROPIUM BROMIDE\XYLOMETAZOLINE HYDROCHLORIDE [Suspect]
     Active Substance: IPRATROPIUM BROMIDE\XYLOMETAZOLINE HYDROCHLORIDE
     Dosage: 1 DOSAGE FORM
     Route: 050
  1387. IPRATROPIUM BROMIDE\XYLOMETAZOLINE HYDROCHLORIDE [Suspect]
     Active Substance: IPRATROPIUM BROMIDE\XYLOMETAZOLINE HYDROCHLORIDE
     Dosage: 1 DOSAGE FORM
     Route: 065
  1388. IPRATROPIUM BROMIDE\XYLOMETAZOLINE HYDROCHLORIDE [Suspect]
     Active Substance: IPRATROPIUM BROMIDE\XYLOMETAZOLINE HYDROCHLORIDE
     Dosage: 1 DOSAGE FORM
     Route: 065
  1389. IPRATROPIUM BROMIDE\XYLOMETAZOLINE HYDROCHLORIDE [Suspect]
     Active Substance: IPRATROPIUM BROMIDE\XYLOMETAZOLINE HYDROCHLORIDE
     Dosage: 1 DOSAGE FORM
     Route: 065
  1390. IPRATROPIUM BROMIDE\XYLOMETAZOLINE HYDROCHLORIDE [Suspect]
     Active Substance: IPRATROPIUM BROMIDE\XYLOMETAZOLINE HYDROCHLORIDE
     Dosage: UNK
     Route: 065
  1391. IPRATROPIUM BROMIDE\XYLOMETAZOLINE HYDROCHLORIDE [Suspect]
     Active Substance: IPRATROPIUM BROMIDE\XYLOMETAZOLINE HYDROCHLORIDE
     Dosage: UNK
     Route: 065
  1392. IPRATROPIUM BROMIDE\XYLOMETAZOLINE HYDROCHLORIDE [Suspect]
     Active Substance: IPRATROPIUM BROMIDE\XYLOMETAZOLINE HYDROCHLORIDE
     Dosage: UNK
     Route: 050
  1393. IPRATROPIUM BROMIDE\XYLOMETAZOLINE HYDROCHLORIDE [Suspect]
     Active Substance: IPRATROPIUM BROMIDE\XYLOMETAZOLINE HYDROCHLORIDE
     Dosage: UNK
     Route: 065
  1394. IPRATROPIUM BROMIDE\XYLOMETAZOLINE HYDROCHLORIDE [Suspect]
     Active Substance: IPRATROPIUM BROMIDE\XYLOMETAZOLINE HYDROCHLORIDE
     Dosage: UNK, 1 EVERY 1DAYS(QD)
     Route: 065
  1395. SODIUM FERRIC GLUCONATE COMPLEX [Suspect]
     Active Substance: SODIUM FERRIC GLUCONATE COMPLEX
     Indication: Iron deficiency
     Dosage: 125 MILLIGRAM, 1 DOSE PER 1W
     Route: 042
  1396. SODIUM FERRIC GLUCONATE COMPLEX [Suspect]
     Active Substance: SODIUM FERRIC GLUCONATE COMPLEX
     Dosage: 4.64 MILLIGRAM
     Route: 065
  1397. SODIUM FERRIC GLUCONATE COMPLEX [Suspect]
     Active Substance: SODIUM FERRIC GLUCONATE COMPLEX
     Dosage: 17.85 MILLIGRAM
  1398. SODIUM FERRIC GLUCONATE COMPLEX [Suspect]
     Active Substance: SODIUM FERRIC GLUCONATE COMPLEX
     Dosage: 1.25 MILLIGRAM, 1 DOSE PER 1M
     Route: 042
  1399. SODIUM FERRIC GLUCONATE COMPLEX [Suspect]
     Active Substance: SODIUM FERRIC GLUCONATE COMPLEX
     Dosage: 125 MILLIGRAM, 1 DOSE PER 1D
     Route: 042
  1400. SODIUM FERRIC GLUCONATE COMPLEX [Suspect]
     Active Substance: SODIUM FERRIC GLUCONATE COMPLEX
     Dosage: 125 MILLIGRAM,
     Route: 042
  1401. SODIUM FERRIC GLUCONATE COMPLEX [Suspect]
     Active Substance: SODIUM FERRIC GLUCONATE COMPLEX
     Dosage: 124 MILLIGRAM
     Route: 042
  1402. SODIUM FERRIC GLUCONATE COMPLEX [Suspect]
     Active Substance: SODIUM FERRIC GLUCONATE COMPLEX
     Dosage: 17.85 MILLIGRAM
     Route: 042
  1403. SODIUM FERRIC GLUCONATE COMPLEX [Suspect]
     Active Substance: SODIUM FERRIC GLUCONATE COMPLEX
     Dosage: 125 MILLIGRAM, PER 4 WEEKS
     Route: 042
  1404. SODIUM FERRIC GLUCONATE COMPLEX [Suspect]
     Active Substance: SODIUM FERRIC GLUCONATE COMPLEX
     Dosage: 125 MILLIGRAM 1 EVERY 1 MONTHS INTRAVENOUS
     Route: 042
  1405. SODIUM FERRIC GLUCONATE COMPLEX [Suspect]
     Active Substance: SODIUM FERRIC GLUCONATE COMPLEX
     Dosage: 4.64 MILLIGRAM, 1 DOSE PER 4W
     Route: 042
  1406. SODIUM FERRIC GLUCONATE COMPLEX [Suspect]
     Active Substance: SODIUM FERRIC GLUCONATE COMPLEX
     Dosage: 4.64 MILLIGRAM, 1 DOSE PER 1M
     Route: 042
  1407. SODIUM FERRIC GLUCONATE COMPLEX [Suspect]
     Active Substance: SODIUM FERRIC GLUCONATE COMPLEX
     Dosage: 125 MILLIGRAM
     Route: 042
  1408. SODIUM FERRIC GLUCONATE COMPLEX [Suspect]
     Active Substance: SODIUM FERRIC GLUCONATE COMPLEX
     Dosage: UNK UNK, 1 DOSE PER 1W
     Route: 042
  1409. SODIUM FERRIC GLUCONATE COMPLEX [Suspect]
     Active Substance: SODIUM FERRIC GLUCONATE COMPLEX
     Dosage: 17.85 MILLIGRAM
     Route: 042
  1410. SODIUM FERRIC GLUCONATE COMPLEX [Suspect]
     Active Substance: SODIUM FERRIC GLUCONATE COMPLEX
     Dosage: 133 MILLILITER
     Route: 042
  1411. SODIUM FERRIC GLUCONATE COMPLEX [Suspect]
     Active Substance: SODIUM FERRIC GLUCONATE COMPLEX
     Dosage: 4.64 MILLIGRAM, 1 DOSE PER 1W
  1412. SODIUM FERRIC GLUCONATE COMPLEX [Suspect]
     Active Substance: SODIUM FERRIC GLUCONATE COMPLEX
     Dosage: 1.25 MILLIGRAM, 1 DOSE PER 1W
     Route: 042
  1413. SODIUM FERRIC GLUCONATE COMPLEX [Suspect]
     Active Substance: SODIUM FERRIC GLUCONATE COMPLEX
     Dosage: 4.64 MILLIGRAM, 4 EVERY 1 WEEKS
     Route: 042
  1414. SODIUM FERRIC GLUCONATE COMPLEX [Suspect]
     Active Substance: SODIUM FERRIC GLUCONATE COMPLEX
     Dosage: 4.64 MILLIGRAM, 4 EVERY 1 WEEKS
     Route: 042
  1415. SODIUM FERRIC GLUCONATE COMPLEX [Suspect]
     Active Substance: SODIUM FERRIC GLUCONATE COMPLEX
     Dosage: 4.64 MG, Q4W
     Route: 058
  1416. SODIUM FERRIC GLUCONATE COMPLEX [Suspect]
     Active Substance: SODIUM FERRIC GLUCONATE COMPLEX
     Dosage: 4.64 MG, Q4W
     Route: 054
  1417. SODIUM FERRIC GLUCONATE COMPLEX [Suspect]
     Active Substance: SODIUM FERRIC GLUCONATE COMPLEX
     Dosage: UNK UNK, 1 DOSE PER 1W
  1418. SODIUM FERRIC GLUCONATE COMPLEX [Suspect]
     Active Substance: SODIUM FERRIC GLUCONATE COMPLEX
     Dosage: 4.64 MILLIGRAM, 4 DOSE PER 1W
  1419. SODIUM FERRIC GLUCONATE COMPLEX [Suspect]
     Active Substance: SODIUM FERRIC GLUCONATE COMPLEX
     Dosage: 500 MILLIGRAM, 1 DOSE PER 1W
     Route: 042
  1420. SODIUM FERRIC GLUCONATE COMPLEX [Suspect]
     Active Substance: SODIUM FERRIC GLUCONATE COMPLEX
     Dosage: UNK
     Route: 065
  1421. SODIUM FERRIC GLUCONATE COMPLEX [Suspect]
     Active Substance: SODIUM FERRIC GLUCONATE COMPLEX
     Dosage: 125 MILLIGRAM, 4 DOSE PER 1W
     Route: 042
  1422. SODIUM FERRIC GLUCONATE COMPLEX [Suspect]
     Active Substance: SODIUM FERRIC GLUCONATE COMPLEX
     Dosage: UNK
     Route: 042
  1423. SODIUM FERRIC GLUCONATE COMPLEX [Suspect]
     Active Substance: SODIUM FERRIC GLUCONATE COMPLEX
     Dosage: 18.56 MILLIGRAM, 1 DOSE PER 1W
     Route: 042
  1424. SODIUM FERRIC GLUCONATE COMPLEX [Suspect]
     Active Substance: SODIUM FERRIC GLUCONATE COMPLEX
     Dosage: 4.64 MILLIGRAM
     Route: 042
  1425. METAMIZOLE SODIUM [Suspect]
     Active Substance: METAMIZOLE SODIUM
     Indication: Vitamin supplementation
     Dosage: UNK
     Route: 042
  1426. METAMIZOLE SODIUM [Suspect]
     Active Substance: METAMIZOLE SODIUM
     Indication: Intentional product misuse
     Dosage: UNK
     Route: 065
  1427. METAMIZOLE SODIUM [Suspect]
     Active Substance: METAMIZOLE SODIUM
     Indication: Off label use
     Dosage: 5 MILLIGRAM
     Route: 065
  1428. METAMIZOLE SODIUM [Suspect]
     Active Substance: METAMIZOLE SODIUM
     Dosage: 5 MILLIGRAM
     Route: 065
  1429. METAMIZOLE SODIUM [Suspect]
     Active Substance: METAMIZOLE SODIUM
     Dosage: 5 MILLIGRAM, QD
     Route: 065
  1430. METAMIZOLE SODIUM [Suspect]
     Active Substance: METAMIZOLE SODIUM
     Dosage: UNK
     Route: 065
  1431. OSELTAMIVIR PHOSPHATE [Suspect]
     Active Substance: OSELTAMIVIR PHOSPHATE
     Indication: Product used for unknown indication
     Dosage: UNK
     Route: 065
  1432. OSELTAMIVIR PHOSPHATE [Suspect]
     Active Substance: OSELTAMIVIR PHOSPHATE
     Indication: Chronic obstructive pulmonary disease
     Dosage: 133 MILLILITER
     Route: 054
  1433. OSELTAMIVIR PHOSPHATE [Suspect]
     Active Substance: OSELTAMIVIR PHOSPHATE
     Dosage: UNK
     Route: 054
  1434. OSELTAMIVIR PHOSPHATE [Suspect]
     Active Substance: OSELTAMIVIR PHOSPHATE
     Dosage: 12.5 MILLIGRAM
  1435. OSELTAMIVIR PHOSPHATE [Suspect]
     Active Substance: OSELTAMIVIR PHOSPHATE
     Dosage: UNK
     Route: 065
  1436. OSELTAMIVIR PHOSPHATE [Suspect]
     Active Substance: OSELTAMIVIR PHOSPHATE
     Dosage: UNK
     Route: 065
  1437. OSELTAMIVIR PHOSPHATE [Suspect]
     Active Substance: OSELTAMIVIR PHOSPHATE
     Dosage: UNK
     Route: 065
  1438. OSELTAMIVIR PHOSPHATE [Suspect]
     Active Substance: OSELTAMIVIR PHOSPHATE
     Dosage: UNK
  1439. OSELTAMIVIR PHOSPHATE [Suspect]
     Active Substance: OSELTAMIVIR PHOSPHATE
     Dosage: 12.5 GRAM UNK
     Route: 065
  1440. OSELTAMIVIR PHOSPHATE [Suspect]
     Active Substance: OSELTAMIVIR PHOSPHATE
     Dosage: 12.5 GRAM
  1441. OSELTAMIVIR PHOSPHATE [Suspect]
     Active Substance: OSELTAMIVIR PHOSPHATE
     Dosage: UNK
     Route: 065
  1442. OSELTAMIVIR PHOSPHATE [Suspect]
     Active Substance: OSELTAMIVIR PHOSPHATE
     Dosage: 133 MILLILITRE
  1443. .ALPHA.-TOCOPHEROL, DL- [Suspect]
     Active Substance: .ALPHA.-TOCOPHEROL, DL-
     Indication: Nutritional supplementation
     Dosage: 12.5 GRAM
     Route: 042
  1444. .ALPHA.-TOCOPHEROL, DL- [Suspect]
     Active Substance: .ALPHA.-TOCOPHEROL, DL-
     Indication: Product used for unknown indication
     Dosage: UNK
     Route: 042
  1445. .ALPHA.-TOCOPHEROL, DL- [Suspect]
     Active Substance: .ALPHA.-TOCOPHEROL, DL-
     Dosage: 12.5 GRAM, DOSAGE FORM:CAPSULE
     Route: 042
  1446. .ALPHA.-TOCOPHEROL, DL- [Suspect]
     Active Substance: .ALPHA.-TOCOPHEROL, DL-
     Dosage: 12.5 MILLIGRAM
     Route: 042
  1447. .ALPHA.-TOCOPHEROL, DL- [Suspect]
     Active Substance: .ALPHA.-TOCOPHEROL, DL-
     Dosage: 12.5 MILLILITER
     Route: 042
  1448. .ALPHA.-TOCOPHEROL, DL- [Suspect]
     Active Substance: .ALPHA.-TOCOPHEROL, DL-
     Dosage: UNK
     Route: 065
  1449. NOREPINEPHRINE BITARTRATE [Suspect]
     Active Substance: NOREPINEPHRINE BITARTRATE
     Indication: Stress
     Dosage: UNK UNK, QD
     Route: 048
  1450. NOREPINEPHRINE BITARTRATE [Suspect]
     Active Substance: NOREPINEPHRINE BITARTRATE
     Indication: Product used for unknown indication
     Dosage: 3 MILLIGRAM, 1 DOSE PER 1 D
     Route: 048
  1451. NOREPINEPHRINE BITARTRATE [Suspect]
     Active Substance: NOREPINEPHRINE BITARTRATE
     Indication: Nutritional supplementation
     Dosage: UNK
     Route: 042
  1452. NOREPINEPHRINE BITARTRATE [Suspect]
     Active Substance: NOREPINEPHRINE BITARTRATE
     Indication: Off label use
     Dosage: 1 DOSAGE FORM, 1 DOSE PER 1D
     Route: 042
  1453. NOREPINEPHRINE BITARTRATE [Suspect]
     Active Substance: NOREPINEPHRINE BITARTRATE
     Indication: Intentional product misuse
     Dosage: 3 MILLIGRAM
     Route: 065
  1454. NOREPINEPHRINE BITARTRATE [Suspect]
     Active Substance: NOREPINEPHRINE BITARTRATE
     Dosage: 3 MILLIGRAM
  1455. NOREPINEPHRINE BITARTRATE [Suspect]
     Active Substance: NOREPINEPHRINE BITARTRATE
     Dosage: 3 MILLIGRAM
     Route: 048
  1456. NOREPINEPHRINE BITARTRATE [Suspect]
     Active Substance: NOREPINEPHRINE BITARTRATE
     Dosage: UNK
     Route: 048
  1457. NOREPINEPHRINE BITARTRATE [Suspect]
     Active Substance: NOREPINEPHRINE BITARTRATE
     Dosage: 300 MILLIGRAM
     Route: 048
  1458. NOREPINEPHRINE BITARTRATE [Suspect]
     Active Substance: NOREPINEPHRINE BITARTRATE
     Dosage: UNK
     Route: 065
  1459. NOREPINEPHRINE BITARTRATE [Suspect]
     Active Substance: NOREPINEPHRINE BITARTRATE
     Dosage: UNK UNK, QD
     Route: 048
  1460. NOREPINEPHRINE BITARTRATE [Suspect]
     Active Substance: NOREPINEPHRINE BITARTRATE
     Dosage: 1 MILLIGRAM
     Route: 042
  1461. NOREPINEPHRINE BITARTRATE [Suspect]
     Active Substance: NOREPINEPHRINE BITARTRATE
     Dosage: 1 DOSAGE FORM
     Route: 065
  1462. NOREPINEPHRINE BITARTRATE [Suspect]
     Active Substance: NOREPINEPHRINE BITARTRATE
     Dosage: UNK , 1 DOSE PER 1 D
     Route: 042
  1463. NOREPINEPHRINE BITARTRATE [Suspect]
     Active Substance: NOREPINEPHRINE BITARTRATE
     Dosage: 1 MILLIGRAM, 1 DOSE PER 1 D
     Route: 048
  1464. NOREPINEPHRINE BITARTRATE [Suspect]
     Active Substance: NOREPINEPHRINE BITARTRATE
     Dosage: UNK
     Route: 048
  1465. NOREPINEPHRINE BITARTRATE [Suspect]
     Active Substance: NOREPINEPHRINE BITARTRATE
     Dosage: 1 DOSAGE FORM, 1 DOSE PER 1D
     Route: 048
  1466. NOREPINEPHRINE BITARTRATE [Suspect]
     Active Substance: NOREPINEPHRINE BITARTRATE
     Dosage: UNK
  1467. NOREPINEPHRINE BITARTRATE [Suspect]
     Active Substance: NOREPINEPHRINE BITARTRATE
     Dosage: UNK
     Route: 065
  1468. NOREPINEPHRINE BITARTRATE [Suspect]
     Active Substance: NOREPINEPHRINE BITARTRATE
     Dosage: UNK , 1 DOSE PER 1 D
     Route: 048
  1469. NOREPINEPHRINE BITARTRATE [Suspect]
     Active Substance: NOREPINEPHRINE BITARTRATE
     Dosage: 3 MILLIGRAM, DAILY
     Route: 048
  1470. NOREPINEPHRINE BITARTRATE [Suspect]
     Active Substance: NOREPINEPHRINE BITARTRATE
     Dosage: 3 MILLIGRAM, DAILY
     Route: 048
  1471. RINGERS AND DEXTROSE SOLUTION [Suspect]
     Active Substance: CALCIUM CHLORIDE\DEXTROSE\POTASSIUM CHLORIDE\SODIUM CHLORIDE
     Indication: Nutritional supplementation
     Dosage: UNK
     Route: 065
  1472. RINGERS AND DEXTROSE SOLUTION [Suspect]
     Active Substance: CALCIUM CHLORIDE\DEXTROSE\POTASSIUM CHLORIDE\SODIUM CHLORIDE
     Dosage: UNK
     Route: 065
  1473. RINGERS AND DEXTROSE SOLUTION [Suspect]
     Active Substance: CALCIUM CHLORIDE\DEXTROSE\POTASSIUM CHLORIDE\SODIUM CHLORIDE
     Dosage: 12.5 MILLIGRAM
     Route: 042
  1474. DIETARY SUPPLEMENT\HERBALS\MINERALS\VITAMINS [Suspect]
     Active Substance: DIETARY SUPPLEMENT\HERBALS\MINERALS\VITAMINS
     Indication: Product used for unknown indication
     Dosage: 12.5 MILLIGRAM
     Route: 065
  1475. UMECLIDINIUM BROMIDE [Suspect]
     Active Substance: UMECLIDINIUM BROMIDE
     Indication: Dyspnoea
     Dosage: 1 INTERNATIONAL UNIT 1 EVERY 1 DAYS ORAL
  1476. UMECLIDINIUM BROMIDE [Suspect]
     Active Substance: UMECLIDINIUM BROMIDE
     Dosage: 1 DOSAGE FORM
  1477. UMECLIDINIUM BROMIDE [Suspect]
     Active Substance: UMECLIDINIUM BROMIDE
     Dosage: UNK
     Route: 065
  1478. UMECLIDINIUM BROMIDE [Suspect]
     Active Substance: UMECLIDINIUM BROMIDE
     Dosage: UNK UNK, 1 DOSE PER 1D
  1479. SODIUM PHOSPHATE, MONOBASIC [Suspect]
     Active Substance: SODIUM PHOSPHATE, MONOBASIC
     Indication: Constipation
     Dosage: 133 MILLILITER RECTAL
  1480. SODIUM PHOSPHATE, MONOBASIC [Suspect]
     Active Substance: SODIUM PHOSPHATE, MONOBASIC
     Dosage: 133 MILLILITER, AS NECESSARY
     Route: 054
  1481. SODIUM PHOSPHATE, MONOBASIC [Suspect]
     Active Substance: SODIUM PHOSPHATE, MONOBASIC
     Dosage: 133 MILLILITER, PRN
     Route: 065
  1482. SODIUM PHOSPHATE, MONOBASIC [Suspect]
     Active Substance: SODIUM PHOSPHATE, MONOBASIC
     Dosage: 133 MILLILITER  UNK
     Route: 054
  1483. POTASSIUM CHLORIDE [Suspect]
     Active Substance: POTASSIUM CHLORIDE
     Indication: Product used for unknown indication
     Dosage: UNK
     Route: 065
  1484. POTASSIUM CHLORIDE [Suspect]
     Active Substance: POTASSIUM CHLORIDE
     Indication: Constipation
     Dosage: 17 GRAM 1 EVERY 1 DAYS ORAL
  1485. POTASSIUM CHLORIDE [Suspect]
     Active Substance: POTASSIUM CHLORIDE
     Dosage: 17 MILLIGRAM, 1 DOSE PER 1D
  1486. POTASSIUM CHLORIDE [Suspect]
     Active Substance: POTASSIUM CHLORIDE
     Dosage: UNK, DOSAGE NOT SPECIFIED
     Route: 065
  1487. POTASSIUM CHLORIDE [Suspect]
     Active Substance: POTASSIUM CHLORIDE
     Dosage: 17 MILLIGRAM
  1488. POTASSIUM CHLORIDE [Suspect]
     Active Substance: POTASSIUM CHLORIDE
     Dosage: UNK
     Route: 065
  1489. POTASSIUM CHLORIDE [Suspect]
     Active Substance: POTASSIUM CHLORIDE
     Dosage: UNK
     Route: 065
  1490. POTASSIUM CHLORIDE [Suspect]
     Active Substance: POTASSIUM CHLORIDE
     Dosage: UNK
     Route: 065
  1491. POTASSIUM CHLORIDE [Suspect]
     Active Substance: POTASSIUM CHLORIDE
     Dosage: 17 GRAM
     Route: 048
  1492. POTASSIUM CHLORIDE [Suspect]
     Active Substance: POTASSIUM CHLORIDE
     Dosage: UNK
     Route: 065
  1493. POTASSIUM CHLORIDE [Suspect]
     Active Substance: POTASSIUM CHLORIDE
     Dosage: UNK, DOSAGE NOT SPECIFIED
     Route: 065
  1494. POTASSIUM CHLORIDE [Suspect]
     Active Substance: POTASSIUM CHLORIDE
     Dosage: 17 GRAM 1 EVERY 1 DAYS ORAL
  1495. POTASSIUM CHLORIDE [Suspect]
     Active Substance: POTASSIUM CHLORIDE
     Dosage: 17 MILLIGRAM, QD; DOSAGE NOT SPECIFIED
     Route: 048
  1496. POTASSIUM CHLORIDE [Suspect]
     Active Substance: POTASSIUM CHLORIDE
     Dosage: UNK, DOSAGE NOT SPECIFIED
     Route: 065
  1497. POTASSIUM CHLORIDE [Suspect]
     Active Substance: POTASSIUM CHLORIDE
     Dosage: UNK, DOSAGE NOT SPECIFIED
     Route: 065
  1498. POTASSIUM CHLORIDE [Suspect]
     Active Substance: POTASSIUM CHLORIDE
     Dosage: 17 MILLIGRAM, QD
     Route: 065
  1499. POTASSIUM CHLORIDE [Suspect]
     Active Substance: POTASSIUM CHLORIDE
     Dosage: UNK
     Route: 065
  1500. CHLORAMPHENICOL\HYDROCORTISONE [Suspect]
     Active Substance: CHLORAMPHENICOL\HYDROCORTISONE
     Indication: Bacterial infection
     Dosage: UNK; (DOSAGE FORM: NOT SPECIFIED)
     Route: 065
  1501. CHLORAMPHENICOL\HYDROCORTISONE [Suspect]
     Active Substance: CHLORAMPHENICOL\HYDROCORTISONE
     Indication: Anaemia
     Dosage: 500 MILLIGRAM, 1 EVERY 8 HOURS
     Route: 065
  1502. CHLORAMPHENICOL\HYDROCORTISONE [Suspect]
     Active Substance: CHLORAMPHENICOL\HYDROCORTISONE
     Dosage: 1500 MG DOSAGE NOT SPECIFIED
     Route: 065
  1503. CHLORAMPHENICOL\HYDROCORTISONE [Suspect]
     Active Substance: CHLORAMPHENICOL\HYDROCORTISONE
     Dosage: UNK; (DOSAGE FORM: NOT SPECIFIED)
     Route: 065
  1504. BISACODYL [Suspect]
     Active Substance: BISACODYL
     Indication: Constipation
     Dosage: 10 MILLIGRAM (DOSAGE FORM: NOT SPECIFIED)
     Route: 054
  1505. BISACODYL [Suspect]
     Active Substance: BISACODYL
     Dosage: 10 MILLIGRAM, PRN
     Route: 065
  1506. PHYTONADIONE [Suspect]
     Active Substance: PHYTONADIONE
     Indication: Vitamin supplementation
     Dosage: 5 MILLIGRAM, PRN
     Route: 042
  1507. PHYTONADIONE [Suspect]
     Active Substance: PHYTONADIONE
     Dosage: 5 MILLIGRAM
     Route: 042
  1508. PHYTONADIONE [Suspect]
     Active Substance: PHYTONADIONE
     Dosage: 5 MILLIGRAM, QD
     Route: 042
  1509. PHYTONADIONE [Suspect]
     Active Substance: PHYTONADIONE
     Dosage: 5 MG, QD
     Route: 042
  1510. PHYTONADIONE [Suspect]
     Active Substance: PHYTONADIONE
     Dosage: 5 MILLIGRAM
     Route: 042
  1511. MAGNESIUM OXIDE [Suspect]
     Active Substance: MAGNESIUM OXIDE
     Indication: Constipation
     Dosage: 133 MILLILITER AS REQUIRED
     Route: 054
  1512. MAGNESIUM OXIDE [Suspect]
     Active Substance: MAGNESIUM OXIDE
     Indication: Product used for unknown indication
     Dosage: UNK
     Route: 065
  1513. MAGNESIUM OXIDE [Suspect]
     Active Substance: MAGNESIUM OXIDE
     Dosage: UNK
     Route: 065
  1514. MAGNESIUM OXIDE [Suspect]
     Active Substance: MAGNESIUM OXIDE
     Dosage: 133 MILLILITER
     Route: 065
  1515. MAGNESIUM OXIDE [Suspect]
     Active Substance: MAGNESIUM OXIDE
     Dosage: 1333 MILLILITER, PRN
     Route: 065
  1516. MAGNESIUM OXIDE [Suspect]
     Active Substance: MAGNESIUM OXIDE
     Dosage: 113 MILLILITER, PRN
     Route: 054
  1517. MAGNESIUM OXIDE [Suspect]
     Active Substance: MAGNESIUM OXIDE
     Dosage: UNK
     Route: 065
  1518. ALUMINUM HYDROXIDE\MAGNESIUM HYDROXIDE [Suspect]
     Active Substance: ALUMINUM HYDROXIDE\MAGNESIUM HYDROXIDE
     Indication: Constipation
     Dosage: UNK
     Route: 054
  1519. ALUMINUM HYDROXIDE\MAGNESIUM HYDROXIDE [Suspect]
     Active Substance: ALUMINUM HYDROXIDE\MAGNESIUM HYDROXIDE
     Dosage: 133 ML, PRN, AS NECESSARY; DRY SUSPENSION GRANULE
     Route: 054
  1520. ALUMINUM HYDROXIDE\MAGNESIUM HYDROXIDE [Suspect]
     Active Substance: ALUMINUM HYDROXIDE\MAGNESIUM HYDROXIDE
     Dosage: 133 ML, AS NEEDED; DRY SUSPENSION GRANULE
     Route: 065
  1521. ALUMINUM HYDROXIDE\MAGNESIUM HYDROXIDE [Suspect]
     Active Substance: ALUMINUM HYDROXIDE\MAGNESIUM HYDROXIDE
     Dosage: 133 MILLILITER
     Route: 054
  1522. ALUMINUM HYDROXIDE\MAGNESIUM HYDROXIDE [Suspect]
     Active Substance: ALUMINUM HYDROXIDE\MAGNESIUM HYDROXIDE
     Dosage: 133 MILLILITER
     Route: 054
  1523. ALUMINUM HYDROXIDE\MAGNESIUM HYDROXIDE [Suspect]
     Active Substance: ALUMINUM HYDROXIDE\MAGNESIUM HYDROXIDE
     Dosage: 133 ML, PRN, AS NECESSARY
     Route: 054
  1524. ALUMINUM HYDROXIDE\MAGNESIUM HYDROXIDE [Suspect]
     Active Substance: ALUMINUM HYDROXIDE\MAGNESIUM HYDROXIDE
     Dosage: 133 ML 1 EVERY 1 DAY
     Route: 054
  1525. ALUMINUM HYDROXIDE\MAGNESIUM HYDROXIDE [Suspect]
     Active Substance: ALUMINUM HYDROXIDE\MAGNESIUM HYDROXIDE
     Dosage: 133 ML, PRN, AS NECESSARY
     Route: 054
  1526. FURAZOLIDONE [Suspect]
     Active Substance: FURAZOLIDONE
     Indication: Product used for unknown indication
     Dosage: 12.5 MILLIGRAM, 1 DOSE PER 1D
     Route: 042
  1527. FURAZOLIDONE [Suspect]
     Active Substance: FURAZOLIDONE
     Indication: Product used for unknown indication
     Dosage: 1.25 MILLIGRAM, QD
     Route: 042
  1528. FURAZOLIDONE [Suspect]
     Active Substance: FURAZOLIDONE
     Dosage: 12.5 MILLIGRAM
     Route: 065
  1529. FURAZOLIDONE [Suspect]
     Active Substance: FURAZOLIDONE
     Dosage: UNK
     Route: 065
  1530. FURAZOLIDONE [Suspect]
     Active Substance: FURAZOLIDONE
     Dosage: UNK (DOSAGE FORM : NOT SPECIFIED)
     Route: 065
  1531. FURAZOLIDONE [Suspect]
     Active Substance: FURAZOLIDONE
     Dosage: UNK
  1532. FURAZOLIDONE [Suspect]
     Active Substance: FURAZOLIDONE
     Dosage: 12.5 MILLIGRAM
     Route: 042
  1533. FURAZOLIDONE [Suspect]
     Active Substance: FURAZOLIDONE
     Dosage: UNK
     Route: 065
  1534. OTRIVIN [Suspect]
     Active Substance: XYLOMETAZOLINE
     Indication: Dyspnoea
     Dosage: UNK
     Route: 065
  1535. OTRIVIN [Suspect]
     Active Substance: XYLOMETAZOLINE
     Dosage: 1 DF, QD
     Route: 065
  1536. OTRIVIN [Suspect]
     Active Substance: XYLOMETAZOLINE
     Dosage: UNK (DOSAGE FORM: SPRAY (NOT INHALATION))
  1537. OTRIVIN [Suspect]
     Active Substance: XYLOMETAZOLINE
     Dosage: UNK
     Route: 050
  1538. OTRIVIN [Suspect]
     Active Substance: XYLOMETAZOLINE
     Dosage: UNK, DOSAGE FORM NOT SPECIFIED
  1539. OTRIVIN [Suspect]
     Active Substance: XYLOMETAZOLINE
     Dosage: UNK
     Route: 065
  1540. CARBOHYDRATES\FATTY ACIDS\MINERALS\PROTEIN\VITAMINS [Suspect]
     Active Substance: CARBOHYDRATES\FATTY ACIDS\MINERALS\PROTEIN\VITAMINS
     Indication: Vitamin D
     Dosage: UNK
     Route: 065
  1541. CARBOHYDRATES\FATTY ACIDS\MINERALS\PROTEIN\VITAMINS [Suspect]
     Active Substance: CARBOHYDRATES\FATTY ACIDS\MINERALS\PROTEIN\VITAMINS
     Indication: Vitamin supplementation
     Dosage: 5 MILLIGRAM, QD
     Route: 065
  1542. CARBOHYDRATES\FATTY ACIDS\MINERALS\PROTEIN\VITAMINS [Suspect]
     Active Substance: CARBOHYDRATES\FATTY ACIDS\MINERALS\PROTEIN\VITAMINS
     Dosage: 5 MILLIGRAM, QD
     Route: 042
  1543. CARBOHYDRATES\FATTY ACIDS\MINERALS\PROTEIN\VITAMINS [Suspect]
     Active Substance: CARBOHYDRATES\FATTY ACIDS\MINERALS\PROTEIN\VITAMINS
     Dosage: UNK
     Route: 065
  1544. FLUTICASONE PROPIONATE\SALMETEROL XINAFOATE [Suspect]
     Active Substance: FLUTICASONE PROPIONATE\SALMETEROL XINAFOATE
     Indication: Nutritional supplementation
     Dosage: UNK; DOSAGE FORM: NOT SPECIFIED
     Route: 065
  1545. FLUTICASONE PROPIONATE\SALMETEROL XINAFOATE [Suspect]
     Active Substance: FLUTICASONE PROPIONATE\SALMETEROL XINAFOATE
     Dosage: UNK; DOSAGE FORM: NOT SPECIFIED
     Route: 065
  1546. FLUTICASONE PROPIONATE\SALMETEROL XINAFOATE [Suspect]
     Active Substance: FLUTICASONE PROPIONATE\SALMETEROL XINAFOATE
     Dosage: 1 INTERNATIONAL UNIT; DOSAGE FORM: NOT SPECIFIED
     Route: 048
  1547. HEPARIN CALCIUM [Suspect]
     Active Substance: HEPARIN CALCIUM
     Indication: Anticoagulant therapy
     Dosage: 50 ML, PRN, AS NECESSARY
     Route: 042
  1548. HEPARIN CALCIUM [Suspect]
     Active Substance: HEPARIN CALCIUM
     Dosage: UNK
     Route: 065
  1549. HEPARIN CALCIUM [Suspect]
     Active Substance: HEPARIN CALCIUM
     Dosage: 50 MILLILITER
     Route: 042
  1550. BIOTIN [Suspect]
     Active Substance: BIOTIN
     Indication: Vitamin supplementation
     Dosage: 5 MILLIGRAM, 1 DOSE PER 1 D
     Route: 042
  1551. BIOTIN [Suspect]
     Active Substance: BIOTIN
     Indication: Constipation
     Dosage: 17 GRAM, 1 /DAY (1 EVERY 1 DAYS)UNK
     Route: 042
  1552. BIOTIN [Suspect]
     Active Substance: BIOTIN
     Indication: Product used for unknown indication
     Dosage: UNK, DOSAGE FORM: NOT SPECIFIED
     Route: 065
  1553. BIOTIN [Suspect]
     Active Substance: BIOTIN
     Dosage: 5 MILLIGRAM INTRAVENOUS
     Route: 042
  1554. BIOTIN [Suspect]
     Active Substance: BIOTIN
     Dosage: 17 MILLIGRAM, 1 DOSE PER 1 D
     Route: 042
  1555. BIOTIN [Suspect]
     Active Substance: BIOTIN
     Dosage: UNK
     Route: 065
  1556. BIOTIN [Suspect]
     Active Substance: BIOTIN
     Dosage: UNK
  1557. BISMUTH SUBGALLATE\BUFEXAMAC\LIDOCAINE HYDROCHLORIDE\TITANIUM DIOXIDE [Suspect]
     Active Substance: BISMUTH SUBGALLATE\BUFEXAMAC\LIDOCAINE HYDROCHLORIDE\TITANIUM DIOXIDE
     Indication: Constipation
     Dosage: 133 MILLILITER, AS NECESARRY
     Route: 054
  1558. BISMUTH SUBGALLATE\BUFEXAMAC\LIDOCAINE HYDROCHLORIDE\TITANIUM DIOXIDE [Suspect]
     Active Substance: BISMUTH SUBGALLATE\BUFEXAMAC\LIDOCAINE HYDROCHLORIDE\TITANIUM DIOXIDE
     Dosage: 133 MILLILITER, AS NECESARRY
     Route: 054
  1559. BISMUTH SUBGALLATE\BUFEXAMAC\LIDOCAINE HYDROCHLORIDE\TITANIUM DIOXIDE [Suspect]
     Active Substance: BISMUTH SUBGALLATE\BUFEXAMAC\LIDOCAINE HYDROCHLORIDE\TITANIUM DIOXIDE
     Dosage: 133 MILLILITER, AS NECESARRY
     Route: 065
  1560. BISMUTH SUBGALLATE\BUFEXAMAC\LIDOCAINE HYDROCHLORIDE\TITANIUM DIOXIDE [Suspect]
     Active Substance: BISMUTH SUBGALLATE\BUFEXAMAC\LIDOCAINE HYDROCHLORIDE\TITANIUM DIOXIDE
     Dosage: 133 MILLIGRAM
     Route: 054
  1561. BISMUTH SUBGALLATE\BUFEXAMAC\LIDOCAINE HYDROCHLORIDE\TITANIUM DIOXIDE [Suspect]
     Active Substance: BISMUTH SUBGALLATE\BUFEXAMAC\LIDOCAINE HYDROCHLORIDE\TITANIUM DIOXIDE
     Dosage: 133 MILLIGRAM
     Route: 065
  1562. HERBALS [Suspect]
     Active Substance: HERBALS
     Indication: Nutritional supplementation
     Dosage: 12.5 MILLIGRAM
     Route: 065
  1563. HERBALS [Suspect]
     Active Substance: HERBALS
     Dosage: 12.5 MILLIGRAM
     Route: 065
  1564. HERBALS [Suspect]
     Active Substance: HERBALS
     Dosage: 12 MILLIGRAM, DOSAGE FORM: NOT SPECIFIED
     Route: 065
  1565. MAGNESIUM CARBONATE [Suspect]
     Active Substance: MAGNESIUM CARBONATE
     Indication: Constipation
     Dosage: 133 ML, PRN, AS NECESSARY
     Route: 065
  1566. MAGNESIUM CARBONATE [Suspect]
     Active Substance: MAGNESIUM CARBONATE
     Dosage: 133 ML, 1 EVERY 1 DAY, AS NECESSARY
     Route: 065
  1567. HYDROMORPHONE HYDROCHLORIDE [Suspect]
     Active Substance: HYDROMORPHONE HYDROCHLORIDE
     Indication: Analgesic therapy
     Dosage: 1 MILLIGRAM, QD
     Route: 058
  1568. HYDROMORPHONE HYDROCHLORIDE [Suspect]
     Active Substance: HYDROMORPHONE HYDROCHLORIDE
     Indication: Off label use
     Dosage: 17 MILLIGRAM, QD
     Route: 065
  1569. HYDROMORPHONE HYDROCHLORIDE [Suspect]
     Active Substance: HYDROMORPHONE HYDROCHLORIDE
     Indication: Intentional product misuse
     Dosage: 1 MILLIGRAM, 1 EVERY4 WEEKS, QM
     Route: 058
  1570. HYDROMORPHONE HYDROCHLORIDE [Suspect]
     Active Substance: HYDROMORPHONE HYDROCHLORIDE
     Indication: Product used for unknown indication
     Dosage: 1 MILLIGRAM,QD
     Route: 058
  1571. HYDROMORPHONE HYDROCHLORIDE [Suspect]
     Active Substance: HYDROMORPHONE HYDROCHLORIDE
     Dosage: 24 MILLIGRAM, QID
     Route: 058
  1572. HYDROMORPHONE HYDROCHLORIDE [Suspect]
     Active Substance: HYDROMORPHONE HYDROCHLORIDE
     Dosage: 1 MILLIGRAM, Q4H (DOSAGE FORM: NOT SPECIFIED)
     Route: 058
  1573. HYDROMORPHONE HYDROCHLORIDE [Suspect]
     Active Substance: HYDROMORPHONE HYDROCHLORIDE
     Dosage: 1 MILLIGRAM, QD
     Route: 058
  1574. HYDROMORPHONE HYDROCHLORIDE [Suspect]
     Active Substance: HYDROMORPHONE HYDROCHLORIDE
     Dosage: 96 MILLIGRAM, QD
     Route: 058
  1575. HYDROMORPHONE HYDROCHLORIDE [Suspect]
     Active Substance: HYDROMORPHONE HYDROCHLORIDE
     Dosage: 24 MILLIGRAM, QD
     Route: 058
  1576. HYDROMORPHONE HYDROCHLORIDE [Suspect]
     Active Substance: HYDROMORPHONE HYDROCHLORIDE
     Dosage: 6 MILLIGRAM
     Route: 058
  1577. HYDROMORPHONE HYDROCHLORIDE [Suspect]
     Active Substance: HYDROMORPHONE HYDROCHLORIDE
     Dosage: 6 MILLIGRAM, 4 EVERY 1 DAYS
     Route: 058
  1578. HYDROMORPHONE HYDROCHLORIDE [Suspect]
     Active Substance: HYDROMORPHONE HYDROCHLORIDE
     Dosage: 6 MILLIGRAM, Q6H
     Route: 058
  1579. HYDROMORPHONE HYDROCHLORIDE [Suspect]
     Active Substance: HYDROMORPHONE HYDROCHLORIDE
     Dosage: 1 MILLIGRAM, Q6H
     Route: 058
  1580. HYDROMORPHONE HYDROCHLORIDE [Suspect]
     Active Substance: HYDROMORPHONE HYDROCHLORIDE
     Dosage: 1 MILLIGRAM, Q4D
     Route: 058
  1581. HYDROMORPHONE HYDROCHLORIDE [Suspect]
     Active Substance: HYDROMORPHONE HYDROCHLORIDE
     Dosage: 6 MILLIGRAM, QID
     Route: 058
  1582. HYDROMORPHONE HYDROCHLORIDE [Suspect]
     Active Substance: HYDROMORPHONE HYDROCHLORIDE
     Dosage: 4 MILLIGRAM, QID
     Route: 058
  1583. HYDROMORPHONE HYDROCHLORIDE [Suspect]
     Active Substance: HYDROMORPHONE HYDROCHLORIDE
     Dosage: 6 MILLIGRAM, Q5H
     Route: 058
  1584. HYDROMORPHONE HYDROCHLORIDE [Suspect]
     Active Substance: HYDROMORPHONE HYDROCHLORIDE
     Dosage: 24 MILLIGRAM, Q4D
     Route: 058
  1585. HYDROMORPHONE HYDROCHLORIDE [Suspect]
     Active Substance: HYDROMORPHONE HYDROCHLORIDE
     Dosage: 6 MILLIGRAM, Q4H
     Route: 058
  1586. HYDROMORPHONE HYDROCHLORIDE [Suspect]
     Active Substance: HYDROMORPHONE HYDROCHLORIDE
     Dosage: 6 MILLIGRAM, QID
     Route: 058
  1587. HYDROMORPHONE HYDROCHLORIDE [Suspect]
     Active Substance: HYDROMORPHONE HYDROCHLORIDE
     Dosage: 1 MILLIGRAM, Q4H
     Route: 058
  1588. HYDROMORPHONE HYDROCHLORIDE [Suspect]
     Active Substance: HYDROMORPHONE HYDROCHLORIDE
     Dosage: 4 MILLIGRAM, QD
     Route: 058
  1589. HYDROMORPHONE HYDROCHLORIDE [Suspect]
     Active Substance: HYDROMORPHONE HYDROCHLORIDE
     Dosage: 1 MILLIGRAM
     Route: 058
  1590. HYDROMORPHONE HYDROCHLORIDE [Suspect]
     Active Substance: HYDROMORPHONE HYDROCHLORIDE
     Dosage: 24 MILLIGRAM, Q6H
     Route: 058
  1591. HYDROMORPHONE HYDROCHLORIDE [Suspect]
     Active Substance: HYDROMORPHONE HYDROCHLORIDE
     Dosage: 6 MILLIGRAM, Q6H
     Route: 058
  1592. HYDROMORPHONE HYDROCHLORIDE [Suspect]
     Active Substance: HYDROMORPHONE HYDROCHLORIDE
     Dosage: 1 MILLIGRAM, QD, (DOSAGE FORM: SOLUTION INTRAMUSCULAR)
     Route: 058
  1593. HYDROMORPHONE HYDROCHLORIDE [Suspect]
     Active Substance: HYDROMORPHONE HYDROCHLORIDE
     Dosage: 6 MILLIGRAM, Q6H, (DOSAGE FORM: SOLUTION INTRAMUSCULAR)
     Route: 058
  1594. HYDROMORPHONE HYDROCHLORIDE [Suspect]
     Active Substance: HYDROMORPHONE HYDROCHLORIDE
     Dosage: 1 MILLIGRAM, Q4H, (DOSAGE FORM: SOLUTION INTRAMUSCULAR)
     Route: 058
  1595. HYDROMORPHONE HYDROCHLORIDE [Suspect]
     Active Substance: HYDROMORPHONE HYDROCHLORIDE
     Dosage: 6 MILLIGRAM, 1 EVERY 6 DAYS, (DOSAGE FORM: SOLUTION INTRAMUSCULAR)
     Route: 058
  1596. HYDROMORPHONE HYDROCHLORIDE [Suspect]
     Active Substance: HYDROMORPHONE HYDROCHLORIDE
     Dosage: 6 MILLIGRAM
     Route: 058
  1597. HYDROMORPHONE HYDROCHLORIDE [Suspect]
     Active Substance: HYDROMORPHONE HYDROCHLORIDE
     Dosage: 4 MILLIGRAM, Q4H, (DOSAGE FORM: SOLUTION INTRAMUSCULAR)
     Route: 058
  1598. HYDROMORPHONE HYDROCHLORIDE [Suspect]
     Active Substance: HYDROMORPHONE HYDROCHLORIDE
     Dosage: UNK; (DOSAGE FORM: SOLUTION INTRAMUSCULAR)
     Route: 065
  1599. HYDROMORPHONE HYDROCHLORIDE [Suspect]
     Active Substance: HYDROMORPHONE HYDROCHLORIDE
     Dosage: 6 MILLIGRAM, Q6H, (DOSAGE FORM: SOLUTION INTRAMUSCULAR)
     Route: 058
  1600. HYDROMORPHONE HYDROCHLORIDE [Suspect]
     Active Substance: HYDROMORPHONE HYDROCHLORIDE
     Dosage: 4 MILLIGRAM, Q4H, (DOSAGE FORM: SOLUTION INTRAMUSCULAR)
     Route: 058
  1601. HYDROMORPHONE HYDROCHLORIDE [Suspect]
     Active Substance: HYDROMORPHONE HYDROCHLORIDE
     Dosage: 6 MILLIGRAM, Q5D, (DOSAGE FORM: SOLUTION INTRAMUSCULAR)
     Route: 058
  1602. HYDROMORPHONE HYDROCHLORIDE [Suspect]
     Active Substance: HYDROMORPHONE HYDROCHLORIDE
     Dosage: 6 MILLIGRAM, Q4H, (DOSAGE FORM: SOLUTION INTRAMUSCULAR)
     Route: 058
  1603. HYDROMORPHONE HYDROCHLORIDE [Suspect]
     Active Substance: HYDROMORPHONE HYDROCHLORIDE
     Dosage: 6 MILLIGRAM, Q5H, (DOSAGE FORM: SOLUTION INTRAMUSCULAR)
     Route: 058
  1604. HYDROMORPHONE HYDROCHLORIDE [Suspect]
     Active Substance: HYDROMORPHONE HYDROCHLORIDE
     Dosage: 1 MILLIGRAM, QD, (DOSAGE FORM: SOLUTION INTRAMUSCULAR)
     Route: 058
  1605. HYDROMORPHONE HYDROCHLORIDE [Suspect]
     Active Substance: HYDROMORPHONE HYDROCHLORIDE
     Dosage: 24 MILLIGRAM, Q6H(DOSAGE FORM: SOLUTION INTRAMUSCULAR)
     Route: 065
  1606. HYDROMORPHONE HYDROCHLORIDE [Suspect]
     Active Substance: HYDROMORPHONE HYDROCHLORIDE
     Dosage: 24 MILLIGRAM, Q4H(DOSAGE FORM: SOLUTION INTRAMUSCULAR)
     Route: 058
  1607. HYDROMORPHONE HYDROCHLORIDE [Suspect]
     Active Substance: HYDROMORPHONE HYDROCHLORIDE
     Dosage: 17 MILLIGRAM, QD, (DOSAGE FORM: SOLUTION INTRAMUSCULAR)
     Route: 058
  1608. HYDROMORPHONE HYDROCHLORIDE [Suspect]
     Active Substance: HYDROMORPHONE HYDROCHLORIDE
     Dosage: 1 MILLIGRAM, (DOSAGE FORM: SOLUTION INTRAMUSCULAR)
     Route: 058
  1609. HYDROMORPHONE HYDROCHLORIDE [Suspect]
     Active Substance: HYDROMORPHONE HYDROCHLORIDE
     Dosage: 1 MILLIGRAM, 1 EVERY 6 DAYS (DOSAGE FORM: SOLUTION INTRAMUSCULAR)
     Route: 058
  1610. HYDROMORPHONE HYDROCHLORIDE [Suspect]
     Active Substance: HYDROMORPHONE HYDROCHLORIDE
     Dosage: 1 MILLIGRAM, Q4H(DOSAGE FORM: SOLUTION INTRAMUSCULAR)
     Route: 058
  1611. HYDROMORPHONE HYDROCHLORIDE [Suspect]
     Active Substance: HYDROMORPHONE HYDROCHLORIDE
     Dosage: 1 MILLIGRAM, QD, (DOSAGE FORM: SOLUTION INTRAMUSCULAR)
     Route: 058
  1612. HYDROMORPHONE HYDROCHLORIDE [Suspect]
     Active Substance: HYDROMORPHONE HYDROCHLORIDE
     Dosage: 96 MILLIGRAM, QD, (DOSAGE FORM: SOLUTION INTRAMUSCULAR)
     Route: 058
  1613. HORSE CHESTNUT [Suspect]
     Active Substance: HORSE CHESTNUT
     Indication: Constipation
     Dosage: 17 GRAM 1 EVERY 1 DAYS
     Route: 065
  1614. HORSE CHESTNUT [Suspect]
     Active Substance: HORSE CHESTNUT
     Dosage: UNK
     Route: 065
  1615. FISH OIL [Suspect]
     Active Substance: FISH OIL
     Indication: Nutritional supplementation
     Dosage: 12.5 GRAM
     Route: 065

REACTIONS (82)
  - Abdominal distension [Fatal]
  - Appendicitis [Fatal]
  - Appendicolith [Fatal]
  - Ascites [Fatal]
  - Cardiogenic shock [Fatal]
  - General physical health deterioration [Fatal]
  - Hyponatraemia [Fatal]
  - Multiple organ dysfunction syndrome [Fatal]
  - Sepsis [Fatal]
  - Stress [Fatal]
  - Abdominal pain [Fatal]
  - Constipation [Fatal]
  - Nausea [Fatal]
  - Vomiting [Fatal]
  - Off label use [Fatal]
  - Ventricular fibrillation [Fatal]
  - Off label use [Fatal]
  - Blood phosphorus increased [Fatal]
  - Death [Fatal]
  - Somnolence [Fatal]
  - Condition aggravated [Fatal]
  - Dry mouth [Fatal]
  - Somnolence [Fatal]
  - Blood cholesterol increased [Fatal]
  - Blood uric acid increased [Fatal]
  - Myasthenia gravis [Fatal]
  - Neuralgia [Fatal]
  - Pulmonary embolism [Fatal]
  - Analgesic therapy [Fatal]
  - Iron deficiency [Fatal]
  - Hyperphosphataemia [Fatal]
  - Intentional product misuse [Fatal]
  - Dyspnoea [Fatal]
  - Drug hypersensitivity [Fatal]
  - Hypophosphataemia [Fatal]
  - Diabetes mellitus [Fatal]
  - Swelling [Fatal]
  - Sleep disorder [Fatal]
  - Anaemia [Fatal]
  - Thrombosis [Fatal]
  - Drug intolerance [Fatal]
  - Drug therapy [Fatal]
  - Bacterial infection [Fatal]
  - Chronic obstructive pulmonary disease [Fatal]
  - Sleep disorder therapy [Fatal]
  - Drug hypersensitivity [Fatal]
  - Hypophosphataemia [Fatal]
  - Intentional product misuse [Fatal]
  - Incorrect route of product administration [Fatal]
  - Product use in unapproved indication [Fatal]
  - Off label use [Fatal]
  - Blood uric acid increased [Fatal]
  - Abdominal distension [Fatal]
  - Vomiting [Fatal]
  - Hyponatraemia [Fatal]
  - Drug ineffective [Fatal]
  - Product use in unapproved indication [Fatal]
  - Ulcer [Fatal]
  - Gout [Fatal]
  - Pneumonia [Fatal]
  - Hypertension [Fatal]
  - Liver function test increased [Fatal]
  - Blood creatinine increased [Fatal]
  - Lung opacity [Fatal]
  - Oedema peripheral [Fatal]
  - Bacteroides infection [Fatal]
  - End stage renal disease [Fatal]
  - Blood test abnormal [Fatal]
  - Aortic stenosis [Fatal]
  - Troponin increased [Fatal]
  - Pleural effusion [Fatal]
  - Transaminases increased [Fatal]
  - Anticoagulant therapy [Fatal]
  - Activated partial thromboplastin time prolonged [Fatal]
  - Drug hypersensitivity [Fatal]
  - Antacid therapy [Fatal]
  - Lower respiratory tract infection [Fatal]
  - Aspartate aminotransferase increased [Fatal]
  - Hyperlipidaemia [Fatal]
  - Musculoskeletal stiffness [Fatal]
  - Total lung capacity decreased [Fatal]
  - Blood calcium increased [Fatal]

NARRATIVE: CASE EVENT DATE: 20200101
